FAERS Safety Report 23046017 (Version 8)
Quarter: 2025Q2

REPORT INFORMATION
  Report Type: Spontaneous
  Country: DE (occurrence: CA)
  Receive Date: 20231009
  Receipt Date: 20250617
  Transmission Date: 20250716
  Serious: Yes (Life-Threatening, Hospitalization, Other)
  Sender: ALCON
  Company Number: CA-ALCON LABORATORIES-ALC2022CA003214

PATIENT

DRUGS (1400)
  1. ACEBUTOLOL [Suspect]
     Active Substance: ACEBUTOLOL
     Indication: Angina pectoris
     Dosage: 100 MG, BID
     Route: 065
  2. ACEBUTOLOL [Suspect]
     Active Substance: ACEBUTOLOL
     Indication: Chest pain
     Dosage: 100 MG, BID
     Route: 065
  3. ACEBUTOLOL [Suspect]
     Active Substance: ACEBUTOLOL
     Indication: Coronary artery disease
     Dosage: 100 MG, BID
     Route: 065
  4. ACEBUTOLOL [Suspect]
     Active Substance: ACEBUTOLOL
     Indication: Hypertension
     Dosage: 100 MG, BID
     Route: 065
  5. ACEBUTOLOL [Suspect]
     Active Substance: ACEBUTOLOL
     Dosage: 100 MG, BID
     Route: 065
  6. ACEBUTOLOL [Suspect]
     Active Substance: ACEBUTOLOL
     Dosage: 100 MG, BID
     Route: 065
  7. ACEBUTOLOL [Suspect]
     Active Substance: ACEBUTOLOL
     Dosage: 100 MG, BID
     Route: 065
  8. ACEBUTOLOL [Suspect]
     Active Substance: ACEBUTOLOL
     Dosage: 100 MG, BID
     Route: 065
  9. ACEBUTOLOL [Suspect]
     Active Substance: ACEBUTOLOL
     Dosage: 100 MG, BID
     Route: 065
  10. ACEBUTOLOL [Suspect]
     Active Substance: ACEBUTOLOL
     Dosage: 100 MG, BID
     Route: 065
  11. ACEBUTOLOL [Suspect]
     Active Substance: ACEBUTOLOL
     Dosage: 100 MG, BID
     Route: 065
  12. ACEBUTOLOL [Suspect]
     Active Substance: ACEBUTOLOL
     Dosage: 100 MG, BID
     Route: 065
  13. ACEBUTOLOL [Suspect]
     Active Substance: ACEBUTOLOL
     Dosage: 100 MG, BID
     Route: 065
  14. ACEBUTOLOL [Suspect]
     Active Substance: ACEBUTOLOL
     Dosage: 200 MG
     Route: 065
  15. ACEBUTOLOL [Suspect]
     Active Substance: ACEBUTOLOL
     Dosage: 200 MG
     Route: 065
  16. ACEBUTOLOL [Suspect]
     Active Substance: ACEBUTOLOL
     Dosage: 200 MG
     Route: 065
  17. ACEBUTOLOL [Suspect]
     Active Substance: ACEBUTOLOL
     Dosage: 200 MG
     Route: 065
  18. ACEBUTOLOL [Suspect]
     Active Substance: ACEBUTOLOL
     Dosage: 200 MG
     Route: 065
  19. ACEBUTOLOL [Suspect]
     Active Substance: ACEBUTOLOL
     Dosage: 200 MG
     Route: 065
  20. ACEBUTOLOL [Suspect]
     Active Substance: ACEBUTOLOL
     Dosage: 200 MG
     Route: 065
  21. ACEBUTOLOL [Suspect]
     Active Substance: ACEBUTOLOL
     Dosage: 200 MG
     Route: 065
  22. ACEBUTOLOL [Suspect]
     Active Substance: ACEBUTOLOL
     Dosage: 200 MG
     Route: 065
  23. ACEBUTOLOL [Suspect]
     Active Substance: ACEBUTOLOL
     Dosage: 200 MG
     Route: 065
  24. ACEBUTOLOL [Suspect]
     Active Substance: ACEBUTOLOL
     Dosage: 200 MG
     Route: 065
  25. ACEBUTOLOL [Suspect]
     Active Substance: ACEBUTOLOL
     Dosage: 200 MG
     Route: 065
  26. ACEBUTOLOL [Suspect]
     Active Substance: ACEBUTOLOL
     Dosage: 200 MG
     Route: 065
  27. ACEBUTOLOL [Suspect]
     Active Substance: ACEBUTOLOL
     Dosage: 200 MG
     Route: 065
  28. ACEBUTOLOL [Suspect]
     Active Substance: ACEBUTOLOL
     Dosage: 50 MG, BID
     Route: 065
  29. ACEBUTOLOL [Suspect]
     Active Substance: ACEBUTOLOL
     Dosage: 50 MG, BID
     Route: 065
  30. ACEBUTOLOL [Suspect]
     Active Substance: ACEBUTOLOL
     Dosage: 50 MG, BID
     Route: 065
  31. ACEBUTOLOL [Suspect]
     Active Substance: ACEBUTOLOL
     Dosage: 50 MG, BID
     Route: 065
  32. ACEBUTOLOL HYDROCHLORIDE [Suspect]
     Active Substance: ACEBUTOLOL HYDROCHLORIDE
     Dosage: 100 MG, QD
     Route: 065
  33. ACEBUTOLOL HYDROCHLORIDE [Suspect]
     Active Substance: ACEBUTOLOL HYDROCHLORIDE
     Dosage: 100 MG, QD
     Route: 065
  34. ACEBUTOLOL HYDROCHLORIDE [Suspect]
     Active Substance: ACEBUTOLOL HYDROCHLORIDE
     Dosage: 100 MG, QD
     Route: 065
  35. ACEBUTOLOL HYDROCHLORIDE [Suspect]
     Active Substance: ACEBUTOLOL HYDROCHLORIDE
     Route: 065
  36. ACEBUTOLOL HYDROCHLORIDE [Suspect]
     Active Substance: ACEBUTOLOL HYDROCHLORIDE
     Route: 065
  37. ACEBUTOLOL HYDROCHLORIDE [Suspect]
     Active Substance: ACEBUTOLOL HYDROCHLORIDE
     Indication: Chest pain
     Dosage: 200 MG, QD
     Route: 065
  38. ACEBUTOLOL HYDROCHLORIDE [Suspect]
     Active Substance: ACEBUTOLOL HYDROCHLORIDE
     Indication: Chronic obstructive pulmonary disease
     Dosage: 200 MG, QD
     Route: 065
  39. ACEBUTOLOL HYDROCHLORIDE [Suspect]
     Active Substance: ACEBUTOLOL HYDROCHLORIDE
     Indication: Product used for unknown indication
     Dosage: 200 MG, QD
     Route: 065
  40. ACEBUTOLOL HYDROCHLORIDE [Suspect]
     Active Substance: ACEBUTOLOL HYDROCHLORIDE
     Dosage: 200 MG, QD
     Route: 065
  41. ACEBUTOLOL HYDROCHLORIDE [Suspect]
     Active Substance: ACEBUTOLOL HYDROCHLORIDE
     Dosage: 200 MG, QD
     Route: 065
  42. ACEBUTOLOL HYDROCHLORIDE [Suspect]
     Active Substance: ACEBUTOLOL HYDROCHLORIDE
     Dosage: 200 MG, QD
     Route: 065
  43. ACEBUTOLOL HYDROCHLORIDE [Suspect]
     Active Substance: ACEBUTOLOL HYDROCHLORIDE
     Dosage: 200.0 MG, QD
     Route: 065
  44. ACEBUTOLOL HYDROCHLORIDE [Suspect]
     Active Substance: ACEBUTOLOL HYDROCHLORIDE
     Indication: Angina pectoris
     Dosage: 200 MG, Q12H
     Route: 065
  45. ACEBUTOLOL HYDROCHLORIDE [Suspect]
     Active Substance: ACEBUTOLOL HYDROCHLORIDE
     Indication: Hypertension
     Dosage: 200 MG, Q12H
     Route: 065
  46. ACEBUTOLOL HYDROCHLORIDE [Suspect]
     Active Substance: ACEBUTOLOL HYDROCHLORIDE
     Dosage: 200 MG, Q12H
     Route: 065
  47. ACEBUTOLOL HYDROCHLORIDE [Suspect]
     Active Substance: ACEBUTOLOL HYDROCHLORIDE
     Dosage: 200 MG, Q12H
     Route: 065
  48. ACEBUTOLOL HYDROCHLORIDE [Suspect]
     Active Substance: ACEBUTOLOL HYDROCHLORIDE
     Dosage: 200 MG, Q12H
     Route: 065
  49. ACEBUTOLOL HYDROCHLORIDE [Suspect]
     Active Substance: ACEBUTOLOL HYDROCHLORIDE
     Dosage: 200 MG, Q12H
     Route: 065
  50. ACEBUTOLOL HYDROCHLORIDE [Suspect]
     Active Substance: ACEBUTOLOL HYDROCHLORIDE
     Dosage: 200 MG, BID
     Route: 065
  51. ACEBUTOLOL HYDROCHLORIDE [Suspect]
     Active Substance: ACEBUTOLOL HYDROCHLORIDE
     Dosage: 200 MG, BID
     Route: 065
  52. ACEBUTOLOL HYDROCHLORIDE [Suspect]
     Active Substance: ACEBUTOLOL HYDROCHLORIDE
     Dosage: 200 MG,BID
     Route: 065
  53. ACEBUTOLOL HYDROCHLORIDE [Suspect]
     Active Substance: ACEBUTOLOL HYDROCHLORIDE
     Dosage: 200MG, BID
     Route: 065
  54. ACEBUTOLOL HYDROCHLORIDE [Suspect]
     Active Substance: ACEBUTOLOL HYDROCHLORIDE
     Dosage: 400 MG, QW
     Route: 065
  55. ACEBUTOLOL HYDROCHLORIDE [Suspect]
     Active Substance: ACEBUTOLOL HYDROCHLORIDE
     Dosage: 400 MG, QW
     Route: 065
  56. ACEBUTOLOL HYDROCHLORIDE [Suspect]
     Active Substance: ACEBUTOLOL HYDROCHLORIDE
     Dosage: 400 MG, QW
     Route: 065
  57. ACEBUTOLOL HYDROCHLORIDE [Suspect]
     Active Substance: ACEBUTOLOL HYDROCHLORIDE
     Indication: Coronary artery disease
     Dosage: 400.0 MG, QW
     Route: 065
  58. ACEBUTOLOL HYDROCHLORIDE [Suspect]
     Active Substance: ACEBUTOLOL HYDROCHLORIDE
     Dosage: 400.0 MG, QW
     Route: 065
  59. ACEBUTOLOL HYDROCHLORIDE [Suspect]
     Active Substance: ACEBUTOLOL HYDROCHLORIDE
     Dosage: 400 MG, QD
     Route: 065
  60. ACEBUTOLOL HYDROCHLORIDE [Suspect]
     Active Substance: ACEBUTOLOL HYDROCHLORIDE
     Dosage: 400 MG, QD
     Route: 065
  61. ACEBUTOLOL HYDROCHLORIDE [Suspect]
     Active Substance: ACEBUTOLOL HYDROCHLORIDE
     Dosage: 400 MG, QD
     Route: 065
  62. ACEBUTOLOL HYDROCHLORIDE [Suspect]
     Active Substance: ACEBUTOLOL HYDROCHLORIDE
     Dosage: 400 MG, QD
     Route: 065
  63. ACEBUTOLOL HYDROCHLORIDE [Suspect]
     Active Substance: ACEBUTOLOL HYDROCHLORIDE
     Dosage: 400 MG, QD
     Route: 065
  64. ACEBUTOLOL HYDROCHLORIDE [Suspect]
     Active Substance: ACEBUTOLOL HYDROCHLORIDE
     Dosage: 400 MG, QD
     Route: 065
  65. ACEBUTOLOL HYDROCHLORIDE [Suspect]
     Active Substance: ACEBUTOLOL HYDROCHLORIDE
     Dosage: 400 MG, QD
     Route: 065
  66. ACEBUTOLOL HYDROCHLORIDE [Suspect]
     Active Substance: ACEBUTOLOL HYDROCHLORIDE
     Dosage: 400 MG, BID
     Route: 065
  67. ACEBUTOLOL HYDROCHLORIDE [Suspect]
     Active Substance: ACEBUTOLOL HYDROCHLORIDE
     Route: 065
  68. ACEBUTOLOL HYDROCHLORIDE [Suspect]
     Active Substance: ACEBUTOLOL HYDROCHLORIDE
     Dosage: 50 MG, QD
     Route: 065
  69. ACEBUTOLOL HYDROCHLORIDE [Suspect]
     Active Substance: ACEBUTOLOL HYDROCHLORIDE
     Indication: Constipation
     Dosage: 50 MG, Q12H
     Route: 065
  70. ACEBUTOLOL HYDROCHLORIDE [Suspect]
     Active Substance: ACEBUTOLOL HYDROCHLORIDE
     Dosage: 50 MG, Q12H
     Route: 065
  71. ACEBUTOLOL HYDROCHLORIDE [Suspect]
     Active Substance: ACEBUTOLOL HYDROCHLORIDE
     Dosage: 50 MG, Q12H
     Route: 065
  72. ACEBUTOLOL HYDROCHLORIDE [Suspect]
     Active Substance: ACEBUTOLOL HYDROCHLORIDE
     Dosage: 50 MG, Q12H
     Route: 065
  73. ACEBUTOLOL HYDROCHLORIDE [Suspect]
     Active Substance: ACEBUTOLOL HYDROCHLORIDE
     Dosage: 500 MG, QD
     Route: 065
  74. ACEBUTOLOL HYDROCHLORIDE [Suspect]
     Active Substance: ACEBUTOLOL HYDROCHLORIDE
     Route: 065
  75. ACEBUTOLOL HYDROCHLORIDE [Suspect]
     Active Substance: ACEBUTOLOL HYDROCHLORIDE
     Route: 065
  76. ACEBUTOLOL HYDROCHLORIDE [Suspect]
     Active Substance: ACEBUTOLOL HYDROCHLORIDE
     Route: 065
  77. ACEBUTOLOL HYDROCHLORIDE [Suspect]
     Active Substance: ACEBUTOLOL HYDROCHLORIDE
     Route: 065
  78. ACEBUTOLOL HYDROCHLORIDE [Suspect]
     Active Substance: ACEBUTOLOL HYDROCHLORIDE
     Route: 065
  79. ACEBUTOLOL HYDROCHLORIDE [Suspect]
     Active Substance: ACEBUTOLOL HYDROCHLORIDE
     Route: 065
  80. ACEBUTOLOL HYDROCHLORIDE [Suspect]
     Active Substance: ACEBUTOLOL HYDROCHLORIDE
     Route: 065
  81. ACEBUTOLOL HYDROCHLORIDE [Suspect]
     Active Substance: ACEBUTOLOL HYDROCHLORIDE
     Route: 065
  82. ACETAMINOPHEN [Suspect]
     Active Substance: ACETAMINOPHEN
     Indication: Angina pectoris
     Route: 065
  83. ACETAMINOPHEN [Suspect]
     Active Substance: ACETAMINOPHEN
     Indication: Cerebrovascular accident
     Route: 065
  84. ACETAMINOPHEN [Suspect]
     Active Substance: ACETAMINOPHEN
     Indication: Chest pain
     Route: 065
  85. ACETAMINOPHEN [Suspect]
     Active Substance: ACETAMINOPHEN
     Indication: Chronic obstructive pulmonary disease
     Route: 065
  86. ACETAMINOPHEN [Suspect]
     Active Substance: ACETAMINOPHEN
     Indication: Coronary artery disease
     Route: 065
  87. ACETAMINOPHEN [Suspect]
     Active Substance: ACETAMINOPHEN
     Route: 065
  88. ACETAMINOPHEN [Suspect]
     Active Substance: ACETAMINOPHEN
     Indication: Angina pectoris
     Route: 065
  89. ACETAMINOPHEN [Suspect]
     Active Substance: ACETAMINOPHEN
     Route: 065
  90. ACETAMINOPHEN [Suspect]
     Active Substance: ACETAMINOPHEN
     Route: 065
  91. ACETAMINOPHEN [Suspect]
     Active Substance: ACETAMINOPHEN
     Route: 065
  92. ACETAMINOPHEN [Suspect]
     Active Substance: ACETAMINOPHEN
     Route: 065
  93. ACETAMINOPHEN [Suspect]
     Active Substance: ACETAMINOPHEN
     Route: 065
  94. ACETAMINOPHEN [Suspect]
     Active Substance: ACETAMINOPHEN
     Route: 065
  95. ACETAMINOPHEN [Suspect]
     Active Substance: ACETAMINOPHEN
     Route: 065
  96. ACETAMINOPHEN [Suspect]
     Active Substance: ACETAMINOPHEN
     Route: 065
  97. ACETAMINOPHEN [Suspect]
     Active Substance: ACETAMINOPHEN
     Route: 065
  98. ACETAMINOPHEN [Suspect]
     Active Substance: ACETAMINOPHEN
     Route: 065
  99. ACETAMINOPHEN [Suspect]
     Active Substance: ACETAMINOPHEN
     Route: 065
  100. ACETAMINOPHEN [Suspect]
     Active Substance: ACETAMINOPHEN
     Indication: Radioactive iodine therapy
     Dosage: 650 MG, QD
     Route: 065
  101. ACETAMINOPHEN [Suspect]
     Active Substance: ACETAMINOPHEN
     Indication: Fibromyalgia
     Dosage: 650.0 MG, QD
     Route: 065
  102. ACETAMINOPHEN [Suspect]
     Active Substance: ACETAMINOPHEN
     Indication: Product used for unknown indication
     Dosage: 650.0 MG, QID
     Route: 065
  103. ACETAMINOPHEN [Suspect]
     Active Substance: ACETAMINOPHEN
     Indication: Pain
     Route: 065
  104. ACETAMINOPHEN [Suspect]
     Active Substance: ACETAMINOPHEN
     Route: 065
  105. ACETAMINOPHEN [Suspect]
     Active Substance: ACETAMINOPHEN
     Route: 065
  106. ACETAMINOPHEN [Suspect]
     Active Substance: ACETAMINOPHEN
     Route: 065
  107. ACETAMINOPHEN [Suspect]
     Active Substance: ACETAMINOPHEN
     Route: 065
  108. ACETAMINOPHEN [Suspect]
     Active Substance: ACETAMINOPHEN
     Route: 065
  109. ACETAMINOPHEN [Suspect]
     Active Substance: ACETAMINOPHEN
     Route: 065
  110. ACETAMINOPHEN [Suspect]
     Active Substance: ACETAMINOPHEN
     Route: 065
  111. ACETAMINOPHEN [Suspect]
     Active Substance: ACETAMINOPHEN
     Route: 065
  112. ACETAMINOPHEN [Suspect]
     Active Substance: ACETAMINOPHEN
     Route: 065
  113. ACETAMINOPHEN [Suspect]
     Active Substance: ACETAMINOPHEN
     Route: 065
  114. ACETAMINOPHEN [Suspect]
     Active Substance: ACETAMINOPHEN
     Route: 065
  115. ACETAMINOPHEN [Suspect]
     Active Substance: ACETAMINOPHEN
     Route: 065
  116. ACETAMINOPHEN [Suspect]
     Active Substance: ACETAMINOPHEN
     Route: 065
  117. ACETAMINOPHEN [Suspect]
     Active Substance: ACETAMINOPHEN
     Route: 065
  118. ACETAMINOPHEN [Suspect]
     Active Substance: ACETAMINOPHEN
     Route: 065
  119. ACETAMINOPHEN [Suspect]
     Active Substance: ACETAMINOPHEN
     Route: 065
  120. ACETAMINOPHEN [Suspect]
     Active Substance: ACETAMINOPHEN
     Route: 065
  121. ACETAMINOPHEN [Suspect]
     Active Substance: ACETAMINOPHEN
     Route: 065
  122. ACETAMINOPHEN [Suspect]
     Active Substance: ACETAMINOPHEN
     Route: 065
  123. ACETAMINOPHEN [Suspect]
     Active Substance: ACETAMINOPHEN
     Route: 065
  124. ACETAMINOPHEN [Suspect]
     Active Substance: ACETAMINOPHEN
     Route: 065
  125. ACETAMINOPHEN [Suspect]
     Active Substance: ACETAMINOPHEN
     Route: 065
  126. ACETAMINOPHEN [Suspect]
     Active Substance: ACETAMINOPHEN
     Route: 065
  127. ACETAMINOPHEN [Suspect]
     Active Substance: ACETAMINOPHEN
     Route: 065
  128. ACETAMINOPHEN [Suspect]
     Active Substance: ACETAMINOPHEN
     Route: 065
  129. ACETAMINOPHEN [Suspect]
     Active Substance: ACETAMINOPHEN
     Route: 065
  130. ACETAMINOPHEN [Suspect]
     Active Substance: ACETAMINOPHEN
     Route: 065
  131. ACETAMINOPHEN [Suspect]
     Active Substance: ACETAMINOPHEN
     Indication: Hypertension
     Route: 065
  132. ACETAMINOPHEN\CODEINE PHOSPHATE [Suspect]
     Active Substance: ACETAMINOPHEN\CODEINE PHOSPHATE
     Indication: Chest pain
     Dosage: 60.0 MG, QD
     Route: 065
  133. ACETAMINOPHEN\CODEINE PHOSPHATE [Suspect]
     Active Substance: ACETAMINOPHEN\CODEINE PHOSPHATE
     Indication: Angina pectoris
     Dosage: 650.0 MG, QD
     Route: 065
  134. ACETAMINOPHEN\CODEINE PHOSPHATE [Suspect]
     Active Substance: ACETAMINOPHEN\CODEINE PHOSPHATE
     Indication: Product used for unknown indication
     Route: 016
  135. ACETAMINOPHEN\CODEINE PHOSPHATE [Suspect]
     Active Substance: ACETAMINOPHEN\CODEINE PHOSPHATE
     Indication: Cerebrovascular accident
     Route: 065
  136. ACETAMINOPHEN\CODEINE PHOSPHATE [Suspect]
     Active Substance: ACETAMINOPHEN\CODEINE PHOSPHATE
     Indication: Chronic obstructive pulmonary disease
     Route: 065
  137. ACETAMINOPHEN\CODEINE PHOSPHATE [Suspect]
     Active Substance: ACETAMINOPHEN\CODEINE PHOSPHATE
     Indication: Coronary artery disease
     Route: 065
  138. ACETAMINOPHEN\CODEINE PHOSPHATE [Suspect]
     Active Substance: ACETAMINOPHEN\CODEINE PHOSPHATE
     Indication: Hypertension
     Route: 065
  139. ACETAMINOPHEN\CODEINE PHOSPHATE [Suspect]
     Active Substance: ACETAMINOPHEN\CODEINE PHOSPHATE
     Indication: Pain
     Route: 065
  140. ACETAMINOPHEN\CODEINE PHOSPHATE [Suspect]
     Active Substance: ACETAMINOPHEN\CODEINE PHOSPHATE
     Route: 065
  141. ACETAMINOPHEN\CODEINE PHOSPHATE [Suspect]
     Active Substance: ACETAMINOPHEN\CODEINE PHOSPHATE
     Route: 065
  142. ACETAMINOPHEN AND CAFFEINE [Suspect]
     Active Substance: ACETAMINOPHEN\CAFFEINE
     Indication: Angina pectoris
     Dosage: 50 MG, QD
     Route: 065
  143. ACETAMINOPHEN AND CAFFEINE [Suspect]
     Active Substance: ACETAMINOPHEN\CAFFEINE
     Indication: Cerebrovascular accident
     Dosage: 50 MG, QD
     Route: 065
  144. ACETAMINOPHEN AND CAFFEINE [Suspect]
     Active Substance: ACETAMINOPHEN\CAFFEINE
     Indication: Product used for unknown indication
     Dosage: 50 MG, QD
     Route: 065
  145. ACETAMINOPHEN AND CAFFEINE [Suspect]
     Active Substance: ACETAMINOPHEN\CAFFEINE
     Dosage: 50 MG, QD
     Route: 065
  146. ACETAMINOPHEN AND CAFFEINE [Suspect]
     Active Substance: ACETAMINOPHEN\CAFFEINE
     Dosage: 50 MG, QD
     Route: 065
  147. ACETAMINOPHEN AND CAFFEINE [Suspect]
     Active Substance: ACETAMINOPHEN\CAFFEINE
     Dosage: 50 MG, QD
     Route: 065
  148. ACETAMINOPHEN AND CAFFEINE [Suspect]
     Active Substance: ACETAMINOPHEN\CAFFEINE
     Dosage: 50 MG, QD
     Route: 065
  149. ACETAMINOPHEN AND CAFFEINE [Suspect]
     Active Substance: ACETAMINOPHEN\CAFFEINE
     Dosage: 60 MG QD
     Route: 065
  150. ACETAMINOPHEN AND CAFFEINE [Suspect]
     Active Substance: ACETAMINOPHEN\CAFFEINE
     Indication: Chest pain
     Dosage: 60 MG, QD
     Route: 065
  151. ACETAMINOPHEN AND CAFFEINE [Suspect]
     Active Substance: ACETAMINOPHEN\CAFFEINE
     Indication: Chronic obstructive pulmonary disease
     Dosage: 60 MG, QD
     Route: 065
  152. ACETAMINOPHEN AND CAFFEINE [Suspect]
     Active Substance: ACETAMINOPHEN\CAFFEINE
     Indication: Hypertension
     Dosage: 60 MG, QD
     Route: 065
  153. ACETAMINOPHEN AND CAFFEINE [Suspect]
     Active Substance: ACETAMINOPHEN\CAFFEINE
     Indication: Radioactive iodine therapy
     Dosage: 60 MG, QD
     Route: 065
  154. ACETAMINOPHEN AND CAFFEINE [Suspect]
     Active Substance: ACETAMINOPHEN\CAFFEINE
     Dosage: 60 MG, QD
     Route: 065
  155. ACETAMINOPHEN AND CAFFEINE [Suspect]
     Active Substance: ACETAMINOPHEN\CAFFEINE
     Dosage: 600 MG, QD
     Route: 065
  156. ACETAMINOPHEN AND CAFFEINE [Suspect]
     Active Substance: ACETAMINOPHEN\CAFFEINE
     Indication: Coronary artery disease
     Dosage: 650 MG, QD
     Route: 065
  157. ACETAMINOPHEN AND CAFFEINE [Suspect]
     Active Substance: ACETAMINOPHEN\CAFFEINE
     Dosage: 650 MG, QD
     Route: 065
  158. ACETAMINOPHEN AND CAFFEINE [Suspect]
     Active Substance: ACETAMINOPHEN\CAFFEINE
     Dosage: 650 MG, QD
     Route: 065
  159. ACETAMINOPHEN AND CAFFEINE [Suspect]
     Active Substance: ACETAMINOPHEN\CAFFEINE
     Dosage: 650 MG, QD
     Route: 065
  160. ACETAMINOPHEN AND CAFFEINE [Suspect]
     Active Substance: ACETAMINOPHEN\CAFFEINE
     Dosage: 650 MG, QD
     Route: 065
  161. ACETAMINOPHEN AND CAFFEINE [Suspect]
     Active Substance: ACETAMINOPHEN\CAFFEINE
     Dosage: 650 MG, QD
     Route: 065
  162. ACETAMINOPHEN AND CAFFEINE [Suspect]
     Active Substance: ACETAMINOPHEN\CAFFEINE
     Dosage: 650 MG, QD
     Route: 065
  163. ACETAMINOPHEN AND CAFFEINE [Suspect]
     Active Substance: ACETAMINOPHEN\CAFFEINE
     Route: 065
  164. ACETAMINOPHEN AND CAFFEINE [Suspect]
     Active Substance: ACETAMINOPHEN\CAFFEINE
     Route: 065
  165. ACETAMINOPHEN AND CAFFEINE [Suspect]
     Active Substance: ACETAMINOPHEN\CAFFEINE
     Route: 065
  166. ACETAMINOPHEN AND CAFFEINE [Suspect]
     Active Substance: ACETAMINOPHEN\CAFFEINE
     Route: 065
  167. ACETAMINOPHEN AND CAFFEINE [Suspect]
     Active Substance: ACETAMINOPHEN\CAFFEINE
     Route: 065
  168. ACETAMINOPHEN AND CAFFEINE [Suspect]
     Active Substance: ACETAMINOPHEN\CAFFEINE
     Route: 065
  169. ACETAMINOPHEN AND CAFFEINE [Suspect]
     Active Substance: ACETAMINOPHEN\CAFFEINE
     Indication: Pain
     Route: 065
  170. ACETAMINOPHEN AND CAFFEINE [Suspect]
     Active Substance: ACETAMINOPHEN\CAFFEINE
     Route: 065
  171. ACETAMINOPHEN AND CAFFEINE [Suspect]
     Active Substance: ACETAMINOPHEN\CAFFEINE
     Route: 065
  172. ACETAMINOPHEN AND CAFFEINE [Suspect]
     Active Substance: ACETAMINOPHEN\CAFFEINE
     Route: 065
  173. ACETAMINOPHEN AND CAFFEINE [Suspect]
     Active Substance: ACETAMINOPHEN\CAFFEINE
     Route: 065
  174. ACETAMINOPHEN AND CAFFEINE [Suspect]
     Active Substance: ACETAMINOPHEN\CAFFEINE
     Route: 065
  175. ACETAMINOPHEN AND CAFFEINE [Suspect]
     Active Substance: ACETAMINOPHEN\CAFFEINE
     Route: 065
  176. ACETAMINOPHEN AND CAFFEINE [Suspect]
     Active Substance: ACETAMINOPHEN\CAFFEINE
     Route: 065
  177. ACETAMINOPHEN AND CAFFEINE [Suspect]
     Active Substance: ACETAMINOPHEN\CAFFEINE
     Route: 065
  178. ACETAMINOPHEN AND CAFFEINE [Suspect]
     Active Substance: ACETAMINOPHEN\CAFFEINE
     Route: 065
  179. ACETAMINOPHEN AND CAFFEINE [Suspect]
     Active Substance: ACETAMINOPHEN\CAFFEINE
     Route: 065
  180. ACETAMINOPHEN AND CAFFEINE [Suspect]
     Active Substance: ACETAMINOPHEN\CAFFEINE
     Route: 065
  181. ACETAMINOPHEN AND CAFFEINE [Suspect]
     Active Substance: ACETAMINOPHEN\CAFFEINE
     Route: 065
  182. ACETAMINOPHEN AND CAFFEINE [Suspect]
     Active Substance: ACETAMINOPHEN\CAFFEINE
     Route: 065
  183. ACETAMINOPHEN AND CAFFEINE [Suspect]
     Active Substance: ACETAMINOPHEN\CAFFEINE
     Route: 065
  184. ACETAMINOPHEN AND CAFFEINE [Suspect]
     Active Substance: ACETAMINOPHEN\CAFFEINE
     Route: 065
  185. ACETAMINOPHEN AND CAFFEINE [Suspect]
     Active Substance: ACETAMINOPHEN\CAFFEINE
     Route: 065
  186. ACETAMINOPHEN AND CAFFEINE [Suspect]
     Active Substance: ACETAMINOPHEN\CAFFEINE
     Route: 065
  187. ACETAMINOPHEN AND CAFFEINE [Suspect]
     Active Substance: ACETAMINOPHEN\CAFFEINE
     Route: 065
  188. ACETAMINOPHEN AND CAFFEINE [Suspect]
     Active Substance: ACETAMINOPHEN\CAFFEINE
     Route: 065
  189. ACETAMINOPHEN AND CAFFEINE [Suspect]
     Active Substance: ACETAMINOPHEN\CAFFEINE
     Route: 065
  190. ACETAMINOPHEN AND CAFFEINE [Suspect]
     Active Substance: ACETAMINOPHEN\CAFFEINE
     Route: 065
  191. ACETAMINOPHEN AND CAFFEINE [Suspect]
     Active Substance: ACETAMINOPHEN\CAFFEINE
     Route: 065
  192. ACETAMINOPHEN AND CODEINE [Suspect]
     Active Substance: ACETAMINOPHEN\CODEINE PHOSPHATE
     Indication: Product used for unknown indication
     Route: 065
  193. ACETAMINOPHEN AND CODEINE [Suspect]
     Active Substance: ACETAMINOPHEN\CODEINE PHOSPHATE
     Indication: Pain
  194. ACETAMINOPHEN\CAFFEINE [Suspect]
     Active Substance: ACETAMINOPHEN\CAFFEINE
     Dosage: 50 MG, DAILY
     Route: 065
  195. ACETAMINOPHEN\CAFFEINE [Suspect]
     Active Substance: ACETAMINOPHEN\CAFFEINE
     Dosage: 650 MG, DAILY
     Route: 065
  196. ACETAMINOPHEN\CAFFEINE [Suspect]
     Active Substance: ACETAMINOPHEN\CAFFEINE
     Indication: Product used for unknown indication
     Route: 065
  197. ACETAMINOPHEN\CAFFEINE [Suspect]
     Active Substance: ACETAMINOPHEN\CAFFEINE
     Route: 065
  198. ACETAMINOPHEN\CAFFEINE [Suspect]
     Active Substance: ACETAMINOPHEN\CAFFEINE
     Route: 065
  199. ACETAMINOPHEN\CAFFEINE [Suspect]
     Active Substance: ACETAMINOPHEN\CAFFEINE
     Route: 065
  200. ACETAMINOPHEN\CAFFEINE [Suspect]
     Active Substance: ACETAMINOPHEN\CAFFEINE
     Route: 065
  201. ACETAMINOPHEN\CAFFEINE [Suspect]
     Active Substance: ACETAMINOPHEN\CAFFEINE
     Route: 065
  202. ACETAMINOPHEN\CAFFEINE [Suspect]
     Active Substance: ACETAMINOPHEN\CAFFEINE
     Route: 065
  203. ACETAMINOPHEN\CAFFEINE [Suspect]
     Active Substance: ACETAMINOPHEN\CAFFEINE
     Route: 065
  204. ASPIRIN [Suspect]
     Active Substance: ASPIRIN
     Route: 065
  205. ASPIRIN [Suspect]
     Active Substance: ASPIRIN
     Indication: Cerebrovascular accident
     Route: 048
  206. ASPIRIN [Suspect]
     Active Substance: ASPIRIN
     Indication: Angina pectoris
     Route: 048
  207. ASPIRIN [Suspect]
     Active Substance: ASPIRIN
     Indication: Coronary artery disease
     Route: 048
  208. ASPIRIN [Suspect]
     Active Substance: ASPIRIN
     Indication: Hypertension
     Route: 065
  209. ASPIRIN\DIPYRIDAMOLE [Suspect]
     Active Substance: ASPIRIN\DIPYRIDAMOLE
     Indication: Product used for unknown indication
     Dosage: 1 DF, BID
     Route: 065
  210. ASPIRIN\DIPYRIDAMOLE [Suspect]
     Active Substance: ASPIRIN\DIPYRIDAMOLE
     Route: 065
  211. ASPIRIN\DIPYRIDAMOLE [Suspect]
     Active Substance: ASPIRIN\DIPYRIDAMOLE
     Route: 065
  212. ASPIRIN\DIPYRIDAMOLE [Suspect]
     Active Substance: ASPIRIN\DIPYRIDAMOLE
     Route: 048
  213. ASPIRIN\DIPYRIDAMOLE [Suspect]
     Active Substance: ASPIRIN\DIPYRIDAMOLE
     Indication: Cerebrovascular accident
     Route: 065
  214. ASPIRIN\DIPYRIDAMOLE [Suspect]
     Active Substance: ASPIRIN\DIPYRIDAMOLE
     Route: 065
  215. ASPIRIN\DIPYRIDAMOLE [Suspect]
     Active Substance: ASPIRIN\DIPYRIDAMOLE
     Route: 065
  216. AGGRENOX [Suspect]
     Active Substance: ASPIRIN\DIPYRIDAMOLE
     Dosage: 1 DF, QD
     Route: 065
  217. AGGRENOX [Suspect]
     Active Substance: ASPIRIN\DIPYRIDAMOLE
     Dosage: 1 DF, QD
     Route: 065
  218. AGGRENOX [Suspect]
     Active Substance: ASPIRIN\DIPYRIDAMOLE
     Dosage: 1 DF, QD
     Route: 065
  219. AGGRENOX [Suspect]
     Active Substance: ASPIRIN\DIPYRIDAMOLE
     Dosage: 1 DF, QD
     Route: 065
  220. AGGRENOX [Suspect]
     Active Substance: ASPIRIN\DIPYRIDAMOLE
     Dosage: 1 DF, BID
     Route: 065
  221. AGGRENOX [Suspect]
     Active Substance: ASPIRIN\DIPYRIDAMOLE
     Dosage: 1 DF, BID
     Route: 065
  222. AGGRENOX [Suspect]
     Active Substance: ASPIRIN\DIPYRIDAMOLE
     Indication: Arthritis
     Dosage: 2 DF, QD
     Route: 065
  223. AGGRENOX [Suspect]
     Active Substance: ASPIRIN\DIPYRIDAMOLE
     Dosage: 2 DF, QD
     Route: 065
  224. AGGRENOX [Suspect]
     Active Substance: ASPIRIN\DIPYRIDAMOLE
     Dosage: 2 DF, QD
     Route: 065
  225. AGGRENOX [Suspect]
     Active Substance: ASPIRIN\DIPYRIDAMOLE
     Dosage: 2 DF, QD
     Route: 065
  226. AGGRENOX [Suspect]
     Active Substance: ASPIRIN\DIPYRIDAMOLE
     Indication: Hypertension
     Route: 065
  227. AGGRENOX [Suspect]
     Active Substance: ASPIRIN\DIPYRIDAMOLE
     Indication: Product used for unknown indication
     Route: 065
  228. AGGRENOX [Suspect]
     Active Substance: ASPIRIN\DIPYRIDAMOLE
     Dosage: 75 MG, QD
     Route: 065
  229. AGGRENOX [Suspect]
     Active Substance: ASPIRIN\DIPYRIDAMOLE
     Route: 065
  230. AGGRENOX [Suspect]
     Active Substance: ASPIRIN\DIPYRIDAMOLE
     Route: 065
  231. AGGRENOX [Suspect]
     Active Substance: ASPIRIN\DIPYRIDAMOLE
     Route: 065
  232. AGGRENOX [Suspect]
     Active Substance: ASPIRIN\DIPYRIDAMOLE
     Route: 065
  233. AGGRENOX [Suspect]
     Active Substance: ASPIRIN\DIPYRIDAMOLE
     Route: 065
  234. AGGRENOX [Suspect]
     Active Substance: ASPIRIN\DIPYRIDAMOLE
     Route: 065
  235. AGGRENOX [Suspect]
     Active Substance: ASPIRIN\DIPYRIDAMOLE
     Route: 065
  236. AGGRENOX [Suspect]
     Active Substance: ASPIRIN\DIPYRIDAMOLE
     Route: 065
  237. AGGRENOX [Suspect]
     Active Substance: ASPIRIN\DIPYRIDAMOLE
     Route: 065
  238. AGGRENOX [Suspect]
     Active Substance: ASPIRIN\DIPYRIDAMOLE
     Route: 065
  239. AGGRENOX [Suspect]
     Active Substance: ASPIRIN\DIPYRIDAMOLE
     Indication: Cerebrovascular accident
     Route: 065
  240. AMBROXOL HYDROCHLORIDE [Suspect]
     Active Substance: AMBROXOL HYDROCHLORIDE
     Indication: Product used for unknown indication
     Route: 065
  241. ALBUTEROL SULFATE\AMBROXOL HYDROCHLORIDE\GUAIFENESIN [Suspect]
     Active Substance: ALBUTEROL SULFATE\AMBROXOL HYDROCHLORIDE\GUAIFENESIN
     Indication: Product used for unknown indication
     Route: 065
  242. AMINOPHYLLINE [Suspect]
     Active Substance: AMINOPHYLLINE
     Indication: Chest pain
     Dosage: 6.0 MG, QD
     Route: 061
  243. AMINOPHYLLINE [Suspect]
     Active Substance: AMINOPHYLLINE
     Indication: Angina pectoris
     Route: 065
  244. AMINOPHYLLINE [Suspect]
     Active Substance: AMINOPHYLLINE
     Indication: Coronary artery disease
     Route: 065
  245. AMITRIPTYLINE [Suspect]
     Active Substance: AMITRIPTYLINE
     Indication: Arthritis
     Dosage: 50 MG, QD
     Route: 065
  246. AMITRIPTYLINE [Suspect]
     Active Substance: AMITRIPTYLINE
     Indication: Constipation
     Dosage: 50 MG, QD
     Route: 065
  247. AMITRIPTYLINE [Suspect]
     Active Substance: AMITRIPTYLINE
     Indication: Coronary artery disease
     Dosage: 50 MG, QD
     Route: 065
  248. AMITRIPTYLINE [Suspect]
     Active Substance: AMITRIPTYLINE
     Indication: Duodenal ulcer
     Dosage: 50 MG, QD
     Route: 065
  249. AMITRIPTYLINE [Suspect]
     Active Substance: AMITRIPTYLINE
     Indication: Fibromyalgia
     Dosage: 50 MG, QD
     Route: 065
  250. AMITRIPTYLINE [Suspect]
     Active Substance: AMITRIPTYLINE
     Indication: Hypertension
     Dosage: 50 MG, QD
     Route: 065
  251. AMITRIPTYLINE [Suspect]
     Active Substance: AMITRIPTYLINE
     Indication: Pain
     Dosage: 50 MG, QD
     Route: 065
  252. AMITRIPTYLINE [Suspect]
     Active Substance: AMITRIPTYLINE
     Dosage: 50 MG, QD
     Route: 065
  253. AMITRIPTYLINE [Suspect]
     Active Substance: AMITRIPTYLINE
     Indication: Oedema
     Dosage: 50.0 MG, QD
     Route: 065
  254. AMITRIPTYLINE [Suspect]
     Active Substance: AMITRIPTYLINE
     Route: 065
  255. AMITRIPTYLINE [Suspect]
     Active Substance: AMITRIPTYLINE
     Indication: Angina pectoris
     Dosage: 75 MG, QD
     Route: 065
  256. AMITRIPTYLINE [Suspect]
     Active Substance: AMITRIPTYLINE
     Indication: Insomnia
     Dosage: 75 MG, QD
     Route: 065
  257. AMITRIPTYLINE [Suspect]
     Active Substance: AMITRIPTYLINE
     Indication: Prophylaxis
     Dosage: 75 MG, QD
     Route: 065
  258. AMITRIPTYLINE [Suspect]
     Active Substance: AMITRIPTYLINE
     Indication: Thyroid disorder
     Dosage: 75 MG, QD
     Route: 065
  259. AMITRIPTYLINE [Suspect]
     Active Substance: AMITRIPTYLINE
     Indication: Chest pain
     Dosage: 75.0 MG, QD
     Route: 065
  260. AMITRIPTYLINE [Suspect]
     Active Substance: AMITRIPTYLINE
     Indication: Dementia
     Dosage: 75.0 MG, QD
     Route: 065
  261. AMITRIPTYLINE [Suspect]
     Active Substance: AMITRIPTYLINE
     Indication: Radioactive iodine therapy
     Dosage: 75.0 MG, QD
     Route: 065
  262. AMITRIPTYLINE [Suspect]
     Active Substance: AMITRIPTYLINE
     Dosage: 75.0 MG, QD
     Route: 065
  263. AMITRIPTYLINE [Suspect]
     Active Substance: AMITRIPTYLINE
     Dosage: 75.0 MG, QD
     Route: 065
  264. AMITRIPTYLINE [Suspect]
     Active Substance: AMITRIPTYLINE
     Dosage: 75.0 MG, QD
     Route: 065
  265. AMITRIPTYLINE [Suspect]
     Active Substance: AMITRIPTYLINE
     Route: 065
  266. AMITRIPTYLINE [Suspect]
     Active Substance: AMITRIPTYLINE
     Route: 065
  267. AMITRIPTYLINE [Suspect]
     Active Substance: AMITRIPTYLINE
     Route: 065
  268. AMITRIPTYLINE [Suspect]
     Active Substance: AMITRIPTYLINE
     Route: 065
  269. AMITRIPTYLINE [Suspect]
     Active Substance: AMITRIPTYLINE
     Route: 065
  270. AMITRIPTYLINE HYDROCHLORIDE [Suspect]
     Active Substance: AMITRIPTYLINE HYDROCHLORIDE
     Indication: Constipation
     Dosage: 25 MG, QD
     Route: 065
  271. AMITRIPTYLINE HYDROCHLORIDE [Suspect]
     Active Substance: AMITRIPTYLINE HYDROCHLORIDE
     Indication: Oedema
     Route: 065
  272. AMITRIPTYLINE HYDROCHLORIDE [Suspect]
     Active Substance: AMITRIPTYLINE HYDROCHLORIDE
     Indication: Dementia
     Dosage: 50 MG, QD
     Route: 065
  273. AMITRIPTYLINE HYDROCHLORIDE [Suspect]
     Active Substance: AMITRIPTYLINE HYDROCHLORIDE
     Indication: Product used for unknown indication
     Dosage: 75 MG, QD
     Route: 065
  274. AMITRIPTYLINE HYDROCHLORIDE [Suspect]
     Active Substance: AMITRIPTYLINE HYDROCHLORIDE
     Indication: Radioactive iodine therapy
     Dosage: 75 MG, QD
     Route: 065
  275. AMITRIPTYLINE HYDROCHLORIDE [Suspect]
     Active Substance: AMITRIPTYLINE HYDROCHLORIDE
     Indication: Thyroid disorder
     Dosage: 75 MG, QD
     Route: 065
  276. AMITRIPTYLINE HYDROCHLORIDE [Suspect]
     Active Substance: AMITRIPTYLINE HYDROCHLORIDE
     Indication: Pain
     Dosage: UNK, QD
     Route: 065
  277. AMITRIPTYLINE HYDROCHLORIDE [Suspect]
     Active Substance: AMITRIPTYLINE HYDROCHLORIDE
     Route: 065
  278. AMITRIPTYLINE HYDROCHLORIDE [Suspect]
     Active Substance: AMITRIPTYLINE HYDROCHLORIDE
     Route: 065
  279. AMITRIPTYLINE HYDROCHLORIDE [Suspect]
     Active Substance: AMITRIPTYLINE HYDROCHLORIDE
     Route: 065
  280. AMITRIPTYLINE HYDROCHLORIDE [Suspect]
     Active Substance: AMITRIPTYLINE HYDROCHLORIDE
     Route: 065
  281. AMITRIPTYLINE HYDROCHLORIDE [Suspect]
     Active Substance: AMITRIPTYLINE HYDROCHLORIDE
     Route: 065
  282. AMITRIPTYLINE HYDROCHLORIDE [Suspect]
     Active Substance: AMITRIPTYLINE HYDROCHLORIDE
     Route: 065
  283. AMITRIPTYLINE HYDROCHLORIDE [Suspect]
     Active Substance: AMITRIPTYLINE HYDROCHLORIDE
     Route: 065
  284. AMITRIPTYLINE HYDROCHLORIDE [Suspect]
     Active Substance: AMITRIPTYLINE HYDROCHLORIDE
     Route: 065
  285. AMITRIPTYLINE HYDROCHLORIDE [Suspect]
     Active Substance: AMITRIPTYLINE HYDROCHLORIDE
     Route: 065
  286. AMITRIPTYLINE HYDROCHLORIDE [Suspect]
     Active Substance: AMITRIPTYLINE HYDROCHLORIDE
     Route: 065
  287. AMITRIPTYLINE HYDROCHLORIDE [Suspect]
     Active Substance: AMITRIPTYLINE HYDROCHLORIDE
     Route: 065
  288. AMITRIPTYLINE HYDROCHLORIDE [Suspect]
     Active Substance: AMITRIPTYLINE HYDROCHLORIDE
     Route: 065
  289. AMITRIPTYLINE HYDROCHLORIDE [Suspect]
     Active Substance: AMITRIPTYLINE HYDROCHLORIDE
     Route: 065
  290. AMITRIPTYLINE HYDROCHLORIDE [Suspect]
     Active Substance: AMITRIPTYLINE HYDROCHLORIDE
     Route: 065
  291. AMITRIPTYLINE HYDROCHLORIDE [Suspect]
     Active Substance: AMITRIPTYLINE HYDROCHLORIDE
     Route: 065
  292. AMITRIPTYLINE HYDROCHLORIDE [Suspect]
     Active Substance: AMITRIPTYLINE HYDROCHLORIDE
     Route: 065
  293. AMITRIPTYLINE HYDROCHLORIDE [Suspect]
     Active Substance: AMITRIPTYLINE HYDROCHLORIDE
     Route: 065
  294. AMITRIPTYLINE HYDROCHLORIDE [Suspect]
     Active Substance: AMITRIPTYLINE HYDROCHLORIDE
     Route: 065
  295. AMITRIPTYLINE HYDROCHLORIDE [Suspect]
     Active Substance: AMITRIPTYLINE HYDROCHLORIDE
     Route: 065
  296. AMITRIPTYLINE HYDROCHLORIDE [Suspect]
     Active Substance: AMITRIPTYLINE HYDROCHLORIDE
     Route: 065
  297. AMITRIPTYLINE HYDROCHLORIDE [Suspect]
     Active Substance: AMITRIPTYLINE HYDROCHLORIDE
     Route: 065
  298. AMITRIPTYLINE HYDROCHLORIDE [Suspect]
     Active Substance: AMITRIPTYLINE HYDROCHLORIDE
     Route: 065
  299. AMITRIPTYLINE HYDROCHLORIDE [Suspect]
     Active Substance: AMITRIPTYLINE HYDROCHLORIDE
     Route: 065
  300. AMITRIPTYLINE HYDROCHLORIDE [Suspect]
     Active Substance: AMITRIPTYLINE HYDROCHLORIDE
     Route: 065
  301. AMITRIPTYLINE HYDROCHLORIDE [Suspect]
     Active Substance: AMITRIPTYLINE HYDROCHLORIDE
     Route: 065
  302. AMITRIPTYLINE HYDROCHLORIDE [Suspect]
     Active Substance: AMITRIPTYLINE HYDROCHLORIDE
     Indication: Angina pectoris
     Route: 048
  303. AMITRIPTYLINE HYDROCHLORIDE [Suspect]
     Active Substance: AMITRIPTYLINE HYDROCHLORIDE
     Indication: Arthritis
     Route: 048
  304. AMITRIPTYLINE HYDROCHLORIDE [Suspect]
     Active Substance: AMITRIPTYLINE HYDROCHLORIDE
     Indication: Chest pain
     Route: 048
  305. AMITRIPTYLINE HYDROCHLORIDE [Suspect]
     Active Substance: AMITRIPTYLINE HYDROCHLORIDE
     Indication: Coronary artery disease
     Route: 048
  306. AMITRIPTYLINE HYDROCHLORIDE [Suspect]
     Active Substance: AMITRIPTYLINE HYDROCHLORIDE
     Indication: Duodenal ulcer
     Route: 048
  307. AMITRIPTYLINE HYDROCHLORIDE [Suspect]
     Active Substance: AMITRIPTYLINE HYDROCHLORIDE
     Indication: Fibromyalgia
     Route: 048
  308. AMITRIPTYLINE HYDROCHLORIDE [Suspect]
     Active Substance: AMITRIPTYLINE HYDROCHLORIDE
     Indication: Hypertension
     Route: 048
  309. AMITRIPTYLINE HYDROCHLORIDE [Suspect]
     Active Substance: AMITRIPTYLINE HYDROCHLORIDE
     Indication: Insomnia
     Route: 048
  310. AMITRIPTYLINE HYDROCHLORIDE [Suspect]
     Active Substance: AMITRIPTYLINE HYDROCHLORIDE
     Indication: Small intestine carcinoma
     Route: 048
  311. AMITRIPTYLINE HYDROCHLORIDE [Suspect]
     Active Substance: AMITRIPTYLINE HYDROCHLORIDE
     Route: 048
  312. AMITRIPTYLINE HYDROCHLORIDE [Suspect]
     Active Substance: AMITRIPTYLINE HYDROCHLORIDE
     Route: 048
  313. AMITRIPTYLINE HYDROCHLORIDE [Suspect]
     Active Substance: AMITRIPTYLINE HYDROCHLORIDE
     Indication: Prophylaxis
     Route: 065
  314. AMITRIPTYLINE HYDROCHLORIDE [Suspect]
     Active Substance: AMITRIPTYLINE HYDROCHLORIDE
     Route: 065
  315. AMITRIPTYLINE HYDROCHLORIDE [Suspect]
     Active Substance: AMITRIPTYLINE HYDROCHLORIDE
     Route: 065
  316. AMITRIPTYLINE HYDROCHLORIDE [Suspect]
     Active Substance: AMITRIPTYLINE HYDROCHLORIDE
     Route: 065
  317. AMITRIPTYLINE HYDROCHLORIDE [Suspect]
     Active Substance: AMITRIPTYLINE HYDROCHLORIDE
     Route: 065
  318. AMITRIPTYLINE HYDROCHLORIDE [Suspect]
     Active Substance: AMITRIPTYLINE HYDROCHLORIDE
     Route: 065
  319. AMITRIPTYLINE HYDROCHLORIDE [Suspect]
     Active Substance: AMITRIPTYLINE HYDROCHLORIDE
     Route: 065
  320. AMLODIPINE [Suspect]
     Active Substance: AMLODIPINE BESYLATE
     Dosage: 5 MG, QD
     Route: 065
  321. AMLODIPINE [Suspect]
     Active Substance: AMLODIPINE BESYLATE
     Dosage: 5 MG, QD
     Route: 065
  322. AMLODIPINE [Suspect]
     Active Substance: AMLODIPINE BESYLATE
     Dosage: 5 MG, QD
     Route: 065
  323. AMLODIPINE [Suspect]
     Active Substance: AMLODIPINE BESYLATE
     Indication: Coronary artery disease
     Route: 065
  324. AMLODIPINE [Suspect]
     Active Substance: AMLODIPINE BESYLATE
     Indication: Constipation
     Dosage: 50.0 MG, QD
     Route: 065
  325. AMLODIPINE [Suspect]
     Active Substance: AMLODIPINE BESYLATE
     Indication: Hypertension
     Dosage: 50.0 MG, QD
     Route: 065
  326. AMLODIPINE [Suspect]
     Active Substance: AMLODIPINE BESYLATE
     Indication: Angina pectoris
     Route: 065
  327. AMLODIPINE [Suspect]
     Active Substance: AMLODIPINE BESYLATE
     Indication: Chest pain
     Route: 065
  328. AMLODIPINE [Suspect]
     Active Substance: AMLODIPINE BESYLATE
     Route: 065
  329. AMLODIPINE BESYLATE [Suspect]
     Active Substance: AMLODIPINE BESYLATE
     Indication: Angina pectoris
     Dosage: 5.0 MG, QD
     Route: 065
  330. AMLODIPINE BESYLATE [Suspect]
     Active Substance: AMLODIPINE BESYLATE
     Indication: Chest pain
     Dosage: 5.0 MG, QD
     Route: 065
  331. AMLODIPINE BESYLATE [Suspect]
     Active Substance: AMLODIPINE BESYLATE
     Indication: Constipation
     Dosage: 5.0 MG, QD
     Route: 065
  332. AMLODIPINE BESYLATE [Suspect]
     Active Substance: AMLODIPINE BESYLATE
     Indication: Coronary artery disease
     Dosage: 5.0 MG, QD
     Route: 065
  333. AMLODIPINE BESYLATE [Suspect]
     Active Substance: AMLODIPINE BESYLATE
     Indication: Hypertension
     Dosage: 5.0 MG, QD
     Route: 065
  334. AMLODIPINE BESYLATE [Suspect]
     Active Substance: AMLODIPINE BESYLATE
     Indication: Product used for unknown indication
     Dosage: 5.0 MG, QD
     Route: 065
  335. AMLODIPINE BESYLATE [Suspect]
     Active Substance: AMLODIPINE BESYLATE
     Dosage: 5.0 MG, QD
     Route: 065
  336. AMLODIPINE BESYLATE [Suspect]
     Active Substance: AMLODIPINE BESYLATE
     Dosage: 5.0 MG, QD
     Route: 065
  337. AMLODIPINE BESYLATE [Suspect]
     Active Substance: AMLODIPINE BESYLATE
     Dosage: 5.0 MG, QD
     Route: 065
  338. AMLODIPINE BESYLATE [Suspect]
     Active Substance: AMLODIPINE BESYLATE
     Route: 065
  339. AMLODIPINE BESYLATE [Suspect]
     Active Substance: AMLODIPINE BESYLATE
     Dosage: 50.0 MG, QD
     Route: 065
  340. AMLODIPINE BESYLATE [Suspect]
     Active Substance: AMLODIPINE BESYLATE
     Dosage: 50.0 MG, QD
     Route: 065
  341. AMLODIPINE BESYLATE [Suspect]
     Active Substance: AMLODIPINE BESYLATE
     Dosage: 50.0 MG, QD
     Route: 065
  342. AMLODIPINE BESYLATE [Suspect]
     Active Substance: AMLODIPINE BESYLATE
     Route: 065
  343. AMLODIPINE BESYLATE [Suspect]
     Active Substance: AMLODIPINE BESYLATE
     Route: 065
  344. AMLODIPINE BESYLATE\IRBESARTAN [Suspect]
     Active Substance: AMLODIPINE BESYLATE\IRBESARTAN
     Route: 065
  345. AMLODIPINE BESYLATE\IRBESARTAN [Suspect]
     Active Substance: AMLODIPINE BESYLATE\IRBESARTAN
     Route: 065
  346. AMLODIPINE BESYLATE\IRBESARTAN [Suspect]
     Active Substance: AMLODIPINE BESYLATE\IRBESARTAN
     Route: 065
  347. AMLODIPINE BESYLATE\IRBESARTAN [Suspect]
     Active Substance: AMLODIPINE BESYLATE\IRBESARTAN
     Indication: Angina pectoris
     Route: 065
  348. AMLODIPINE BESYLATE\IRBESARTAN [Suspect]
     Active Substance: AMLODIPINE BESYLATE\IRBESARTAN
     Route: 065
  349. AMLODIPINE BESYLATE\IRBESARTAN [Suspect]
     Active Substance: AMLODIPINE BESYLATE\IRBESARTAN
     Route: 065
  350. AMLODIPINE BESYLATE\IRBESARTAN [Suspect]
     Active Substance: AMLODIPINE BESYLATE\IRBESARTAN
     Route: 065
  351. AMLODIPINE BESYLATE\IRBESARTAN [Suspect]
     Active Substance: AMLODIPINE BESYLATE\IRBESARTAN
     Route: 065
  352. AMLODIPINE BESYLATE\IRBESARTAN [Suspect]
     Active Substance: AMLODIPINE BESYLATE\IRBESARTAN
     Route: 065
  353. AMLODIPINE BESYLATE\IRBESARTAN [Suspect]
     Active Substance: AMLODIPINE BESYLATE\IRBESARTAN
     Route: 065
  354. AMLODIPINE BESYLATE\IRBESARTAN [Suspect]
     Active Substance: AMLODIPINE BESYLATE\IRBESARTAN
     Route: 065
  355. AMLODIPINE BESYLATE\IRBESARTAN [Suspect]
     Active Substance: AMLODIPINE BESYLATE\IRBESARTAN
     Route: 065
  356. AMLODIPINE BESYLATE\IRBESARTAN [Suspect]
     Active Substance: AMLODIPINE BESYLATE\IRBESARTAN
     Route: 065
  357. AMLODIPINE BESYLATE\IRBESARTAN [Suspect]
     Active Substance: AMLODIPINE BESYLATE\IRBESARTAN
     Route: 065
  358. AMLODIPINE BESYLATE\IRBESARTAN [Suspect]
     Active Substance: AMLODIPINE BESYLATE\IRBESARTAN
     Route: 065
  359. AMLODIPINE BESYLATE\IRBESARTAN [Suspect]
     Active Substance: AMLODIPINE BESYLATE\IRBESARTAN
     Indication: Constipation
     Route: 065
  360. AMLODIPINE BESYLATE\IRBESARTAN [Suspect]
     Active Substance: AMLODIPINE BESYLATE\IRBESARTAN
     Indication: Coronary artery disease
     Route: 065
  361. AMLODIPINE BESYLATE\IRBESARTAN [Suspect]
     Active Substance: AMLODIPINE BESYLATE\IRBESARTAN
     Route: 065
  362. AMLODIPINE BESYLATE\IRBESARTAN [Suspect]
     Active Substance: AMLODIPINE BESYLATE\IRBESARTAN
     Route: 065
  363. AMLODIPINE BESYLATE\IRBESARTAN [Suspect]
     Active Substance: AMLODIPINE BESYLATE\IRBESARTAN
     Route: 065
  364. AMLODIPINE BESYLATE\IRBESARTAN [Suspect]
     Active Substance: AMLODIPINE BESYLATE\IRBESARTAN
     Route: 065
  365. AMLODIPINE BESYLATE\IRBESARTAN [Suspect]
     Active Substance: AMLODIPINE BESYLATE\IRBESARTAN
     Route: 065
  366. AMLODIPINE BESYLATE\IRBESARTAN [Suspect]
     Active Substance: AMLODIPINE BESYLATE\IRBESARTAN
     Route: 065
  367. AMLODIPINE BESYLATE\IRBESARTAN [Suspect]
     Active Substance: AMLODIPINE BESYLATE\IRBESARTAN
     Indication: Hypertension
     Route: 065
  368. AMLODIPINE\TELMISARTAN [Suspect]
     Active Substance: AMLODIPINE\TELMISARTAN
     Indication: Constipation
     Dosage: 5.0 MG, QD
     Route: 065
  369. AMLODIPINE\TELMISARTAN [Suspect]
     Active Substance: AMLODIPINE\TELMISARTAN
     Indication: Hypertension
     Dosage: 5.0 MG, QD
     Route: 065
  370. AMLODIPINE\TELMISARTAN [Suspect]
     Active Substance: AMLODIPINE\TELMISARTAN
     Indication: Angina pectoris
     Route: 065
  371. AMLODIPINE\TELMISARTAN [Suspect]
     Active Substance: AMLODIPINE\TELMISARTAN
     Indication: Coronary artery disease
     Route: 065
  372. AMLODIPINE\TELMISARTAN [Suspect]
     Active Substance: AMLODIPINE\TELMISARTAN
     Route: 065
  373. AMLODIPINE\TELMISARTAN [Suspect]
     Active Substance: AMLODIPINE\TELMISARTAN
     Route: 065
  374. AMLODIPINE\TELMISARTAN [Suspect]
     Active Substance: AMLODIPINE\TELMISARTAN
     Route: 065
  375. AMLODIPINE\TELMISARTAN [Suspect]
     Active Substance: AMLODIPINE\TELMISARTAN
     Route: 065
  376. AMLODIPINE MESYLATE [Suspect]
     Active Substance: AMLODIPINE MESYLATE
     Indication: Coronary artery disease
     Dosage: 5.0 MG, QD
     Route: 065
  377. AMLODIPINE MESYLATE [Suspect]
     Active Substance: AMLODIPINE MESYLATE
     Dosage: 5.0 MG, QD
     Route: 065
  378. AMLODIPINE MESYLATE [Suspect]
     Active Substance: AMLODIPINE MESYLATE
     Dosage: 5.0 MG, QD
     Route: 065
  379. AMLODIPINE MESYLATE [Suspect]
     Active Substance: AMLODIPINE MESYLATE
     Dosage: 5.0 MG, QD
     Route: 065
  380. AMLODIPINE MESYLATE [Suspect]
     Active Substance: AMLODIPINE MESYLATE
     Dosage: 5.0 MG, QD
     Route: 065
  381. AMLODIPINE MESYLATE [Suspect]
     Active Substance: AMLODIPINE MESYLATE
     Dosage: 5.0 MG, QD
     Route: 065
  382. AMLODIPINE MESYLATE [Suspect]
     Active Substance: AMLODIPINE MESYLATE
     Dosage: 5.0 MG, QD
     Route: 065
  383. AMLODIPINE MESYLATE [Suspect]
     Active Substance: AMLODIPINE MESYLATE
     Dosage: 5.0 MG, QD
     Route: 065
  384. AMLODIPINE MESYLATE [Suspect]
     Active Substance: AMLODIPINE MESYLATE
     Dosage: 5.0 MG, QD
     Route: 065
  385. AMLODIPINE MESYLATE [Suspect]
     Active Substance: AMLODIPINE MESYLATE
     Dosage: 5.0 MG, QD
     Route: 065
  386. AMLODIPINE MESYLATE [Suspect]
     Active Substance: AMLODIPINE MESYLATE
     Dosage: 5.0 MG, QD
     Route: 065
  387. AMLODIPINE MESYLATE [Suspect]
     Active Substance: AMLODIPINE MESYLATE
     Dosage: 5.0 MG, QD
     Route: 065
  388. AMLODIPINE MESYLATE [Suspect]
     Active Substance: AMLODIPINE MESYLATE
     Dosage: 5.0 MG, QD
     Route: 065
  389. AMLODIPINE MESYLATE [Suspect]
     Active Substance: AMLODIPINE MESYLATE
     Dosage: 5.0 MG, QD
     Route: 065
  390. AMLODIPINE MESYLATE [Suspect]
     Active Substance: AMLODIPINE MESYLATE
     Dosage: 5.0 MG, QD
     Route: 065
  391. AMLODIPINE MESYLATE [Suspect]
     Active Substance: AMLODIPINE MESYLATE
     Dosage: 5.0 MG, QD
     Route: 065
  392. AMLODIPINE MESYLATE [Suspect]
     Active Substance: AMLODIPINE MESYLATE
     Dosage: 5.0 MG, QD
     Route: 065
  393. AMLODIPINE MESYLATE [Suspect]
     Active Substance: AMLODIPINE MESYLATE
     Dosage: 5.0 MG, QD
     Route: 065
  394. AMLODIPINE MESYLATE [Suspect]
     Active Substance: AMLODIPINE MESYLATE
     Dosage: 5.0 MG, QD
     Route: 065
  395. AMLODIPINE MESYLATE [Suspect]
     Active Substance: AMLODIPINE MESYLATE
     Dosage: 5.0 MG, QD
     Route: 065
  396. AMLODIPINE MESYLATE [Suspect]
     Active Substance: AMLODIPINE MESYLATE
     Dosage: 5.0 MG, QD
     Route: 065
  397. AMLODIPINE MESYLATE [Suspect]
     Active Substance: AMLODIPINE MESYLATE
     Dosage: 5.0 MG, QD
     Route: 065
  398. AMLODIPINE MESYLATE [Suspect]
     Active Substance: AMLODIPINE MESYLATE
     Dosage: 5.0 MG, QD
     Route: 065
  399. AMLODIPINE MESYLATE [Suspect]
     Active Substance: AMLODIPINE MESYLATE
     Dosage: 5.0 MG, QD
     Route: 065
  400. AMLODIPINE MESYLATE [Suspect]
     Active Substance: AMLODIPINE MESYLATE
     Dosage: 5.0 MG, QD
     Route: 065
  401. AMLODIPINE MESYLATE [Suspect]
     Active Substance: AMLODIPINE MESYLATE
     Dosage: 5.0 MG, QD
     Route: 065
  402. AMLODIPINE MESYLATE [Suspect]
     Active Substance: AMLODIPINE MESYLATE
     Dosage: 5.0 MG, QD
     Route: 065
  403. AMLODIPINE MESYLATE [Suspect]
     Active Substance: AMLODIPINE MESYLATE
     Dosage: 5.0 MG, QD
     Route: 065
  404. AMLODIPINE MESYLATE [Suspect]
     Active Substance: AMLODIPINE MESYLATE
     Dosage: 5.0 MG, QD
     Route: 065
  405. AMLODIPINE MESYLATE [Suspect]
     Active Substance: AMLODIPINE MESYLATE
     Dosage: 5.0 MG, QD
     Route: 065
  406. AMLODIPINE MESYLATE [Suspect]
     Active Substance: AMLODIPINE MESYLATE
     Dosage: 5.0 MG, QD
     Route: 065
  407. AMLODIPINE MESYLATE [Suspect]
     Active Substance: AMLODIPINE MESYLATE
     Dosage: 5.0 MG, QD
     Route: 065
  408. AMLODIPINE MESYLATE [Suspect]
     Active Substance: AMLODIPINE MESYLATE
     Dosage: 5.0 MG, QD
     Route: 065
  409. AMLODIPINE MESYLATE [Suspect]
     Active Substance: AMLODIPINE MESYLATE
     Dosage: 5.0 MG, QD
     Route: 065
  410. AMLODIPINE MESYLATE [Suspect]
     Active Substance: AMLODIPINE MESYLATE
     Dosage: 5.0 MG, QD
     Route: 065
  411. AMLODIPINE MESYLATE [Suspect]
     Active Substance: AMLODIPINE MESYLATE
     Dosage: 5.0 MG, QD
     Route: 065
  412. AMLODIPINE MESYLATE [Suspect]
     Active Substance: AMLODIPINE MESYLATE
     Dosage: 5.0 MG, QD
     Route: 065
  413. AMLODIPINE MESYLATE [Suspect]
     Active Substance: AMLODIPINE MESYLATE
     Dosage: 5.0 MG, QD
     Route: 065
  414. AMLODIPINE MESYLATE [Suspect]
     Active Substance: AMLODIPINE MESYLATE
     Dosage: 5.0 MG, QD
     Route: 065
  415. AMLODIPINE MESYLATE [Suspect]
     Active Substance: AMLODIPINE MESYLATE
     Dosage: 5.0 MG, QD
     Route: 065
  416. AMLODIPINE MESYLATE [Suspect]
     Active Substance: AMLODIPINE MESYLATE
     Dosage: 5.0 MG, QD
     Route: 065
  417. AMLODIPINE MESYLATE [Suspect]
     Active Substance: AMLODIPINE MESYLATE
     Dosage: 5.0 MG, QD
     Route: 065
  418. AMLODIPINE MESYLATE [Suspect]
     Active Substance: AMLODIPINE MESYLATE
     Dosage: 5.0 MG, QD
     Route: 065
  419. AMLODIPINE MESYLATE [Suspect]
     Active Substance: AMLODIPINE MESYLATE
     Dosage: 5.0 MG, QD
     Route: 065
  420. AMLODIPINE MESYLATE [Suspect]
     Active Substance: AMLODIPINE MESYLATE
     Dosage: 5.0 MG, QD
     Route: 065
  421. AMLODIPINE MESYLATE [Suspect]
     Active Substance: AMLODIPINE MESYLATE
     Indication: Angina pectoris
     Route: 065
  422. AMLODIPINE MESYLATE [Suspect]
     Active Substance: AMLODIPINE MESYLATE
     Indication: Chest pain
     Route: 065
  423. AMLODIPINE MESYLATE [Suspect]
     Active Substance: AMLODIPINE MESYLATE
     Route: 065
  424. AMLODIPINE MESYLATE [Suspect]
     Active Substance: AMLODIPINE MESYLATE
     Indication: Hypertension
     Route: 065
  425. AMITRIPTYLINE HYDROCHLORIDE [Suspect]
     Active Substance: AMITRIPTYLINE HYDROCHLORIDE
     Route: 065
  426. AMITRIPTYLINE HYDROCHLORIDE [Suspect]
     Active Substance: AMITRIPTYLINE HYDROCHLORIDE
     Route: 065
  427. AMITRIPTYLINE HYDROCHLORIDE [Suspect]
     Active Substance: AMITRIPTYLINE HYDROCHLORIDE
     Route: 065
  428. AMITRIPTYLINE HYDROCHLORIDE [Suspect]
     Active Substance: AMITRIPTYLINE HYDROCHLORIDE
     Indication: Product used for unknown indication
     Route: 065
  429. AMITRIPTYLINE HYDROCHLORIDE [Suspect]
     Active Substance: AMITRIPTYLINE HYDROCHLORIDE
     Route: 065
  430. AMITRIPTYLINE HYDROCHLORIDE [Suspect]
     Active Substance: AMITRIPTYLINE HYDROCHLORIDE
     Indication: Insomnia
     Route: 065
  431. CARBAMAZEPINE [Suspect]
     Active Substance: CARBAMAZEPINE
     Indication: Product used for unknown indication
     Dosage: 200 MG, Q12H
     Route: 065
  432. CARBAMAZEPINE [Suspect]
     Active Substance: CARBAMAZEPINE
     Indication: Prophylaxis
     Dosage: 200 MG, Q12H
     Route: 065
  433. CARBAMAZEPINE [Suspect]
     Active Substance: CARBAMAZEPINE
     Dosage: 200 MG, Q12H
     Route: 065
  434. CARBAMAZEPINE [Suspect]
     Active Substance: CARBAMAZEPINE
     Dosage: 200 MG, Q12H
     Route: 065
  435. CARBAMAZEPINE [Suspect]
     Active Substance: CARBAMAZEPINE
     Dosage: 200 MG, Q12H
     Route: 065
  436. CARBAMAZEPINE [Suspect]
     Active Substance: CARBAMAZEPINE
     Dosage: 200 MG, Q12H
     Route: 065
  437. CARBAMAZEPINE [Suspect]
     Active Substance: CARBAMAZEPINE
     Dosage: 200 MG, Q12H
     Route: 065
  438. CARBAMAZEPINE [Suspect]
     Active Substance: CARBAMAZEPINE
     Dosage: 200 MG, Q12H
     Route: 065
  439. CARBAMAZEPINE [Suspect]
     Active Substance: CARBAMAZEPINE
     Dosage: 200 MG, Q12H
     Route: 065
  440. CARBAMAZEPINE [Suspect]
     Active Substance: CARBAMAZEPINE
     Dosage: 200 MG, Q12H
     Route: 065
  441. CARBAMAZEPINE [Suspect]
     Active Substance: CARBAMAZEPINE
     Dosage: 200 MG, Q12H
     Route: 065
  442. CARBAMAZEPINE [Suspect]
     Active Substance: CARBAMAZEPINE
     Dosage: 200 MG, Q12H
     Route: 065
  443. CARBAMAZEPINE [Suspect]
     Active Substance: CARBAMAZEPINE
     Dosage: 200 MG, Q12H
     Route: 065
  444. CARBAMAZEPINE [Suspect]
     Active Substance: CARBAMAZEPINE
     Dosage: 200 MG, Q12H
     Route: 065
  445. CARBAMAZEPINE [Suspect]
     Active Substance: CARBAMAZEPINE
     Dosage: 200 MG, Q12H
     Route: 065
  446. CARBAMAZEPINE [Suspect]
     Active Substance: CARBAMAZEPINE
     Dosage: 200.0 MG, BID
     Route: 065
  447. CARBAMAZEPINE [Suspect]
     Active Substance: CARBAMAZEPINE
     Route: 065
  448. CARBAMAZEPINE [Suspect]
     Active Substance: CARBAMAZEPINE
     Indication: Fibromyalgia
     Dosage: 5.0 MG, QH
     Route: 065
  449. CARBAMAZEPINE [Suspect]
     Active Substance: CARBAMAZEPINE
     Indication: Seizure
     Dosage: 5.0 MG, QH
     Route: 065
  450. CARBAMAZEPINE [Suspect]
     Active Substance: CARBAMAZEPINE
     Dosage: 5.0 MG, QH
     Route: 065
  451. CARBAMAZEPINE [Suspect]
     Active Substance: CARBAMAZEPINE
     Dosage: 5.0 MG, QH
     Route: 065
  452. CARBAMAZEPINE [Suspect]
     Active Substance: CARBAMAZEPINE
     Indication: Pain
     Route: 065
  453. CARBAMAZEPINE [Suspect]
     Active Substance: CARBAMAZEPINE
     Route: 065
  454. CARBAMAZEPINE [Suspect]
     Active Substance: CARBAMAZEPINE
     Route: 065
  455. CARBAMAZEPINE [Suspect]
     Active Substance: CARBAMAZEPINE
     Route: 065
  456. CARBAMAZEPINE [Suspect]
     Active Substance: CARBAMAZEPINE
     Route: 065
  457. CARBAMAZEPINE [Suspect]
     Active Substance: CARBAMAZEPINE
     Route: 065
  458. CARBAMAZEPINE [Suspect]
     Active Substance: CARBAMAZEPINE
     Route: 065
  459. CARBAMAZEPINE [Suspect]
     Active Substance: CARBAMAZEPINE
     Route: 065
  460. CARBAMAZEPINE [Suspect]
     Active Substance: CARBAMAZEPINE
     Route: 065
  461. CARBAMAZEPINE [Suspect]
     Active Substance: CARBAMAZEPINE
     Route: 065
  462. CARBAMAZEPINE [Suspect]
     Active Substance: CARBAMAZEPINE
     Route: 065
  463. CARBAMAZEPINE [Suspect]
     Active Substance: CARBAMAZEPINE
     Route: 065
  464. CARBAMAZEPINE [Suspect]
     Active Substance: CARBAMAZEPINE
     Route: 065
  465. CARBAMAZEPINE [Suspect]
     Active Substance: CARBAMAZEPINE
     Route: 065
  466. CARBAMAZEPINE [Suspect]
     Active Substance: CARBAMAZEPINE
     Route: 065
  467. CYCLOBENZAPRINE [Suspect]
     Active Substance: CYCLOBENZAPRINE
     Route: 065
  468. CYCLOBENZAPRINE [Suspect]
     Active Substance: CYCLOBENZAPRINE
     Indication: Seizure prophylaxis
     Dosage: 5 MG, TID
     Route: 065
  469. CYCLOBENZAPRINE [Suspect]
     Active Substance: CYCLOBENZAPRINE
     Dosage: 5 MG, TID
     Route: 065
  470. CYCLOBENZAPRINE [Suspect]
     Active Substance: CYCLOBENZAPRINE
     Dosage: 5 MG, TID
     Route: 065
  471. CYCLOBENZAPRINE [Suspect]
     Active Substance: CYCLOBENZAPRINE
     Dosage: 5 MG, TID
     Route: 065
  472. CYCLOBENZAPRINE [Suspect]
     Active Substance: CYCLOBENZAPRINE
     Dosage: 5 MG, TID
     Route: 065
  473. CYCLOBENZAPRINE [Suspect]
     Active Substance: CYCLOBENZAPRINE
     Indication: Product used for unknown indication
     Dosage: 5.0 MG, QID
     Route: 065
  474. CYCLOBENZAPRINE [Suspect]
     Active Substance: CYCLOBENZAPRINE
     Dosage: 5.0 MG, QID
     Route: 065
  475. CYCLOBENZAPRINE [Suspect]
     Active Substance: CYCLOBENZAPRINE
     Indication: Fibromyalgia
     Route: 065
  476. DILTIAZEM HYDROCHLORIDE [Suspect]
     Active Substance: DILTIAZEM HYDROCHLORIDE
     Dosage: 360 MG, QID
     Route: 065
  477. DILTIAZEM HYDROCHLORIDE [Suspect]
     Active Substance: DILTIAZEM HYDROCHLORIDE
     Dosage: 360 MG, QID
     Route: 065
  478. DILTIAZEM HYDROCHLORIDE [Suspect]
     Active Substance: DILTIAZEM HYDROCHLORIDE
     Dosage: 360 MG, QID
     Route: 065
  479. DILTIAZEM HYDROCHLORIDE [Suspect]
     Active Substance: DILTIAZEM HYDROCHLORIDE
     Dosage: 360 MG, QID
     Route: 065
  480. DILTIAZEM HYDROCHLORIDE [Suspect]
     Active Substance: DILTIAZEM HYDROCHLORIDE
     Dosage: 360 MG, QID
     Route: 065
  481. DILTIAZEM HYDROCHLORIDE [Suspect]
     Active Substance: DILTIAZEM HYDROCHLORIDE
     Dosage: 360 MG, QID
     Route: 065
  482. DILTIAZEM HYDROCHLORIDE [Suspect]
     Active Substance: DILTIAZEM HYDROCHLORIDE
     Dosage: 360 MG, QID
     Route: 065
  483. DILTIAZEM HYDROCHLORIDE [Suspect]
     Active Substance: DILTIAZEM HYDROCHLORIDE
     Dosage: 360 MG, QID
     Route: 065
  484. DILTIAZEM HYDROCHLORIDE [Suspect]
     Active Substance: DILTIAZEM HYDROCHLORIDE
     Dosage: 360 MG, QID
     Route: 065
  485. DILTIAZEM HYDROCHLORIDE [Suspect]
     Active Substance: DILTIAZEM HYDROCHLORIDE
     Dosage: 360 MG, QID
     Route: 065
  486. DILTIAZEM HYDROCHLORIDE [Suspect]
     Active Substance: DILTIAZEM HYDROCHLORIDE
     Dosage: 360 MG, QID
     Route: 065
  487. DILTIAZEM HYDROCHLORIDE [Suspect]
     Active Substance: DILTIAZEM HYDROCHLORIDE
     Dosage: 360 MG, QID
     Route: 065
  488. DILTIAZEM HYDROCHLORIDE [Suspect]
     Active Substance: DILTIAZEM HYDROCHLORIDE
     Dosage: 360 MG, QID
     Route: 065
  489. DILTIAZEM HYDROCHLORIDE [Suspect]
     Active Substance: DILTIAZEM HYDROCHLORIDE
     Dosage: 360 MG, QID
     Route: 065
  490. DILTIAZEM HYDROCHLORIDE [Suspect]
     Active Substance: DILTIAZEM HYDROCHLORIDE
     Dosage: 360 MG, QID
     Route: 065
  491. DILTIAZEM HYDROCHLORIDE [Suspect]
     Active Substance: DILTIAZEM HYDROCHLORIDE
     Dosage: 360 MG, QID
     Route: 065
  492. DILTIAZEM HYDROCHLORIDE [Suspect]
     Active Substance: DILTIAZEM HYDROCHLORIDE
     Dosage: 360 MG, QID
     Route: 065
  493. DILTIAZEM HYDROCHLORIDE [Suspect]
     Active Substance: DILTIAZEM HYDROCHLORIDE
     Dosage: 360 MG, QID
     Route: 065
  494. DILTIAZEM HYDROCHLORIDE [Suspect]
     Active Substance: DILTIAZEM HYDROCHLORIDE
     Dosage: 360 MG, QID
     Route: 065
  495. DILTIAZEM HYDROCHLORIDE [Suspect]
     Active Substance: DILTIAZEM HYDROCHLORIDE
     Dosage: 360 MG, QID
     Route: 065
  496. DILTIAZEM HYDROCHLORIDE [Suspect]
     Active Substance: DILTIAZEM HYDROCHLORIDE
     Dosage: 360 MG, QID
     Route: 065
  497. DILTIAZEM HYDROCHLORIDE [Suspect]
     Active Substance: DILTIAZEM HYDROCHLORIDE
     Dosage: 360 MG, QID
     Route: 065
  498. DILTIAZEM HYDROCHLORIDE [Suspect]
     Active Substance: DILTIAZEM HYDROCHLORIDE
     Dosage: 360 MG, QID
     Route: 065
  499. DILTIAZEM HYDROCHLORIDE [Suspect]
     Active Substance: DILTIAZEM HYDROCHLORIDE
     Dosage: 360 MG, QID
     Route: 065
  500. DILTIAZEM HYDROCHLORIDE [Suspect]
     Active Substance: DILTIAZEM HYDROCHLORIDE
     Dosage: 360 MG, QID
     Route: 065
  501. DILTIAZEM HYDROCHLORIDE [Suspect]
     Active Substance: DILTIAZEM HYDROCHLORIDE
     Dosage: 360 MG, QID
     Route: 065
  502. DILTIAZEM HYDROCHLORIDE [Suspect]
     Active Substance: DILTIAZEM HYDROCHLORIDE
     Dosage: 360 MG, QID
     Route: 065
  503. DILTIAZEM HYDROCHLORIDE [Suspect]
     Active Substance: DILTIAZEM HYDROCHLORIDE
     Dosage: 360 MG, QID
     Route: 065
  504. DILTIAZEM HYDROCHLORIDE [Suspect]
     Active Substance: DILTIAZEM HYDROCHLORIDE
     Dosage: 360 MG, QID
     Route: 065
  505. DILTIAZEM HYDROCHLORIDE [Suspect]
     Active Substance: DILTIAZEM HYDROCHLORIDE
     Dosage: 360 MG, QID
     Route: 065
  506. DILTIAZEM HYDROCHLORIDE [Suspect]
     Active Substance: DILTIAZEM HYDROCHLORIDE
     Dosage: 360 MG, QID
     Route: 065
  507. DILTIAZEM HYDROCHLORIDE [Suspect]
     Active Substance: DILTIAZEM HYDROCHLORIDE
     Dosage: 360 MG, QID
     Route: 065
  508. DILTIAZEM HYDROCHLORIDE [Suspect]
     Active Substance: DILTIAZEM HYDROCHLORIDE
     Dosage: 360 MG, QID
     Route: 065
  509. DILTIAZEM HYDROCHLORIDE [Suspect]
     Active Substance: DILTIAZEM HYDROCHLORIDE
     Dosage: 360 MG, QID
     Route: 065
  510. DILTIAZEM HYDROCHLORIDE [Suspect]
     Active Substance: DILTIAZEM HYDROCHLORIDE
     Dosage: 360 MG, QID
     Route: 065
  511. DILTIAZEM HYDROCHLORIDE [Suspect]
     Active Substance: DILTIAZEM HYDROCHLORIDE
     Dosage: 360 MG, QID
     Route: 065
  512. DILTIAZEM HYDROCHLORIDE [Suspect]
     Active Substance: DILTIAZEM HYDROCHLORIDE
     Dosage: 360 MG, QID
     Route: 065
  513. DILTIAZEM HYDROCHLORIDE [Suspect]
     Active Substance: DILTIAZEM HYDROCHLORIDE
     Dosage: 360 MG, QID
     Route: 065
  514. DILTIAZEM HYDROCHLORIDE [Suspect]
     Active Substance: DILTIAZEM HYDROCHLORIDE
     Dosage: 360 MG, QID
     Route: 065
  515. DILTIAZEM HYDROCHLORIDE [Suspect]
     Active Substance: DILTIAZEM HYDROCHLORIDE
     Dosage: 360 MG, QID
     Route: 065
  516. DILTIAZEM HYDROCHLORIDE [Suspect]
     Active Substance: DILTIAZEM HYDROCHLORIDE
     Dosage: 360 MG, QID
     Route: 065
  517. DILTIAZEM HYDROCHLORIDE [Suspect]
     Active Substance: DILTIAZEM HYDROCHLORIDE
     Dosage: 360 MG, QID
     Route: 065
  518. DILTIAZEM HYDROCHLORIDE [Suspect]
     Active Substance: DILTIAZEM HYDROCHLORIDE
     Dosage: 360 MG, QID
     Route: 065
  519. DILTIAZEM HYDROCHLORIDE [Suspect]
     Active Substance: DILTIAZEM HYDROCHLORIDE
     Dosage: 360 MG, QID
     Route: 065
  520. DILTIAZEM HYDROCHLORIDE [Suspect]
     Active Substance: DILTIAZEM HYDROCHLORIDE
     Dosage: 360 MG, QID
     Route: 065
  521. DILTIAZEM HYDROCHLORIDE [Suspect]
     Active Substance: DILTIAZEM HYDROCHLORIDE
     Indication: Angina pectoris
     Route: 065
  522. DILTIAZEM HYDROCHLORIDE [Suspect]
     Active Substance: DILTIAZEM HYDROCHLORIDE
     Indication: Chest pain
     Route: 065
  523. DILTIAZEM HYDROCHLORIDE [Suspect]
     Active Substance: DILTIAZEM HYDROCHLORIDE
     Indication: Coronary artery disease
     Route: 065
  524. DILTIAZEM HYDROCHLORIDE [Suspect]
     Active Substance: DILTIAZEM HYDROCHLORIDE
     Indication: Hypertension
     Route: 065
  525. DILTIAZEM HYDROCHLORIDE [Suspect]
     Active Substance: DILTIAZEM HYDROCHLORIDE
     Indication: Product used for unknown indication
     Route: 065
  526. FUROSEMIDE [Suspect]
     Active Substance: FUROSEMIDE
     Indication: Oedema
     Dosage: 40.0 MG, QD
     Route: 065
  527. OXAZEPAM [Suspect]
     Active Substance: OXAZEPAM
     Indication: Hypertension
     Dosage: 15 MG, QD
     Route: 065
  528. OXAZEPAM [Suspect]
     Active Substance: OXAZEPAM
     Dosage: 15 MG, QD
     Route: 065
  529. OXAZEPAM [Suspect]
     Active Substance: OXAZEPAM
     Dosage: 15 MG, QD
     Route: 065
  530. OXAZEPAM [Suspect]
     Active Substance: OXAZEPAM
     Indication: Angina pectoris
     Dosage: 20 MG, QD
     Route: 065
  531. OXAZEPAM [Suspect]
     Active Substance: OXAZEPAM
     Indication: Insomnia
     Dosage: 360.0 MG, QD
     Route: 065
  532. OXAZEPAM [Suspect]
     Active Substance: OXAZEPAM
     Indication: Product used for unknown indication
     Dosage: 360.0 MG, QD
     Route: 065
  533. OXAZEPAM [Suspect]
     Active Substance: OXAZEPAM
     Indication: Duodenal ulcer
     Dosage: 40 MG, QD
     Route: 065
  534. OXAZEPAM [Suspect]
     Active Substance: OXAZEPAM
     Route: 065
  535. OXAZEPAM [Suspect]
     Active Substance: OXAZEPAM
     Indication: Coronary artery disease
     Route: 065
  536. OXAZEPAM [Suspect]
     Active Substance: OXAZEPAM
     Route: 065
  537. ASPIRIN [Suspect]
     Active Substance: ASPIRIN
     Route: 048
  538. ASPIRIN [Suspect]
     Active Substance: ASPIRIN
     Route: 048
  539. ASPIRIN [Suspect]
     Active Substance: ASPIRIN
     Route: 048
  540. ASPIRIN [Suspect]
     Active Substance: ASPIRIN
     Indication: Angina pectoris
     Route: 065
  541. ASPIRIN [Suspect]
     Active Substance: ASPIRIN
     Indication: Coronary artery disease
     Route: 065
  542. ASPIRIN [Suspect]
     Active Substance: ASPIRIN
     Indication: Hypertension
     Route: 065
  543. ASPIRIN [Suspect]
     Active Substance: ASPIRIN
     Route: 065
  544. ASPIRIN [Suspect]
     Active Substance: ASPIRIN
     Indication: Product used for unknown indication
     Route: 065
  545. ATROPINE [Suspect]
     Active Substance: ATROPINE
     Indication: Chest pain
     Route: 061
  546. ATROPINE [Suspect]
     Active Substance: ATROPINE
     Indication: Angina pectoris
     Route: 065
  547. ATROPINE [Suspect]
     Active Substance: ATROPINE
     Indication: Coronary artery disease
     Route: 065
  548. ATROPINE [Suspect]
     Active Substance: ATROPINE
     Route: 065
  549. ATROPINE [Suspect]
     Active Substance: ATROPINE
     Route: 065
  550. FUROSEMIDE SODIUM [Suspect]
     Active Substance: FUROSEMIDE SODIUM
     Indication: Oedema
     Dosage: 40.0 MG, QD
     Route: 065
  551. ACETAMINOPHEN [Suspect]
     Active Substance: ACETAMINOPHEN
     Indication: Product used for unknown indication
     Route: 065
  552. ACETAMINOSALOL\ASPIRIN\CAFFEINE [Suspect]
     Active Substance: ACETAMINOSALOL\ASPIRIN\CAFFEINE
     Indication: Product used for unknown indication
     Route: 065
  553. ACETAMINOPHEN\ASPIRIN\CAFFEINE [Suspect]
     Active Substance: ACETAMINOPHEN\ASPIRIN\CAFFEINE
     Indication: Product used for unknown indication
     Route: 065
  554. HERBALS [Suspect]
     Active Substance: HERBALS
     Indication: Product used for unknown indication
     Route: 065
  555. HERBALS [Suspect]
     Active Substance: HERBALS
     Indication: Product used for unknown indication
     Route: 065
  556. MAGNESIUM ALUMINUM SILICATE [Suspect]
     Active Substance: MAGNESIUM ALUMINUM SILICATE
     Indication: Constipation
     Route: 065
  557. AMBROXOL HYDROCHLORIDE\CLENBUTEROL [Suspect]
     Active Substance: AMBROXOL HYDROCHLORIDE\CLENBUTEROL
     Indication: Product used for unknown indication
     Route: 065
  558. AMINOPHYLLINE\THEOPHYLLINE [Suspect]
     Active Substance: AMINOPHYLLINE\THEOPHYLLINE
     Indication: Coronary artery disease
     Route: 061
  559. AMINOPHYLLINE\THEOPHYLLINE [Suspect]
     Active Substance: AMINOPHYLLINE\THEOPHYLLINE
     Indication: Angina pectoris
     Route: 065
  560. AMINOPHYLLINE\THEOPHYLLINE [Suspect]
     Active Substance: AMINOPHYLLINE\THEOPHYLLINE
     Indication: Chest pain
  561. AMINOPHYLLINE\BROMHEXINE\CHLORPHENIRAMINE [Suspect]
     Active Substance: AMINOPHYLLINE\BROMHEXINE\CHLORPHENIRAMINE
     Indication: Coronary artery disease
     Route: 061
  562. AMINOPHYLLINE\BROMHEXINE\CHLORPHENIRAMINE [Suspect]
     Active Substance: AMINOPHYLLINE\BROMHEXINE\CHLORPHENIRAMINE
     Indication: Angina pectoris
     Route: 065
  563. AMINOPHYLLINE\BROMHEXINE\CHLORPHENIRAMINE [Suspect]
     Active Substance: AMINOPHYLLINE\BROMHEXINE\CHLORPHENIRAMINE
     Indication: Chest pain
     Route: 065
  564. AMITRIPTYLINE HYDROCHLORIDE\DIAZEPAM [Suspect]
     Active Substance: AMITRIPTYLINE HYDROCHLORIDE\DIAZEPAM
     Route: 065
  565. AMITRIPTYLINE HYDROCHLORIDE\DIAZEPAM [Suspect]
     Active Substance: AMITRIPTYLINE HYDROCHLORIDE\DIAZEPAM
     Route: 065
  566. AMITRIPTYLINE HYDROCHLORIDE\DIAZEPAM [Suspect]
     Active Substance: AMITRIPTYLINE HYDROCHLORIDE\DIAZEPAM
     Indication: Insomnia
     Route: 065
  567. AMITRIPTYLINE PAMOATE\PERPHENAZINE [Suspect]
     Active Substance: AMITRIPTYLINE PAMOATE\PERPHENAZINE
     Indication: Insomnia
     Route: 065
  568. AMITRIPTYLINE PAMOATE\PERPHENAZINE [Suspect]
     Active Substance: AMITRIPTYLINE PAMOATE\PERPHENAZINE
     Route: 065
  569. AMITRIPTYLINE PAMOATE\PERPHENAZINE [Suspect]
     Active Substance: AMITRIPTYLINE PAMOATE\PERPHENAZINE
     Route: 065
  570. AMITRIPTYLINE PAMOATE\PERPHENAZINE [Suspect]
     Active Substance: AMITRIPTYLINE PAMOATE\PERPHENAZINE
     Route: 065
  571. AMITRIPTYLINE PAMOATE\PERPHENAZINE [Suspect]
     Active Substance: AMITRIPTYLINE PAMOATE\PERPHENAZINE
     Route: 065
  572. AMITRIPTYLINE PAMOATE\PERPHENAZINE [Suspect]
     Active Substance: AMITRIPTYLINE PAMOATE\PERPHENAZINE
     Route: 065
  573. AMITRIPTYLINE PAMOATE\PERPHENAZINE [Suspect]
     Active Substance: AMITRIPTYLINE PAMOATE\PERPHENAZINE
     Route: 065
  574. AMITRIPTYLINE PAMOATE\PERPHENAZINE [Suspect]
     Active Substance: AMITRIPTYLINE PAMOATE\PERPHENAZINE
     Route: 065
  575. AMITRIPTYLINE PAMOATE\PERPHENAZINE [Suspect]
     Active Substance: AMITRIPTYLINE PAMOATE\PERPHENAZINE
     Route: 065
  576. AMITRIPTYLINE PAMOATE\PERPHENAZINE [Suspect]
     Active Substance: AMITRIPTYLINE PAMOATE\PERPHENAZINE
     Route: 065
  577. AMLODIPINE MESYLATE [Suspect]
     Active Substance: AMLODIPINE MESYLATE
     Indication: Angina pectoris
     Route: 065
  578. AMLODIPINE MESYLATE [Suspect]
     Active Substance: AMLODIPINE MESYLATE
     Indication: Chest pain
     Route: 065
  579. AMLODIPINE MESYLATE [Suspect]
     Active Substance: AMLODIPINE MESYLATE
     Indication: Coronary artery disease
     Route: 065
  580. AMLODIPINE MESYLATE [Suspect]
     Active Substance: AMLODIPINE MESYLATE
     Indication: Hypertension
     Route: 065
  581. AMLODIPINE MESYLATE [Suspect]
     Active Substance: AMLODIPINE MESYLATE
     Route: 065
  582. AMLODIPINE MESYLATE [Suspect]
     Active Substance: AMLODIPINE MESYLATE
     Route: 065
  583. AMLODIPINE MESYLATE [Suspect]
     Active Substance: AMLODIPINE MESYLATE
     Route: 065
  584. AMLODIPINE MESYLATE [Suspect]
     Active Substance: AMLODIPINE MESYLATE
     Route: 065
  585. AMLODIPINE MESYLATE [Suspect]
     Active Substance: AMLODIPINE MESYLATE
     Route: 065
  586. AMLODIPINE MESYLATE [Suspect]
     Active Substance: AMLODIPINE MESYLATE
     Route: 065
  587. AMLODIPINE MESYLATE [Suspect]
     Active Substance: AMLODIPINE MESYLATE
     Route: 065
  588. AMLODIPINE MESYLATE [Suspect]
     Active Substance: AMLODIPINE MESYLATE
     Route: 065
  589. AMLODIPINE MESYLATE [Suspect]
     Active Substance: AMLODIPINE MESYLATE
     Route: 065
  590. AMLODIPINE MESYLATE [Suspect]
     Active Substance: AMLODIPINE MESYLATE
     Route: 065
  591. AMLODIPINE MESYLATE [Suspect]
     Active Substance: AMLODIPINE MESYLATE
     Route: 065
  592. AMLODIPINE MESYLATE [Suspect]
     Active Substance: AMLODIPINE MESYLATE
     Route: 065
  593. AMLODIPINE MESYLATE [Suspect]
     Active Substance: AMLODIPINE MESYLATE
     Route: 065
  594. AMLODIPINE MESYLATE [Suspect]
     Active Substance: AMLODIPINE MESYLATE
     Route: 065
  595. AMLODIPINE MESYLATE [Suspect]
     Active Substance: AMLODIPINE MESYLATE
     Route: 065
  596. AMLODIPINE MESYLATE [Suspect]
     Active Substance: AMLODIPINE MESYLATE
     Route: 065
  597. AMLODIPINE MESYLATE [Suspect]
     Active Substance: AMLODIPINE MESYLATE
     Route: 065
  598. AMLODIPINE MESYLATE [Suspect]
     Active Substance: AMLODIPINE MESYLATE
     Route: 065
  599. AMLODIPINE MESYLATE [Suspect]
     Active Substance: AMLODIPINE MESYLATE
     Route: 065
  600. AMLODIPINE MESYLATE [Suspect]
     Active Substance: AMLODIPINE MESYLATE
     Route: 065
  601. AMLODIPINE MESYLATE [Suspect]
     Active Substance: AMLODIPINE MESYLATE
     Route: 065
  602. AMLODIPINE MESYLATE [Suspect]
     Active Substance: AMLODIPINE MESYLATE
     Route: 065
  603. AMLODIPINE MESYLATE [Suspect]
     Active Substance: AMLODIPINE MESYLATE
     Route: 065
  604. AMLODIPINE MESYLATE [Suspect]
     Active Substance: AMLODIPINE MESYLATE
     Route: 065
  605. AMLODIPINE MESYLATE [Suspect]
     Active Substance: AMLODIPINE MESYLATE
     Route: 065
  606. AMLODIPINE MESYLATE [Suspect]
     Active Substance: AMLODIPINE MESYLATE
     Route: 065
  607. AMLODIPINE MESYLATE [Suspect]
     Active Substance: AMLODIPINE MESYLATE
     Route: 065
  608. HYDROCHLOROTHIAZIDE\QUINAPRIL HYDROCHLORIDE [Suspect]
     Active Substance: HYDROCHLOROTHIAZIDE\QUINAPRIL HYDROCHLORIDE
     Indication: Hypertension
     Route: 065
  609. HYDROCHLOROTHIAZIDE\QUINAPRIL HYDROCHLORIDE [Suspect]
     Active Substance: HYDROCHLOROTHIAZIDE\QUINAPRIL HYDROCHLORIDE
     Indication: Coronary artery dilatation
     Route: 065
  610. HYDROCHLOROTHIAZIDE\QUINAPRIL HYDROCHLORIDE [Suspect]
     Active Substance: HYDROCHLOROTHIAZIDE\QUINAPRIL HYDROCHLORIDE
     Indication: Chest pain
     Route: 065
  611. HYDROCHLOROTHIAZIDE\QUINAPRIL HYDROCHLORIDE [Suspect]
     Active Substance: HYDROCHLOROTHIAZIDE\QUINAPRIL HYDROCHLORIDE
     Indication: Angina pectoris
  612. BISACODYL [Suspect]
     Active Substance: BISACODYL
     Indication: Chronic obstructive pulmonary disease
     Dosage: 1.0 DF, QD
     Route: 065
  613. BISACODYL [Suspect]
     Active Substance: BISACODYL
     Route: 065
  614. BISACODYL [Suspect]
     Active Substance: BISACODYL
     Indication: Constipation
     Dosage: 2 DF, QD
     Route: 065
  615. BISACODYL [Suspect]
     Active Substance: BISACODYL
     Dosage: 2 DOSAGE FORM, QD
     Route: 048
  616. BISACODYL [Suspect]
     Active Substance: BISACODYL
     Route: 065
  617. BISACODYL [Suspect]
     Active Substance: BISACODYL
     Dosage: 650 MG, QD
     Route: 065
  618. BISACODYL [Suspect]
     Active Substance: BISACODYL
     Route: 065
  619. CAFFEINE [Suspect]
     Active Substance: CAFFEINE
     Indication: Product used for unknown indication
     Route: 065
  620. CALCIUM [Suspect]
     Active Substance: CALCIUM
     Indication: Product used for unknown indication
     Route: 065
  621. CALCIUM CARBONATE [Suspect]
     Active Substance: CALCIUM CARBONATE
     Indication: Product used for unknown indication
     Route: 065
  622. CALCIUM CARBONATE [Suspect]
     Active Substance: CALCIUM CARBONATE
     Route: 065
  623. CARBAMAZEPINE [Suspect]
     Active Substance: CARBAMAZEPINE
     Dosage: 1 DF, QD
     Route: 065
  624. CARBAMAZEPINE [Suspect]
     Active Substance: CARBAMAZEPINE
     Dosage: 1 DF, QD
     Route: 065
  625. CARBAMAZEPINE [Suspect]
     Active Substance: CARBAMAZEPINE
     Dosage: 1 DF, Q12H
     Route: 065
  626. CARBAMAZEPINE [Suspect]
     Active Substance: CARBAMAZEPINE
     Indication: Pain
     Dosage: 100 MG, Q12H
     Route: 065
  627. CARBAMAZEPINE [Suspect]
     Active Substance: CARBAMAZEPINE
     Indication: Seizure
     Dosage: 100 MG, Q12H
     Route: 065
  628. CARBAMAZEPINE [Suspect]
     Active Substance: CARBAMAZEPINE
     Dosage: 100 MG, Q12H
     Route: 065
  629. CARBAMAZEPINE [Suspect]
     Active Substance: CARBAMAZEPINE
     Dosage: 100 MG, Q12H
     Route: 065
  630. CARBAMAZEPINE [Suspect]
     Active Substance: CARBAMAZEPINE
     Dosage: 100 MG, Q12H
     Route: 065
  631. CARBAMAZEPINE [Suspect]
     Active Substance: CARBAMAZEPINE
     Dosage: 100 MG, Q12H
     Route: 065
  632. CARBAMAZEPINE [Suspect]
     Active Substance: CARBAMAZEPINE
     Dosage: 100 MG, Q12H
     Route: 065
  633. CARBAMAZEPINE [Suspect]
     Active Substance: CARBAMAZEPINE
     Indication: Seizure prophylaxis
     Route: 065
  634. CARBAMAZEPINE [Suspect]
     Active Substance: CARBAMAZEPINE
     Route: 065
  635. CARBAMAZEPINE [Suspect]
     Active Substance: CARBAMAZEPINE
     Route: 065
  636. CARBAMAZEPINE [Suspect]
     Active Substance: CARBAMAZEPINE
     Route: 065
  637. CARBAMAZEPINE [Suspect]
     Active Substance: CARBAMAZEPINE
     Dosage: 2 DF, QD
     Route: 065
  638. CARBAMAZEPINE [Suspect]
     Active Substance: CARBAMAZEPINE
     Dosage: 2 DF, QD
     Route: 065
  639. CARBAMAZEPINE [Suspect]
     Active Substance: CARBAMAZEPINE
     Dosage: 2 DF, QD
     Route: 065
  640. CARBAMAZEPINE [Suspect]
     Active Substance: CARBAMAZEPINE
     Dosage: 2 DF, QD
     Route: 065
  641. CARBAMAZEPINE [Suspect]
     Active Substance: CARBAMAZEPINE
     Dosage: 2 DF, QD
     Route: 065
  642. CARBAMAZEPINE [Suspect]
     Active Substance: CARBAMAZEPINE
     Dosage: 2 DF, QD
     Route: 065
  643. CARBAMAZEPINE [Suspect]
     Active Substance: CARBAMAZEPINE
     Dosage: 2 DF, Q12H
     Route: 065
  644. CARBAMAZEPINE [Suspect]
     Active Substance: CARBAMAZEPINE
     Indication: Fibromyalgia
     Dosage: 200 MG, QD
     Route: 065
  645. CARBAMAZEPINE [Suspect]
     Active Substance: CARBAMAZEPINE
     Dosage: 200 MG, Q12H
     Route: 065
  646. CARBAMAZEPINE [Suspect]
     Active Substance: CARBAMAZEPINE
     Dosage: 200 MG, Q12H
     Route: 065
  647. CARBAMAZEPINE [Suspect]
     Active Substance: CARBAMAZEPINE
     Dosage: 200.0 MG, Q12H
     Route: 065
  648. CARBAMAZEPINE [Suspect]
     Active Substance: CARBAMAZEPINE
     Indication: Seizure prophylaxis
     Dosage: 200 MG, BID
     Route: 065
  649. CARBAMAZEPINE [Suspect]
     Active Substance: CARBAMAZEPINE
     Dosage: 200 MG, BID
     Route: 065
  650. CARBAMAZEPINE [Suspect]
     Active Substance: CARBAMAZEPINE
     Dosage: 200 MG, BID
     Route: 065
  651. CARBAMAZEPINE [Suspect]
     Active Substance: CARBAMAZEPINE
     Dosage: 200.0 MG, BID
     Route: 065
  652. CARBAMAZEPINE [Suspect]
     Active Substance: CARBAMAZEPINE
     Indication: Bladder disorder
     Route: 065
  653. CARBAMAZEPINE [Suspect]
     Active Substance: CARBAMAZEPINE
     Indication: Product used for unknown indication
     Route: 065
  654. CARBAMAZEPINE [Suspect]
     Active Substance: CARBAMAZEPINE
     Indication: Prophylaxis
     Route: 065
  655. CARBAMAZEPINE [Suspect]
     Active Substance: CARBAMAZEPINE
     Route: 065
  656. CARBAMAZEPINE [Suspect]
     Active Substance: CARBAMAZEPINE
     Route: 065
  657. CARBAMAZEPINE [Suspect]
     Active Substance: CARBAMAZEPINE
     Route: 065
  658. CARBAMAZEPINE [Suspect]
     Active Substance: CARBAMAZEPINE
     Route: 065
  659. CARBAMAZEPINE [Suspect]
     Active Substance: CARBAMAZEPINE
     Dosage: 400 MG, Q12H
     Route: 065
  660. CARBAMAZEPINE [Suspect]
     Active Substance: CARBAMAZEPINE
     Dosage: 400 MG, Q12H
     Route: 065
  661. CARBAMAZEPINE [Suspect]
     Active Substance: CARBAMAZEPINE
     Dosage: 400 MG, BID
     Route: 065
  662. CARBAMAZEPINE [Suspect]
     Active Substance: CARBAMAZEPINE
     Dosage: 400 MG, BID
     Route: 065
  663. CARBAMAZEPINE [Suspect]
     Active Substance: CARBAMAZEPINE
     Dosage: 400 MG, BID
     Route: 065
  664. CARBAMAZEPINE [Suspect]
     Active Substance: CARBAMAZEPINE
     Dosage: 400.0 MG, BID
     Route: 065
  665. CARBAMAZEPINE [Suspect]
     Active Substance: CARBAMAZEPINE
     Route: 065
  666. CARBAMAZEPINE [Suspect]
     Active Substance: CARBAMAZEPINE
     Dosage: 500 MG, QD
     Route: 065
  667. CARBAMAZEPINE [Suspect]
     Active Substance: CARBAMAZEPINE
     Dosage: 800 MG, Q12H
     Route: 065
  668. CARBAMAZEPINE [Suspect]
     Active Substance: CARBAMAZEPINE
     Route: 065
  669. CARBAMAZEPINE [Suspect]
     Active Substance: CARBAMAZEPINE
     Route: 065
  670. CARBAMAZEPINE [Suspect]
     Active Substance: CARBAMAZEPINE
     Route: 065
  671. CRANBERRY [Suspect]
     Active Substance: CRANBERRY
     Indication: Product used for unknown indication
     Dosage: 500.0 MG, QD
     Route: 065
  672. CRANBERRY [Suspect]
     Active Substance: CRANBERRY
     Indication: Bladder disorder
     Dosage: 500 MG, TID
     Route: 065
  673. CRANBERRY [Suspect]
     Active Substance: CRANBERRY
     Indication: Fibromyalgia
     Route: 065
  674. CRANBERRY [Suspect]
     Active Substance: CRANBERRY
     Indication: Bladder disorder
     Dosage: 500 MG, Q8H
     Route: 065
  675. CRANBERRY [Suspect]
     Active Substance: CRANBERRY
     Indication: Product used for unknown indication
     Dosage: 500 MG, Q8H
     Route: 065
  676. CRANBERRY [Suspect]
     Active Substance: CRANBERRY
     Indication: Fibromyalgia
  677. CYCLOBENZAPRINE [Suspect]
     Active Substance: CYCLOBENZAPRINE
     Dosage: 1.87 MG, QD
     Route: 065
  678. CYCLOBENZAPRINE [Suspect]
     Active Substance: CYCLOBENZAPRINE
     Dosage: 1.87 MG, QD
     Route: 065
  679. CYCLOBENZAPRINE [Suspect]
     Active Substance: CYCLOBENZAPRINE
     Dosage: 1.87 MG, QD
     Route: 065
  680. CYCLOBENZAPRINE [Suspect]
     Active Substance: CYCLOBENZAPRINE
     Dosage: 1.87 MG, QD
     Route: 065
  681. CYCLOBENZAPRINE [Suspect]
     Active Substance: CYCLOBENZAPRINE
     Dosage: 10 MG, QD
     Route: 065
  682. CYCLOBENZAPRINE [Suspect]
     Active Substance: CYCLOBENZAPRINE
     Dosage: 10 MG, QD
     Route: 065
  683. CYCLOBENZAPRINE [Suspect]
     Active Substance: CYCLOBENZAPRINE
     Dosage: 10 MG, QD
     Route: 065
  684. CYCLOBENZAPRINE [Suspect]
     Active Substance: CYCLOBENZAPRINE
     Dosage: 10 MG, QD
     Route: 065
  685. CYCLOBENZAPRINE [Suspect]
     Active Substance: CYCLOBENZAPRINE
     Dosage: 10 MG, QD
     Route: 065
  686. CYCLOBENZAPRINE [Suspect]
     Active Substance: CYCLOBENZAPRINE
     Indication: Fibromyalgia
     Dosage: 100 MG, Q12H
     Route: 065
  687. CYCLOBENZAPRINE [Suspect]
     Active Substance: CYCLOBENZAPRINE
     Indication: Pain
     Dosage: 100 MG, Q12H
     Route: 065
  688. CYCLOBENZAPRINE [Suspect]
     Active Substance: CYCLOBENZAPRINE
     Indication: Product used for unknown indication
     Dosage: 100 MG, Q12H
     Route: 065
  689. CYCLOBENZAPRINE [Suspect]
     Active Substance: CYCLOBENZAPRINE
     Dosage: 100 MG, Q12H
     Route: 065
  690. CYCLOBENZAPRINE [Suspect]
     Active Substance: CYCLOBENZAPRINE
     Dosage: 100 MG, Q12H
     Route: 065
  691. CYCLOBENZAPRINE [Suspect]
     Active Substance: CYCLOBENZAPRINE
     Dosage: 100.0 MG, Q12H
     Route: 065
  692. CYCLOBENZAPRINE [Suspect]
     Active Substance: CYCLOBENZAPRINE
     Dosage: 100.0 MG, Q12H
     Route: 065
  693. CYCLOBENZAPRINE [Suspect]
     Active Substance: CYCLOBENZAPRINE
     Indication: Seizure prophylaxis
     Dosage: 15 MG, Q8H
     Route: 065
  694. CYCLOBENZAPRINE [Suspect]
     Active Substance: CYCLOBENZAPRINE
     Dosage: 15 MG, Q8H
     Route: 065
  695. CYCLOBENZAPRINE [Suspect]
     Active Substance: CYCLOBENZAPRINE
     Dosage: 15 MG, Q8H
     Route: 065
  696. CYCLOBENZAPRINE [Suspect]
     Active Substance: CYCLOBENZAPRINE
     Dosage: 15 MG, Q8H
     Route: 065
  697. CYCLOBENZAPRINE [Suspect]
     Active Substance: CYCLOBENZAPRINE
     Dosage: 2 MG, QD
     Route: 065
  698. CYCLOBENZAPRINE [Suspect]
     Active Substance: CYCLOBENZAPRINE
     Dosage: 2 MG, QD
     Route: 065
  699. CYCLOBENZAPRINE [Suspect]
     Active Substance: CYCLOBENZAPRINE
     Dosage: 2 MG, QD
     Route: 065
  700. CYCLOBENZAPRINE [Suspect]
     Active Substance: CYCLOBENZAPRINE
     Dosage: 2 MG, QD
     Route: 065
  701. CYCLOBENZAPRINE [Suspect]
     Active Substance: CYCLOBENZAPRINE
     Dosage: 2 MG, QD
     Route: 065
  702. CYCLOBENZAPRINE [Suspect]
     Active Substance: CYCLOBENZAPRINE
     Dosage: 200 MG, Q12H
     Route: 065
  703. CYCLOBENZAPRINE [Suspect]
     Active Substance: CYCLOBENZAPRINE
     Dosage: 200 MG, Q12H
     Route: 065
  704. CYCLOBENZAPRINE [Suspect]
     Active Substance: CYCLOBENZAPRINE
     Dosage: 200 MG, Q12H
     Route: 065
  705. CYCLOBENZAPRINE [Suspect]
     Active Substance: CYCLOBENZAPRINE
     Dosage: 45 MG, QD
     Route: 065
  706. CYCLOBENZAPRINE [Suspect]
     Active Substance: CYCLOBENZAPRINE
     Dosage: 45 MG, QD
     Route: 065
  707. CYCLOBENZAPRINE [Suspect]
     Active Substance: CYCLOBENZAPRINE
     Dosage: 45 MG, QD
     Route: 065
  708. CYCLOBENZAPRINE [Suspect]
     Active Substance: CYCLOBENZAPRINE
     Dosage: 45 MG, QD
     Route: 065
  709. CYCLOBENZAPRINE [Suspect]
     Active Substance: CYCLOBENZAPRINE
     Dosage: 45.0 MG, QD
     Route: 065
  710. CYCLOBENZAPRINE [Suspect]
     Active Substance: CYCLOBENZAPRINE
     Dosage: 5 MG, Q8H
     Route: 065
  711. CYCLOBENZAPRINE [Suspect]
     Active Substance: CYCLOBENZAPRINE
     Dosage: 5 MG, Q8H
     Route: 065
  712. CYCLOBENZAPRINE [Suspect]
     Active Substance: CYCLOBENZAPRINE
     Dosage: 5.0 MG, Q8H
     Route: 065
  713. CYCLOBENZAPRINE [Suspect]
     Active Substance: CYCLOBENZAPRINE
     Dosage: 5.0 MG, Q8H
     Route: 065
  714. CYCLOBENZAPRINE [Suspect]
     Active Substance: CYCLOBENZAPRINE
     Dosage: 5.0 MG, Q8H
     Route: 065
  715. CYCLOBENZAPRINE [Suspect]
     Active Substance: CYCLOBENZAPRINE
     Dosage: 5 MG, BID
     Route: 065
  716. CYCLOBENZAPRINE [Suspect]
     Active Substance: CYCLOBENZAPRINE
     Dosage: 5 MG, BID
     Route: 065
  717. CYCLOBENZAPRINE [Suspect]
     Active Substance: CYCLOBENZAPRINE
     Dosage: 5 MG, BID
     Route: 065
  718. CYCLOBENZAPRINE [Suspect]
     Active Substance: CYCLOBENZAPRINE
     Dosage: 5 MG, BID
     Route: 065
  719. CYCLOBENZAPRINE [Suspect]
     Active Substance: CYCLOBENZAPRINE
     Dosage: 5 MG, BID
     Route: 065
  720. CYCLOBENZAPRINE [Suspect]
     Active Substance: CYCLOBENZAPRINE
     Indication: Seizure
     Dosage: UNK
     Route: 048
  721. CYCLOBENZAPRINE [Suspect]
     Active Substance: CYCLOBENZAPRINE
     Route: 065
  722. CYCLOBENZAPRINE [Suspect]
     Active Substance: CYCLOBENZAPRINE
     Route: 065
  723. CYCLOBENZAPRINE [Suspect]
     Active Substance: CYCLOBENZAPRINE
     Route: 065
  724. CYCLOBENZAPRINE [Suspect]
     Active Substance: CYCLOBENZAPRINE
     Route: 065
  725. CYCLOBENZAPRINE [Suspect]
     Active Substance: CYCLOBENZAPRINE
     Route: 065
  726. CYCLOBENZAPRINE [Suspect]
     Active Substance: CYCLOBENZAPRINE
     Route: 065
  727. CYCLOBENZAPRINE HYDROCHLORIDE [Suspect]
     Active Substance: CYCLOBENZAPRINE HYDROCHLORIDE
     Indication: Pain
     Dosage: 5 MG, Q12H
     Route: 065
  728. CYCLOBENZAPRINE HYDROCHLORIDE [Suspect]
     Active Substance: CYCLOBENZAPRINE HYDROCHLORIDE
     Indication: Product used for unknown indication
     Dosage: 5 MG, Q12H
     Route: 065
  729. CYCLOBENZAPRINE HYDROCHLORIDE [Suspect]
     Active Substance: CYCLOBENZAPRINE HYDROCHLORIDE
     Route: 065
  730. CYCLOBENZAPRINE HYDROCHLORIDE [Suspect]
     Active Substance: CYCLOBENZAPRINE HYDROCHLORIDE
     Route: 065
  731. CYCLOBENZAPRINE HYDROCHLORIDE [Suspect]
     Active Substance: CYCLOBENZAPRINE HYDROCHLORIDE
     Route: 065
  732. CYCLOBENZAPRINE HYDROCHLORIDE [Suspect]
     Active Substance: CYCLOBENZAPRINE HYDROCHLORIDE
     Route: 065
  733. CYCLOBENZAPRINE HYDROCHLORIDE [Suspect]
     Active Substance: CYCLOBENZAPRINE HYDROCHLORIDE
     Indication: Fibromyalgia
     Route: 065
  734. CYCLOBENZAPRINE HYDROCHLORIDE [Suspect]
     Active Substance: CYCLOBENZAPRINE HYDROCHLORIDE
     Route: 065
  735. CYCLOBENZAPRINE HYDROCHLORIDE [Suspect]
     Active Substance: CYCLOBENZAPRINE HYDROCHLORIDE
     Route: 065
  736. CYCLOBENZAPRINE HYDROCHLORIDE [Suspect]
     Active Substance: CYCLOBENZAPRINE HYDROCHLORIDE
     Route: 065
  737. CYCLOBENZAPRINE HYDROCHLORIDE [Suspect]
     Active Substance: CYCLOBENZAPRINE HYDROCHLORIDE
     Route: 065
  738. CYCLOBENZAPRINE HYDROCHLORIDE [Suspect]
     Active Substance: CYCLOBENZAPRINE HYDROCHLORIDE
     Route: 065
  739. CYCLOBENZAPRINE HYDROCHLORIDE [Suspect]
     Active Substance: CYCLOBENZAPRINE HYDROCHLORIDE
     Route: 065
  740. CYCLOBENZAPRINE HYDROCHLORIDE [Suspect]
     Active Substance: CYCLOBENZAPRINE HYDROCHLORIDE
     Route: 065
  741. CYCLOBENZAPRINE HYDROCHLORIDE [Suspect]
     Active Substance: CYCLOBENZAPRINE HYDROCHLORIDE
     Route: 065
  742. CRANBERRY JUICE [Suspect]
     Active Substance: CRANBERRY JUICE
     Indication: Product used for unknown indication
     Route: 065
  743. DIAZEPAM [Suspect]
     Active Substance: DIAZEPAM
     Indication: Angina pectoris
     Route: 065
  744. DIAZEPAM [Suspect]
     Active Substance: DIAZEPAM
     Indication: Coronary artery disease
     Route: 065
  745. DIAZEPAM [Suspect]
     Active Substance: DIAZEPAM
     Indication: Insomnia
     Route: 065
  746. DIAZEPAM [Suspect]
     Active Substance: DIAZEPAM
     Indication: Hypertension
  747. DILTIAZEM [Suspect]
     Active Substance: DILTIAZEM
     Route: 065
  748. DILTIAZEM [Suspect]
     Active Substance: DILTIAZEM
     Dosage: 36 MG, QD
     Route: 065
  749. DILTIAZEM [Suspect]
     Active Substance: DILTIAZEM
     Indication: Angina pectoris
     Dosage: 360 MG, QD
     Route: 065
  750. DILTIAZEM [Suspect]
     Active Substance: DILTIAZEM
     Dosage: 360 MG, QD
     Route: 065
  751. DILTIAZEM [Suspect]
     Active Substance: DILTIAZEM
     Indication: Hypertension
     Dosage: 360.0 MILLIGRAM, QD
     Route: 065
  752. DILTIAZEM [Suspect]
     Active Substance: DILTIAZEM
     Indication: Chest pain
     Dosage: 360.0 MILLIGRAM, DAILY
     Route: 065
  753. DILTIAZEM [Suspect]
     Active Substance: DILTIAZEM
     Indication: Coronary artery disease
     Dosage: 360.0 MG, QD
     Route: 065
  754. DILTIAZEM [Suspect]
     Active Substance: DILTIAZEM
     Indication: Angina unstable
     Route: 065
  755. DILTIAZEM [Suspect]
     Active Substance: DILTIAZEM
     Route: 065
  756. DILTIAZEM [Suspect]
     Active Substance: DILTIAZEM
     Indication: Product used for unknown indication
     Route: 065
  757. DILTIAZEM [Suspect]
     Active Substance: DILTIAZEM
     Route: 065
  758. DILTIAZEM [Suspect]
     Active Substance: DILTIAZEM
     Route: 065
  759. DILTIAZEM [Suspect]
     Active Substance: DILTIAZEM
     Route: 065
  760. DILTIAZEM [Suspect]
     Active Substance: DILTIAZEM
     Dosage: 75 MG, QD
     Route: 065
  761. DILTIAZEM [Suspect]
     Active Substance: DILTIAZEM
     Route: 065
  762. DILTIAZEM [Suspect]
     Active Substance: DILTIAZEM
     Route: 065
  763. DILTIAZEM [Suspect]
     Active Substance: DILTIAZEM
     Indication: Angina pectoris
     Route: 065
  764. DILTIAZEM [Suspect]
     Active Substance: DILTIAZEM
     Route: 065
  765. DILTIAZEM [Suspect]
     Active Substance: DILTIAZEM
     Route: 065
  766. DILTIAZEM [Suspect]
     Active Substance: DILTIAZEM
     Route: 065
  767. DILTIAZEM [Suspect]
     Active Substance: DILTIAZEM
     Indication: Coronary artery disease
     Route: 065
  768. DILTIAZEM [Suspect]
     Active Substance: DILTIAZEM
     Route: 065
  769. DILTIAZEM [Suspect]
     Active Substance: DILTIAZEM
     Route: 065
  770. DILTIAZEM [Suspect]
     Active Substance: DILTIAZEM
     Indication: Chest pain
     Route: 065
  771. DILTIAZEM [Suspect]
     Active Substance: DILTIAZEM
     Indication: Hypertension
     Route: 065
  772. DILTIAZEM [Suspect]
     Active Substance: DILTIAZEM
     Indication: Product used for unknown indication
     Route: 065
  773. DILTIAZEM [Suspect]
     Active Substance: DILTIAZEM
     Route: 065
  774. DILTIAZEM [Suspect]
     Active Substance: DILTIAZEM
     Route: 065
  775. DILTIAZEM HYDROCHLORIDE [Suspect]
     Active Substance: DILTIAZEM HYDROCHLORIDE
     Indication: Coronary artery disease
     Dosage: 15 MG, QD
     Route: 042
  776. DILTIAZEM HYDROCHLORIDE [Suspect]
     Active Substance: DILTIAZEM HYDROCHLORIDE
     Dosage: 15 MG, QD
     Route: 065
  777. DILTIAZEM HYDROCHLORIDE [Suspect]
     Active Substance: DILTIAZEM HYDROCHLORIDE
     Dosage: 15 MG, QD
     Route: 065
  778. DILTIAZEM HYDROCHLORIDE [Suspect]
     Active Substance: DILTIAZEM HYDROCHLORIDE
     Dosage: 15 MG, QD
     Route: 065
  779. DILTIAZEM HYDROCHLORIDE [Suspect]
     Active Substance: DILTIAZEM HYDROCHLORIDE
     Dosage: 15 MG, QD
     Route: 065
  780. DILTIAZEM HYDROCHLORIDE [Suspect]
     Active Substance: DILTIAZEM HYDROCHLORIDE
     Dosage: 15 MG, QD
     Route: 065
  781. DILTIAZEM HYDROCHLORIDE [Suspect]
     Active Substance: DILTIAZEM HYDROCHLORIDE
     Dosage: 15 MG, QD
     Route: 065
  782. DILTIAZEM HYDROCHLORIDE [Suspect]
     Active Substance: DILTIAZEM HYDROCHLORIDE
     Indication: Chest pain
     Dosage: 26 MG, QD LIQUID INTRAVENOUS
     Route: 042
  783. DILTIAZEM HYDROCHLORIDE [Suspect]
     Active Substance: DILTIAZEM HYDROCHLORIDE
     Dosage: 300 MG, QD
     Route: 065
  784. DILTIAZEM HYDROCHLORIDE [Suspect]
     Active Substance: DILTIAZEM HYDROCHLORIDE
     Dosage: 36 MG, QD
     Route: 065
  785. DILTIAZEM HYDROCHLORIDE [Suspect]
     Active Substance: DILTIAZEM HYDROCHLORIDE
     Dosage: 36 MG, QD
     Route: 065
  786. DILTIAZEM HYDROCHLORIDE [Suspect]
     Active Substance: DILTIAZEM HYDROCHLORIDE
     Dosage: 36 MG, QD
     Route: 065
  787. DILTIAZEM HYDROCHLORIDE [Suspect]
     Active Substance: DILTIAZEM HYDROCHLORIDE
     Dosage: 36 MG, QD
     Route: 065
  788. DILTIAZEM HYDROCHLORIDE [Suspect]
     Active Substance: DILTIAZEM HYDROCHLORIDE
     Dosage: 36 MG, QD
     Route: 065
  789. DILTIAZEM HYDROCHLORIDE [Suspect]
     Active Substance: DILTIAZEM HYDROCHLORIDE
     Indication: Hypertension
     Dosage: 36.0 MG, QD
     Route: 065
  790. DILTIAZEM HYDROCHLORIDE [Suspect]
     Active Substance: DILTIAZEM HYDROCHLORIDE
     Indication: Angina pectoris
     Dosage: 360 MG, QD
     Route: 042
  791. DILTIAZEM HYDROCHLORIDE [Suspect]
     Active Substance: DILTIAZEM HYDROCHLORIDE
     Dosage: 360.0 MG, QD
     Route: 042
  792. DILTIAZEM HYDROCHLORIDE [Suspect]
     Active Substance: DILTIAZEM HYDROCHLORIDE
     Indication: Product used for unknown indication
     Dosage: 360.0 MG, QD
     Route: 065
  793. DILTIAZEM HYDROCHLORIDE [Suspect]
     Active Substance: DILTIAZEM HYDROCHLORIDE
     Indication: Product used for unknown indication
     Dosage: 360.0 MG, QD
     Route: 065
  794. DILTIAZEM HYDROCHLORIDE [Suspect]
     Active Substance: DILTIAZEM HYDROCHLORIDE
     Dosage: 360.0 MG, QD
     Route: 065
  795. DILTIAZEM HYDROCHLORIDE [Suspect]
     Active Substance: DILTIAZEM HYDROCHLORIDE
     Dosage: 360.0 MG, QD
     Route: 065
  796. DILTIAZEM HYDROCHLORIDE [Suspect]
     Active Substance: DILTIAZEM HYDROCHLORIDE
     Dosage: 360.0 MG, QD
     Route: 065
  797. DILTIAZEM HYDROCHLORIDE [Suspect]
     Active Substance: DILTIAZEM HYDROCHLORIDE
     Dosage: 360.0 MG, QD
     Route: 065
  798. DILTIAZEM HYDROCHLORIDE [Suspect]
     Active Substance: DILTIAZEM HYDROCHLORIDE
     Dosage: 360.0 MG, QD
     Route: 065
  799. DILTIAZEM HYDROCHLORIDE [Suspect]
     Active Substance: DILTIAZEM HYDROCHLORIDE
     Dosage: 360.0 MG, QD
     Route: 065
  800. DILTIAZEM HYDROCHLORIDE [Suspect]
     Active Substance: DILTIAZEM HYDROCHLORIDE
     Dosage: 360.0 MG, QD
     Route: 065
  801. DILTIAZEM HYDROCHLORIDE [Suspect]
     Active Substance: DILTIAZEM HYDROCHLORIDE
     Dosage: 360.0 MG, QD
     Route: 065
  802. DILTIAZEM HYDROCHLORIDE [Suspect]
     Active Substance: DILTIAZEM HYDROCHLORIDE
     Dosage: 360.0 MG, QD
     Route: 065
  803. DILTIAZEM HYDROCHLORIDE [Suspect]
     Active Substance: DILTIAZEM HYDROCHLORIDE
     Dosage: 360.0 MG, QD
     Route: 065
  804. DILTIAZEM HYDROCHLORIDE [Suspect]
     Active Substance: DILTIAZEM HYDROCHLORIDE
     Dosage: 360.0 MG, QD
     Route: 065
  805. DILTIAZEM HYDROCHLORIDE [Suspect]
     Active Substance: DILTIAZEM HYDROCHLORIDE
     Dosage: 360.0 MG, QD
     Route: 065
  806. DILTIAZEM HYDROCHLORIDE [Suspect]
     Active Substance: DILTIAZEM HYDROCHLORIDE
     Dosage: 360.0 MG, QD
     Route: 065
  807. DILTIAZEM HYDROCHLORIDE [Suspect]
     Active Substance: DILTIAZEM HYDROCHLORIDE
     Dosage: 40 MG, QD
     Route: 065
  808. DILTIAZEM HYDROCHLORIDE [Suspect]
     Active Substance: DILTIAZEM HYDROCHLORIDE
     Dosage: 40 MG, QD
     Route: 065
  809. DILTIAZEM HYDROCHLORIDE [Suspect]
     Active Substance: DILTIAZEM HYDROCHLORIDE
     Dosage: 40 MG, QD
     Route: 065
  810. DILTIAZEM HYDROCHLORIDE [Suspect]
     Active Substance: DILTIAZEM HYDROCHLORIDE
     Dosage: 40 MG, QD
     Route: 065
  811. DILTIAZEM HYDROCHLORIDE [Suspect]
     Active Substance: DILTIAZEM HYDROCHLORIDE
     Dosage: 40 MG, QD
     Route: 065
  812. DILTIAZEM HYDROCHLORIDE [Suspect]
     Active Substance: DILTIAZEM HYDROCHLORIDE
     Dosage: 500 MG, QD
     Route: 065
  813. DILTIAZEM HYDROCHLORIDE [Suspect]
     Active Substance: DILTIAZEM HYDROCHLORIDE
     Indication: Hypertension
     Route: 065
  814. DILTIAZEM HYDROCHLORIDE [Suspect]
     Active Substance: DILTIAZEM HYDROCHLORIDE
     Route: 065
  815. DILTIAZEM HYDROCHLORIDE [Suspect]
     Active Substance: DILTIAZEM HYDROCHLORIDE
     Route: 042
  816. DILTIAZEM HYDROCHLORIDE [Suspect]
     Active Substance: DILTIAZEM HYDROCHLORIDE
     Indication: Angina pectoris
     Route: 065
  817. DILTIAZEM HYDROCHLORIDE [Suspect]
     Active Substance: DILTIAZEM HYDROCHLORIDE
     Route: 065
  818. DILTIAZEM HYDROCHLORIDE [Suspect]
     Active Substance: DILTIAZEM HYDROCHLORIDE
     Indication: Chest pain
     Route: 065
  819. DILTIAZEM HYDROCHLORIDE [Suspect]
     Active Substance: DILTIAZEM HYDROCHLORIDE
     Indication: Coronary artery disease
     Route: 065
  820. DILTIAZEM HYDROCHLORIDE [Suspect]
     Active Substance: DILTIAZEM HYDROCHLORIDE
     Route: 065
  821. DILTIAZEM HYDROCHLORIDE [Suspect]
     Active Substance: DILTIAZEM HYDROCHLORIDE
     Route: 065
  822. DILTIAZEM HYDROCHLORIDE [Suspect]
     Active Substance: DILTIAZEM HYDROCHLORIDE
     Route: 065
  823. DILTIAZEM HYDROCHLORIDE [Suspect]
     Active Substance: DILTIAZEM HYDROCHLORIDE
     Route: 065
  824. DILTIAZEM HYDROCHLORIDE [Suspect]
     Active Substance: DILTIAZEM HYDROCHLORIDE
     Route: 065
  825. DILTIAZEM HYDROCHLORIDE [Suspect]
     Active Substance: DILTIAZEM HYDROCHLORIDE
     Route: 065
  826. DILTIAZEM HYDROCHLORIDE [Suspect]
     Active Substance: DILTIAZEM HYDROCHLORIDE
     Route: 065
  827. DILTIAZEM HYDROCHLORIDE [Suspect]
     Active Substance: DILTIAZEM HYDROCHLORIDE
     Route: 065
  828. DILTIAZEM HYDROCHLORIDE [Suspect]
     Active Substance: DILTIAZEM HYDROCHLORIDE
     Route: 065
  829. DILTIAZEM HYDROCHLORIDE [Suspect]
     Active Substance: DILTIAZEM HYDROCHLORIDE
     Route: 065
  830. DILTIAZEM HYDROCHLORIDE [Suspect]
     Active Substance: DILTIAZEM HYDROCHLORIDE
     Route: 065
  831. DILTIAZEM HYDROCHLORIDE [Suspect]
     Active Substance: DILTIAZEM HYDROCHLORIDE
     Route: 065
  832. DILTIAZEM HYDROCHLORIDE [Suspect]
     Active Substance: DILTIAZEM HYDROCHLORIDE
     Route: 065
  833. DIPYRIDAMOLE [Suspect]
     Active Substance: DIPYRIDAMOLE
     Dosage: 0.5 DOSAGE FORM, Q48H
     Route: 065
  834. DIPYRIDAMOLE [Suspect]
     Active Substance: DIPYRIDAMOLE
     Route: 065
  835. DIPYRIDAMOLE [Suspect]
     Active Substance: DIPYRIDAMOLE
     Dosage: 1 DOSAGE FORM, BID
     Route: 065
  836. DIPYRIDAMOLE [Suspect]
     Active Substance: DIPYRIDAMOLE
     Route: 065
  837. DIPYRIDAMOLE [Suspect]
     Active Substance: DIPYRIDAMOLE
     Route: 065
  838. DIPYRIDAMOLE [Suspect]
     Active Substance: DIPYRIDAMOLE
     Indication: Cerebrovascular accident
     Dosage: 2 DF, QD
     Route: 065
  839. DIPYRIDAMOLE [Suspect]
     Active Substance: DIPYRIDAMOLE
     Dosage: 2 DF, QD
     Route: 065
  840. DIPYRIDAMOLE [Suspect]
     Active Substance: DIPYRIDAMOLE
     Dosage: 2 DF, QD
     Route: 065
  841. DIPYRIDAMOLE [Suspect]
     Active Substance: DIPYRIDAMOLE
     Dosage: 2 DOSAGE FORM, QD
     Route: 065
  842. DIPYRIDAMOLE [Suspect]
     Active Substance: DIPYRIDAMOLE
     Dosage: 2 DF, BID
     Route: 065
  843. DIPYRIDAMOLE [Suspect]
     Active Substance: DIPYRIDAMOLE
     Dosage: 5 MG, Q12H
     Route: 065
  844. DIPYRIDAMOLE [Suspect]
     Active Substance: DIPYRIDAMOLE
     Dosage: 200 MG, BID
     Route: 065
  845. DIPYRIDAMOLE [Suspect]
     Active Substance: DIPYRIDAMOLE
     Dosage: 200 MG, BID
     Route: 065
  846. DIPYRIDAMOLE [Suspect]
     Active Substance: DIPYRIDAMOLE
     Dosage: UNK
     Route: 065
  847. DIPYRIDAMOLE [Suspect]
     Active Substance: DIPYRIDAMOLE
     Dosage: UNK, Q12H
     Route: 065
  848. DIPYRIDAMOLE [Suspect]
     Active Substance: DIPYRIDAMOLE
     Route: 065
  849. DIPYRIDAMOLE [Suspect]
     Active Substance: DIPYRIDAMOLE
     Indication: Product used for unknown indication
     Route: 048
  850. DIPYRIDAMOLE [Suspect]
     Active Substance: DIPYRIDAMOLE
     Route: 065
  851. DIPYRIDAMOLE [Suspect]
     Active Substance: DIPYRIDAMOLE
     Route: 065
  852. DOCUSATE SODIUM [Suspect]
     Active Substance: DOCUSATE SODIUM
     Indication: Constipation
     Route: 065
  853. DOCUSATE SODIUM\PHENOLPHTHALEIN [Suspect]
     Active Substance: DOCUSATE SODIUM\PHENOLPHTHALEIN
     Indication: Pain
     Route: 065
  854. DROTAVERINE [Suspect]
     Active Substance: DROTAVERINE
     Indication: Product used for unknown indication
     Route: 065
  855. DULCOLAX (BISACODYL) [Suspect]
     Active Substance: BISACODYL
     Dosage: 1 DF, QD
     Route: 065
  856. DULCOLAX (BISACODYL) [Suspect]
     Active Substance: BISACODYL
     Dosage: 2 DF, QD
     Route: 065
  857. DULCOLAX (BISACODYL) [Suspect]
     Active Substance: BISACODYL
     Indication: Constipation
     Route: 065
  858. DULCOLAX (BISACODYL) [Suspect]
     Active Substance: BISACODYL
     Indication: Product used for unknown indication
     Dosage: UNK, QD
     Route: 048
  859. DULCOLAX (BISACODYL) [Suspect]
     Active Substance: BISACODYL
     Route: 065
  860. ERGOCALCIFEROL [Suspect]
     Active Substance: ERGOCALCIFEROL
     Indication: Product used for unknown indication
     Route: 065
  861. PHENOLPHTHALEIN [Suspect]
     Active Substance: PHENOLPHTHALEIN
     Indication: Pain
     Route: 065
  862. PHENOLPHTHALEIN [Suspect]
     Active Substance: PHENOLPHTHALEIN
     Route: 065
  863. FRUCTOSE\GLYCERIN\SODIUM CHLORIDE [Suspect]
     Active Substance: FRUCTOSE\GLYCERIN\SODIUM CHLORIDE
     Route: 065
  864. FRUCTOSE\GLYCERIN\SODIUM CHLORIDE [Suspect]
     Active Substance: FRUCTOSE\GLYCERIN\SODIUM CHLORIDE
     Indication: Product used for unknown indication
     Route: 065
  865. FUROSEMIDE [Suspect]
     Active Substance: FUROSEMIDE
     Dosage: 10 MG, QD
     Route: 065
  866. FUROSEMIDE [Suspect]
     Active Substance: FUROSEMIDE
     Indication: Chest pain
     Dosage: 4 MG, QD
     Route: 065
  867. FUROSEMIDE [Suspect]
     Active Substance: FUROSEMIDE
     Dosage: 4 MG, QD
     Route: 065
  868. FUROSEMIDE [Suspect]
     Active Substance: FUROSEMIDE
     Dosage: 4.0 MILLIGRAM, QD
     Route: 065
  869. FUROSEMIDE [Suspect]
     Active Substance: FUROSEMIDE
     Dosage: 4.0 MG, QD
     Route: 065
  870. FUROSEMIDE [Suspect]
     Active Substance: FUROSEMIDE
     Route: 065
  871. FUROSEMIDE [Suspect]
     Active Substance: FUROSEMIDE
     Route: 065
  872. FUROSEMIDE [Suspect]
     Active Substance: FUROSEMIDE
     Indication: Angina pectoris
     Dosage: 40 MG, QD
     Route: 065
  873. FUROSEMIDE [Suspect]
     Active Substance: FUROSEMIDE
     Indication: Coronary artery disease
     Dosage: 40 MG, QD
     Route: 065
  874. FUROSEMIDE [Suspect]
     Active Substance: FUROSEMIDE
     Indication: Product used for unknown indication
     Dosage: 40 MG, QD
     Route: 065
  875. FUROSEMIDE [Suspect]
     Active Substance: FUROSEMIDE
     Dosage: 40 MG, QD
     Route: 065
  876. FUROSEMIDE [Suspect]
     Active Substance: FUROSEMIDE
     Dosage: 40 MG, QD
     Route: 065
  877. FUROSEMIDE [Suspect]
     Active Substance: FUROSEMIDE
     Dosage: 40 MG, QD
     Route: 065
  878. FUROSEMIDE [Suspect]
     Active Substance: FUROSEMIDE
     Dosage: 40 MG, QD
     Route: 065
  879. FUROSEMIDE [Suspect]
     Active Substance: FUROSEMIDE
     Indication: Oedema
     Dosage: 40.0 MG, QD
     Route: 065
  880. FUROSEMIDE [Suspect]
     Active Substance: FUROSEMIDE
     Route: 065
  881. FUROSEMIDE [Suspect]
     Active Substance: FUROSEMIDE
     Route: 065
  882. FUROSEMIDE [Suspect]
     Active Substance: FUROSEMIDE
     Route: 065
  883. GALANTAMINE [Suspect]
     Active Substance: GALANTAMINE
     Dosage: 16 MG, QD
     Route: 065
  884. GALANTAMINE [Suspect]
     Active Substance: GALANTAMINE
     Dosage: 16 MG, QD
     Route: 065
  885. GALANTAMINE [Suspect]
     Active Substance: GALANTAMINE
     Indication: Product used for unknown indication
     Route: 065
  886. GALANTAMINE [Suspect]
     Active Substance: GALANTAMINE
     Indication: Dementia
     Route: 065
  887. GALANTAMINE HYDROBROMIDE [Suspect]
     Active Substance: GALANTAMINE HYDROBROMIDE
     Indication: Product used for unknown indication
     Dosage: 16 MG, QD
     Route: 065
  888. GALANTAMINE HYDROBROMIDE [Suspect]
     Active Substance: GALANTAMINE HYDROBROMIDE
     Dosage: 16 MG, QD
     Route: 065
  889. GALANTAMINE HYDROBROMIDE [Suspect]
     Active Substance: GALANTAMINE HYDROBROMIDE
     Indication: Dementia
     Route: 065
  890. GALANTAMINE HYDROBROMIDE [Suspect]
     Active Substance: GALANTAMINE HYDROBROMIDE
     Route: 065
  891. GALANTAMINE HYDROBROMIDE [Suspect]
     Active Substance: GALANTAMINE HYDROBROMIDE
     Route: 065
  892. GLUCOSAMINE [Suspect]
     Active Substance: GLUCOSAMINE
     Dosage: 1000 MG, QD
     Route: 065
  893. GLUCOSAMINE [Suspect]
     Active Substance: GLUCOSAMINE
     Dosage: 1000 MG, Q12H
     Route: 065
  894. GLUCOSAMINE [Suspect]
     Active Substance: GLUCOSAMINE
     Dosage: 1000 MG, Q12H
     Route: 065
  895. GLUCOSAMINE [Suspect]
     Active Substance: GLUCOSAMINE
     Indication: Product used for unknown indication
     Route: 065
  896. GLUCOSAMINE [Suspect]
     Active Substance: GLUCOSAMINE
     Dosage: 250 MG, BID
     Route: 065
  897. GLUCOSAMINE [Suspect]
     Active Substance: GLUCOSAMINE
     Route: 065
  898. GLUCOSAMINE [Suspect]
     Active Substance: GLUCOSAMINE
     Dosage: 2500.0 MG, QD
     Route: 065
  899. GLUCOSAMINE [Suspect]
     Active Substance: GLUCOSAMINE
     Route: 065
  900. GLUCOSAMINE [Suspect]
     Active Substance: GLUCOSAMINE
     Route: 065
  901. GLUCOSAMINE [Suspect]
     Active Substance: GLUCOSAMINE
     Dosage: 500 MG, QD
     Route: 065
  902. GLUCOSAMINE [Suspect]
     Active Substance: GLUCOSAMINE
     Dosage: 500 MG, Q12H
     Route: 065
  903. GLUCOSAMINE [Suspect]
     Active Substance: GLUCOSAMINE
     Indication: Arthritis
     Dosage: 500 MG, BID
     Route: 065
  904. GLUCOSAMINE [Suspect]
     Active Substance: GLUCOSAMINE
     Route: 065
  905. GLUCOSAMINE [Suspect]
     Active Substance: GLUCOSAMINE
     Route: 065
  906. GLUCOSAMINE [Suspect]
     Active Substance: GLUCOSAMINE
     Route: 065
  907. GLUCOSAMINE [Suspect]
     Active Substance: GLUCOSAMINE
     Indication: Pain
     Route: 065
  908. CHONDROITIN SULFATE (BOVINE)\GLUCOSAMINE SULFATE [Suspect]
     Active Substance: CHONDROITIN SULFATE (BOVINE)\GLUCOSAMINE SULFATE
     Indication: Product used for unknown indication
     Dosage: 2500 MG, QD
     Route: 065
  909. CHONDROITIN SULFATE (BOVINE)\GLUCOSAMINE SULFATE [Suspect]
     Active Substance: CHONDROITIN SULFATE (BOVINE)\GLUCOSAMINE SULFATE
     Route: 065
  910. GLUCOSAMINE HYDROCHLORIDE [Suspect]
     Active Substance: GLUCOSAMINE HYDROCHLORIDE
     Indication: Pain
     Dosage: 250 MG, BID
     Route: 065
  911. GLUCOSAMINE HYDROCHLORIDE [Suspect]
     Active Substance: GLUCOSAMINE HYDROCHLORIDE
     Indication: Arthritis
     Dosage: 500 MG, BID
     Route: 065
  912. GLUCOSAMINE SULFATE [Suspect]
     Active Substance: GLUCOSAMINE SULFATE
     Indication: Product used for unknown indication
     Dosage: 500 MG, QD
     Route: 065
  913. GLUCOSAMINE SULFATE [Suspect]
     Active Substance: GLUCOSAMINE SULFATE
     Dosage: 500 MG, QD
     Route: 065
  914. GLUCOSAMINE SULFATE [Suspect]
     Active Substance: GLUCOSAMINE SULFATE
     Dosage: 500 MG, QD
     Route: 065
  915. GLUCOSAMINE SULFATE [Suspect]
     Active Substance: GLUCOSAMINE SULFATE
     Indication: Arthritis
     Route: 065
  916. GLUCOSAMINE SULFATE [Suspect]
     Active Substance: GLUCOSAMINE SULFATE
     Indication: Pain
     Route: 065
  917. GLUCOSAMINE SULFATE [Suspect]
     Active Substance: GLUCOSAMINE SULFATE
     Route: 065
  918. GLUCOSAMINE SULFATE [Suspect]
     Active Substance: GLUCOSAMINE SULFATE
     Route: 065
  919. GLUCOSAMINE SULFATE [Suspect]
     Active Substance: GLUCOSAMINE SULFATE
     Route: 065
  920. GLUCOSAMINE SULFATE [Suspect]
     Active Substance: GLUCOSAMINE SULFATE
     Route: 065
  921. GLUCOSAMINE SULFATE [Suspect]
     Active Substance: GLUCOSAMINE SULFATE
     Route: 065
  922. GLYCERIN [Suspect]
     Active Substance: GLYCERIN
     Indication: Product used for unknown indication
     Route: 065
  923. GLYCERIN\LECITHIN\SOYBEAN OIL [Suspect]
     Active Substance: GLYCERIN\LECITHIN\SOYBEAN OIL
     Indication: Product used for unknown indication
     Route: 065
  924. NITROGLYCERIN [Suspect]
     Active Substance: NITROGLYCERIN
     Indication: Fibromyalgia
     Dosage: 0.4 MG, QD
     Route: 065
  925. NITROGLYCERIN [Suspect]
     Active Substance: NITROGLYCERIN
     Dosage: 0.4 MG, QD
     Route: 065
  926. NITROGLYCERIN [Suspect]
     Active Substance: NITROGLYCERIN
     Dosage: 0.4 DF, QD
     Route: 065
  927. NITROGLYCERIN [Suspect]
     Active Substance: NITROGLYCERIN
     Dosage: 0.6 MG, QD
     Route: 061
  928. NITROGLYCERIN [Suspect]
     Active Substance: NITROGLYCERIN
     Indication: Chest pain
     Dosage: 0.6 MG, QD
     Route: 065
  929. NITROGLYCERIN [Suspect]
     Active Substance: NITROGLYCERIN
     Indication: Coronary artery disease
     Dosage: 0.6 MG, QD
     Route: 065
  930. NITROGLYCERIN [Suspect]
     Active Substance: NITROGLYCERIN
     Indication: Product used for unknown indication
     Dosage: 0.6 MG, QD
     Route: 065
  931. NITROGLYCERIN [Suspect]
     Active Substance: NITROGLYCERIN
     Dosage: 0.6 MG, QD
     Route: 065
  932. NITROGLYCERIN [Suspect]
     Active Substance: NITROGLYCERIN
     Dosage: 0.6 MG, QD
     Route: 065
  933. NITROGLYCERIN [Suspect]
     Active Substance: NITROGLYCERIN
     Dosage: 0.6 MG, QD
     Route: 065
  934. NITROGLYCERIN [Suspect]
     Active Substance: NITROGLYCERIN
     Dosage: 1.0 DF, QD
     Route: 065
  935. NITROGLYCERIN [Suspect]
     Active Substance: NITROGLYCERIN
     Dosage: 6 MG, QD
     Route: 061
  936. NITROGLYCERIN [Suspect]
     Active Substance: NITROGLYCERIN
     Indication: Angina pectoris
     Route: 065
  937. NITROGLYCERIN [Suspect]
     Active Substance: NITROGLYCERIN
     Indication: Hypertension
     Route: 065
  938. NITROGLYCERIN [Suspect]
     Active Substance: NITROGLYCERIN
     Route: 065
  939. NITROGLYCERIN [Suspect]
     Active Substance: NITROGLYCERIN
     Route: 065
  940. HYDROCHLOROTHIAZIDE\QUINAPRIL HYDROCHLORIDE [Suspect]
     Active Substance: HYDROCHLOROTHIAZIDE\QUINAPRIL HYDROCHLORIDE
     Indication: Hypertension
     Dosage: 20.0 MG, QD
     Route: 065
  941. HYDROCHLOROTHIAZIDE\QUINAPRIL HYDROCHLORIDE [Suspect]
     Active Substance: HYDROCHLOROTHIAZIDE\QUINAPRIL HYDROCHLORIDE
     Indication: Coronary artery disease
     Dosage: 20.0 MG, QD
     Route: 065
  942. HYDROCHLOROTHIAZIDE\QUINAPRIL HYDROCHLORIDE [Suspect]
     Active Substance: HYDROCHLOROTHIAZIDE\QUINAPRIL HYDROCHLORIDE
     Indication: Angina pectoris
     Dosage: 40.0 MG, QD
     Route: 065
  943. HYDROCHLOROTHIAZIDE\QUINAPRIL HYDROCHLORIDE [Suspect]
     Active Substance: HYDROCHLOROTHIAZIDE\QUINAPRIL HYDROCHLORIDE
     Indication: Chest pain
     Dosage: 40.0 MG, QD
     Route: 065
  944. LACTULOSE [Suspect]
     Active Substance: LACTULOSE
     Dosage: 15 MG, QD
     Route: 048
  945. LACTULOSE [Suspect]
     Active Substance: LACTULOSE
     Dosage: 15 MG, QD
     Route: 065
  946. LACTULOSE [Suspect]
     Active Substance: LACTULOSE
     Indication: Product used for unknown indication
     Dosage: 15.0 MG, QD
     Route: 048
  947. LACTULOSE [Suspect]
     Active Substance: LACTULOSE
     Route: 065
  948. LACTULOSE [Suspect]
     Active Substance: LACTULOSE
     Indication: Constipation
     Dosage: 15 ML, QD
     Route: 048
  949. LACTULOSE [Suspect]
     Active Substance: LACTULOSE
     Indication: Radioactive iodine therapy
     Dosage: 15 ML, QD
     Route: 048
  950. LACTULOSE [Suspect]
     Active Substance: LACTULOSE
     Indication: Thyroid disorder
     Dosage: 15.0 ML, QD
     Route: 048
  951. LACTULOSE [Suspect]
     Active Substance: LACTULOSE
     Indication: Constipation
     Route: 048
  952. LACTULOSE [Suspect]
     Active Substance: LACTULOSE
     Indication: Product used for unknown indication
     Route: 048
  953. LACTULOSE [Suspect]
     Active Substance: LACTULOSE
     Indication: Thyroid disorder
     Route: 048
  954. LACTULOSE [Suspect]
     Active Substance: LACTULOSE
     Indication: Radioactive iodine therapy
     Route: 048
  955. LEVOFLOXACIN [Suspect]
     Active Substance: LEVOFLOXACIN
     Indication: Thyroid disorder
     Dosage: 200.0 MG, QD
     Route: 065
  956. LEVOFLOXACIN [Suspect]
     Active Substance: LEVOFLOXACIN
     Dosage: 200.0 MG, QD
     Route: 065
  957. LEVOFLOXACIN [Suspect]
     Active Substance: LEVOFLOXACIN
     Indication: Urinary tract infection
     Dosage: 250 MG, QD
     Route: 065
  958. LEVOFLOXACIN [Suspect]
     Active Substance: LEVOFLOXACIN
     Dosage: 250 MG, QD
     Route: 065
  959. LEVOFLOXACIN [Suspect]
     Active Substance: LEVOFLOXACIN
     Indication: Product used for unknown indication
     Route: 065
  960. LEVOFLOXACIN [Suspect]
     Active Substance: LEVOFLOXACIN
     Indication: Radioactive iodine therapy
     Route: 065
  961. LEVOFLOXACIN HEMIHYDRATE [Suspect]
     Active Substance: LEVOFLOXACIN
     Indication: Thyroid disorder
     Route: 065
  962. LEVOFLOXACIN HEMIHYDRATE [Suspect]
     Active Substance: LEVOFLOXACIN
     Indication: Radioactive iodine therapy
     Dosage: 200 MG, QD
     Route: 065
  963. LEVOFLOXACIN HEMIHYDRATE [Suspect]
     Active Substance: LEVOFLOXACIN
     Dosage: 250 MG, QD
     Route: 065
  964. LEVOFLOXACIN HEMIHYDRATE [Suspect]
     Active Substance: LEVOFLOXACIN
     Indication: Urinary tract infection
     Route: 065
  965. LEVOFLOXACIN HEMIHYDRATE [Suspect]
     Active Substance: LEVOFLOXACIN
     Route: 065
  966. LEVOTHYROXINE [Suspect]
     Active Substance: LEVOTHYROXINE
     Indication: Radioactive iodine therapy
     Dosage: 0.88 MG, QD
     Route: 065
  967. LEVOTHYROXINE [Suspect]
     Active Substance: LEVOTHYROXINE
     Indication: Thyroid disorder
  968. LEVOTHYROXINE SODIUM [Suspect]
     Active Substance: LEVOTHYROXINE SODIUM
     Indication: Constipation
     Dosage: 0.088 MG, QD
     Route: 065
  969. LEVOTHYROXINE SODIUM [Suspect]
     Active Substance: LEVOTHYROXINE SODIUM
     Indication: Product used for unknown indication
     Dosage: 0.088 MG, QD
     Route: 065
  970. LEVOTHYROXINE SODIUM [Suspect]
     Active Substance: LEVOTHYROXINE SODIUM
     Indication: Radioactive iodine therapy
     Dosage: 0.088 MG, QD
     Route: 065
  971. LEVOTHYROXINE SODIUM [Suspect]
     Active Substance: LEVOTHYROXINE SODIUM
     Indication: Thyroid disorder
     Dosage: 0.088 MG, QD
     Route: 065
  972. LEVOTHYROXINE SODIUM [Suspect]
     Active Substance: LEVOTHYROXINE SODIUM
     Dosage: 0.088 MG, QD
     Route: 065
  973. LEVOTHYROXINE SODIUM [Suspect]
     Active Substance: LEVOTHYROXINE SODIUM
     Indication: Urinary tract infection
     Route: 065
  974. LEVOTHYROXINE SODIUM [Suspect]
     Active Substance: LEVOTHYROXINE SODIUM
     Route: 065
  975. LEVOTHYROXINE SODIUM [Suspect]
     Active Substance: LEVOTHYROXINE SODIUM
     Dosage: 0.09 MG, QD
     Route: 065
  976. LEVOTHYROXINE SODIUM [Suspect]
     Active Substance: LEVOTHYROXINE SODIUM
     Dosage: 0.09 MG, QD
     Route: 065
  977. LEVOTHYROXINE SODIUM [Suspect]
     Active Substance: LEVOTHYROXINE SODIUM
     Dosage: 0.09 MG, QD
     Route: 065
  978. LEVOTHYROXINE SODIUM [Suspect]
     Active Substance: LEVOTHYROXINE SODIUM
     Dosage: 0.8 MG, QD
     Route: 065
  979. LEVOTHYROXINE SODIUM [Suspect]
     Active Substance: LEVOTHYROXINE SODIUM
     Dosage: 0.8 MG, QD
     Route: 065
  980. LEVOTHYROXINE SODIUM [Suspect]
     Active Substance: LEVOTHYROXINE SODIUM
     Dosage: 1 DF, QD
     Route: 065
  981. LEVOTHYROXINE SODIUM [Suspect]
     Active Substance: LEVOTHYROXINE SODIUM
     Dosage: 622.0 MG, BID
     Route: 065
  982. LEVOTHYROXINE SODIUM [Suspect]
     Active Substance: LEVOTHYROXINE SODIUM
     Dosage: 88.0 MG, QD
     Route: 065
  983. LEVOTHYROXINE SODIUM [Suspect]
     Active Substance: LEVOTHYROXINE SODIUM
     Dosage: 88.0 MG, QD
     Route: 065
  984. LEVOTHYROXINE SODIUM [Suspect]
     Active Substance: LEVOTHYROXINE SODIUM
     Route: 048
  985. LEVOTHYROXINE SODIUM [Suspect]
     Active Substance: LEVOTHYROXINE SODIUM
     Route: 048
  986. LEVOTHYROXINE SODIUM [Suspect]
     Active Substance: LEVOTHYROXINE SODIUM
     Route: 065
  987. LEVOTHYROXINE SODIUM [Suspect]
     Active Substance: LEVOTHYROXINE SODIUM
     Route: 065
  988. LEVOTHYROXINE SODIUM [Suspect]
     Active Substance: LEVOTHYROXINE SODIUM
     Route: 065
  989. LEVOTHYROXINE SODIUM [Suspect]
     Active Substance: LEVOTHYROXINE SODIUM
     Route: 065
  990. MAGNESIUM CARBONATE [Suspect]
     Active Substance: MAGNESIUM CARBONATE
     Indication: Constipation
     Dosage: 622 MG, Q12H
     Route: 065
  991. MAGNESIUM CARBONATE [Suspect]
     Active Substance: MAGNESIUM CARBONATE
     Route: 065
  992. MAGNESIUM CARBONATE [Suspect]
     Active Substance: MAGNESIUM CARBONATE
     Route: 065
  993. MAGNESIUM HYDROXIDE [Suspect]
     Active Substance: MAGNESIUM HYDROXIDE
     Dosage: 1 DF, QD
     Route: 065
  994. MAGNESIUM HYDROXIDE [Suspect]
     Active Substance: MAGNESIUM HYDROXIDE
     Dosage: 1 DF, BID
     Route: 065
  995. MAGNESIUM HYDROXIDE [Suspect]
     Active Substance: MAGNESIUM HYDROXIDE
     Route: 065
  996. MAGNESIUM HYDROXIDE [Suspect]
     Active Substance: MAGNESIUM HYDROXIDE
     Route: 065
  997. MAGNESIUM HYDROXIDE [Suspect]
     Active Substance: MAGNESIUM HYDROXIDE
     Dosage: 1244 MG, QD
     Route: 065
  998. MAGNESIUM HYDROXIDE [Suspect]
     Active Substance: MAGNESIUM HYDROXIDE
     Dosage: 2 DF, QD
     Route: 065
  999. MAGNESIUM HYDROXIDE [Suspect]
     Active Substance: MAGNESIUM HYDROXIDE
     Dosage: 2 DF, QD
     Route: 065
  1000. MAGNESIUM HYDROXIDE [Suspect]
     Active Substance: MAGNESIUM HYDROXIDE
     Route: 065
  1001. MAGNESIUM HYDROXIDE [Suspect]
     Active Substance: MAGNESIUM HYDROXIDE
     Dosage: 311 MG, BID
     Route: 065
  1002. MAGNESIUM HYDROXIDE [Suspect]
     Active Substance: MAGNESIUM HYDROXIDE
     Route: 065
  1003. MAGNESIUM HYDROXIDE [Suspect]
     Active Substance: MAGNESIUM HYDROXIDE
     Indication: Product used for unknown indication
     Dosage: 622 MG, QD
     Route: 065
  1004. MAGNESIUM HYDROXIDE [Suspect]
     Active Substance: MAGNESIUM HYDROXIDE
     Dosage: 622.0 MG, QD
     Route: 065
  1005. MAGNESIUM HYDROXIDE [Suspect]
     Active Substance: MAGNESIUM HYDROXIDE
     Indication: Constipation
     Dosage: 622 MG, Q12H
     Route: 065
  1006. MAGNESIUM HYDROXIDE [Suspect]
     Active Substance: MAGNESIUM HYDROXIDE
     Dosage: 622.0 MG, Q12H
     Route: 065
  1007. MAGNESIUM HYDROXIDE [Suspect]
     Active Substance: MAGNESIUM HYDROXIDE
     Dosage: 622 MG, BID
     Route: 065
  1008. MAGNESIUM HYDROXIDE [Suspect]
     Active Substance: MAGNESIUM HYDROXIDE
     Route: 065
  1009. MAGNESIUM HYDROXIDE [Suspect]
     Active Substance: MAGNESIUM HYDROXIDE
     Dosage: UNK
     Route: 065
  1010. MAGNESIUM HYDROXIDE [Suspect]
     Active Substance: MAGNESIUM HYDROXIDE
     Route: 065
  1011. MAGNESIUM HYDROXIDE [Suspect]
     Active Substance: MAGNESIUM HYDROXIDE
     Route: 065
  1012. MORPHINE [Suspect]
     Active Substance: MORPHINE
     Indication: Pain
     Route: 065
  1013. MORPHINE SULFATE [Suspect]
     Active Substance: MORPHINE SULFATE
     Indication: Product used for unknown indication
     Dosage: 1 DF, QD
     Route: 065
  1014. MORPHINE SULFATE [Suspect]
     Active Substance: MORPHINE SULFATE
     Dosage: 1 DF, QD
     Route: 065
  1015. MORPHINE SULFATE [Suspect]
     Active Substance: MORPHINE SULFATE
     Indication: Fibromyalgia
     Dosage: 10 MG, QD
     Route: 030
  1016. MORPHINE SULFATE [Suspect]
     Active Substance: MORPHINE SULFATE
     Dosage: 10 MG, QD
     Route: 065
  1017. MORPHINE SULFATE [Suspect]
     Active Substance: MORPHINE SULFATE
     Dosage: 10 MG, QD
     Route: 065
  1018. MORPHINE SULFATE [Suspect]
     Active Substance: MORPHINE SULFATE
     Dosage: 100 MG, QD
     Route: 065
  1019. MORPHINE SULFATE [Suspect]
     Active Substance: MORPHINE SULFATE
     Dosage: 100 MG, QD
     Route: 065
  1020. MORPHINE SULFATE [Suspect]
     Active Substance: MORPHINE SULFATE
     Indication: Chest pain
     Dosage: 2 DF, QD
     Route: 065
  1021. MORPHINE SULFATE [Suspect]
     Active Substance: MORPHINE SULFATE
     Dosage: 2 DF, QD
     Route: 065
  1022. MORPHINE SULFATE [Suspect]
     Active Substance: MORPHINE SULFATE
     Dosage: 2 DF, QD
     Route: 065
  1023. MORPHINE SULFATE [Suspect]
     Active Substance: MORPHINE SULFATE
     Dosage: 20 MG, QD
     Route: 030
  1024. MORPHINE SULFATE [Suspect]
     Active Substance: MORPHINE SULFATE
     Indication: Pain
     Route: 065
  1025. MORPHINE SULFATE [Suspect]
     Active Substance: MORPHINE SULFATE
     Route: 065
  1026. MAGNESIUM ALUMINUM SILICATE [Suspect]
     Active Substance: MAGNESIUM ALUMINUM SILICATE
     Indication: Constipation
     Route: 065
  1027. NITROGLYCERIN [Suspect]
     Active Substance: NITROGLYCERIN
     Dosage: 0.4 MG, QD
     Route: 065
  1028. NITROGLYCERIN [Suspect]
     Active Substance: NITROGLYCERIN
     Dosage: 0.4 MG, QD
     Route: 065
  1029. NITROGLYCERIN [Suspect]
     Active Substance: NITROGLYCERIN
     Route: 065
  1030. NITROGLYCERIN [Suspect]
     Active Substance: NITROGLYCERIN
     Route: 065
  1031. NITROGLYCERIN [Suspect]
     Active Substance: NITROGLYCERIN
     Route: 065
  1032. NITROGLYCERIN [Suspect]
     Active Substance: NITROGLYCERIN
     Indication: Product used for unknown indication
     Dosage: 0.6 MG, QD
     Route: 061
  1033. NITROGLYCERIN [Suspect]
     Active Substance: NITROGLYCERIN
     Dosage: 0.6 MG, QD
     Route: 061
  1034. NITROGLYCERIN [Suspect]
     Active Substance: NITROGLYCERIN
     Indication: Coronary artery disease
     Dosage: 0.6 MG, QD
     Route: 065
  1035. NITROGLYCERIN [Suspect]
     Active Substance: NITROGLYCERIN
     Dosage: 0.6 MG, QD
     Route: 065
  1036. NITROGLYCERIN [Suspect]
     Active Substance: NITROGLYCERIN
     Dosage: 0.6 MG, QD
     Route: 065
  1037. NITROGLYCERIN [Suspect]
     Active Substance: NITROGLYCERIN
     Dosage: 0.6 MG, QD
     Route: 065
  1038. NITROGLYCERIN [Suspect]
     Active Substance: NITROGLYCERIN
     Dosage: 0.6 MG, QD
     Route: 065
  1039. NITROGLYCERIN [Suspect]
     Active Substance: NITROGLYCERIN
     Route: 065
  1040. NITROGLYCERIN [Suspect]
     Active Substance: NITROGLYCERIN
     Route: 065
  1041. NITROGLYCERIN [Suspect]
     Active Substance: NITROGLYCERIN
     Route: 065
  1042. NITROGLYCERIN [Suspect]
     Active Substance: NITROGLYCERIN
     Dosage: 1 DF, QD
     Route: 061
  1043. NITROGLYCERIN [Suspect]
     Active Substance: NITROGLYCERIN
     Dosage: 1 DF, QD
     Route: 065
  1044. NITROGLYCERIN [Suspect]
     Active Substance: NITROGLYCERIN
     Dosage: 1 DF, QD
     Route: 065
  1045. NITROGLYCERIN [Suspect]
     Active Substance: NITROGLYCERIN
     Dosage: 1 DF, QD
     Route: 065
  1046. NITROGLYCERIN [Suspect]
     Active Substance: NITROGLYCERIN
     Dosage: 1 DF, QD
     Route: 065
  1047. NITROGLYCERIN [Suspect]
     Active Substance: NITROGLYCERIN
     Indication: Chest pain
     Dosage: 1.0 DF, QD
     Route: 065
  1048. NITROGLYCERIN [Suspect]
     Active Substance: NITROGLYCERIN
     Indication: Angina pectoris
     Route: 065
  1049. NITROGLYCERIN [Suspect]
     Active Substance: NITROGLYCERIN
     Indication: Hypertension
     Route: 065
  1050. NITROGLYCERIN [Suspect]
     Active Substance: NITROGLYCERIN
     Route: 065
  1051. NITROGLYCERIN [Suspect]
     Active Substance: NITROGLYCERIN
     Route: 065
  1052. NITROGLYCERIN [Suspect]
     Active Substance: NITROGLYCERIN
     Route: 065
  1053. NITROGLYCERIN [Suspect]
     Active Substance: NITROGLYCERIN
     Route: 065
  1054. NITROGLYCERIN [Suspect]
     Active Substance: NITROGLYCERIN
     Route: 065
  1055. NITROGLYCERIN [Suspect]
     Active Substance: NITROGLYCERIN
     Route: 065
  1056. NITROGLYCERIN [Suspect]
     Active Substance: NITROGLYCERIN
     Route: 065
  1057. NITROGLYCERIN [Suspect]
     Active Substance: NITROGLYCERIN
     Route: 065
  1058. NITROGLYCERIN [Suspect]
     Active Substance: NITROGLYCERIN
     Route: 065
  1059. OMEPRAZOLE [Suspect]
     Active Substance: OMEPRAZOLE
     Indication: Coronary artery disease
     Dosage: 20 MG, QD
     Route: 065
  1060. OMEPRAZOLE [Suspect]
     Active Substance: OMEPRAZOLE
     Dosage: 20 MG, PRN
     Route: 065
  1061. OMEPRAZOLE [Suspect]
     Active Substance: OMEPRAZOLE
     Dosage: 20 MG, UNK
     Route: 065
  1062. OMEPRAZOLE [Suspect]
     Active Substance: OMEPRAZOLE
     Dosage: 20 MG, UNK
     Route: 065
  1063. OMEPRAZOLE [Suspect]
     Active Substance: OMEPRAZOLE
     Indication: Duodenal ulcer
     Dosage: 20.0 MG, QD
     Route: 048
  1064. OMEPRAZOLE [Suspect]
     Active Substance: OMEPRAZOLE
     Indication: Hypertension
     Dosage: 20 MG, Q12H
     Route: 048
  1065. OMEPRAZOLE [Suspect]
     Active Substance: OMEPRAZOLE
     Indication: Small intestine carcinoma
     Dosage: 20 MG, Q12H
     Route: 048
  1066. OMEPRAZOLE [Suspect]
     Active Substance: OMEPRAZOLE
     Indication: Angina pectoris
     Dosage: 20 MG, BID
     Route: 048
  1067. OMEPRAZOLE [Suspect]
     Active Substance: OMEPRAZOLE
     Route: 065
  1068. OMEPRAZOLE [Suspect]
     Active Substance: OMEPRAZOLE
     Route: 048
  1069. OMEPRAZOLE [Suspect]
     Active Substance: OMEPRAZOLE
     Route: 048
  1070. OMEPRAZOLE [Suspect]
     Active Substance: OMEPRAZOLE
     Route: 048
  1071. OMEPRAZOLE [Suspect]
     Active Substance: OMEPRAZOLE
     Indication: Chest pain
     Route: 065
  1072. OMEPRAZOLE MAGNESIUM [Suspect]
     Active Substance: OMEPRAZOLE MAGNESIUM
     Indication: Duodenal ulcer
     Dosage: 20.0 MG, BID
     Route: 048
  1073. OMEPRAZOLE MAGNESIUM [Suspect]
     Active Substance: OMEPRAZOLE MAGNESIUM
     Dosage: 40 MG, QD;
     Route: 065
  1074. OMEPRAZOLE MAGNESIUM [Suspect]
     Active Substance: OMEPRAZOLE MAGNESIUM
     Route: 065
  1075. OMEPRAZOLE MAGNESIUM [Suspect]
     Active Substance: OMEPRAZOLE MAGNESIUM
     Route: 065
  1076. OXAZEPAM [Suspect]
     Active Substance: OXAZEPAM
     Dosage: 15 MG, QD
     Route: 065
  1077. OXAZEPAM [Suspect]
     Active Substance: OXAZEPAM
     Indication: Angina pectoris
     Dosage: 15.0 MG, QD
     Route: 065
  1078. OXAZEPAM [Suspect]
     Active Substance: OXAZEPAM
     Indication: Coronary artery disease
     Dosage: 15.0 MG, QD
     Route: 065
  1079. OXAZEPAM [Suspect]
     Active Substance: OXAZEPAM
     Dosage: 15.0 MG, QD
     Route: 065
  1080. OXAZEPAM [Suspect]
     Active Substance: OXAZEPAM
     Dosage: 15.0 MG, QD
     Route: 065
  1081. OXAZEPAM [Suspect]
     Active Substance: OXAZEPAM
     Indication: Hypertension
     Dosage: 20 MG, QD
     Route: 065
  1082. OXAZEPAM [Suspect]
     Active Substance: OXAZEPAM
     Dosage: 20 MG, QD
     Route: 065
  1083. OXAZEPAM [Suspect]
     Active Substance: OXAZEPAM
     Dosage: 20 MG, QD
     Route: 065
  1084. OXAZEPAM [Suspect]
     Active Substance: OXAZEPAM
     Dosage: 20 MG, QD
     Route: 065
  1085. OXAZEPAM [Suspect]
     Active Substance: OXAZEPAM
     Indication: Product used for unknown indication
     Dosage: 20.0 MG, QD
     Route: 048
  1086. OXAZEPAM [Suspect]
     Active Substance: OXAZEPAM
     Indication: Duodenal ulcer
     Dosage: 40 MG, QD
     Route: 048
  1087. OXAZEPAM [Suspect]
     Active Substance: OXAZEPAM
     Dosage: 40 MG, QD
     Route: 065
  1088. OXAZEPAM [Suspect]
     Active Substance: OXAZEPAM
     Dosage: 40 MG, QD
     Route: 065
  1089. OXAZEPAM [Suspect]
     Active Substance: OXAZEPAM
     Dosage: 40 MG, QD
     Route: 065
  1090. OXAZEPAM [Suspect]
     Active Substance: OXAZEPAM
     Indication: Insomnia
     Dosage: 40.0 MG, QD
     Route: 065
  1091. OXAZEPAM [Suspect]
     Active Substance: OXAZEPAM
     Route: 065
  1092. OXAZEPAM [Suspect]
     Active Substance: OXAZEPAM
     Route: 065
  1093. OXCARBAZEPINE [Suspect]
     Active Substance: OXCARBAZEPINE
     Indication: Product used for unknown indication
     Route: 065
  1094. OXCARBAZEPINE [Suspect]
     Active Substance: OXCARBAZEPINE
     Route: 065
  1095. OXYMORPHONE HYDROCHLORIDE [Suspect]
     Active Substance: OXYMORPHONE HYDROCHLORIDE
     Indication: Product used for unknown indication
     Route: 065
  1096. MORPHINE SULFATE [Suspect]
     Active Substance: MORPHINE SULFATE
     Indication: Fibromyalgia
     Route: 065
  1097. MORPHINE SULFATE [Suspect]
     Active Substance: MORPHINE SULFATE
     Indication: Pain
     Route: 065
  1098. MORPHINE SULFATE [Suspect]
     Active Substance: MORPHINE SULFATE
     Route: 065
  1099. PAPAVERINE [Suspect]
     Active Substance: PAPAVERINE
     Indication: Coronary artery disease
     Dosage: 6.0 MG, QD
     Route: 061
  1100. PAPAVERINE [Suspect]
     Active Substance: PAPAVERINE
     Indication: Angina pectoris
     Route: 065
  1101. PAPAVERINE [Suspect]
     Active Substance: PAPAVERINE
     Indication: Chest pain
     Route: 065
  1102. ACETAMINOPHEN\CAFFEINE [Suspect]
     Active Substance: ACETAMINOPHEN\CAFFEINE
     Indication: Chronic obstructive pulmonary disease
     Dosage: 50 MG, QD
     Route: 065
  1103. ACETAMINOPHEN\CAFFEINE [Suspect]
     Active Substance: ACETAMINOPHEN\CAFFEINE
     Indication: Cerebrovascular accident
     Dosage: 60 MG, QD
     Route: 065
  1104. ACETAMINOPHEN\CAFFEINE [Suspect]
     Active Substance: ACETAMINOPHEN\CAFFEINE
     Indication: Chest pain
     Dosage: 650 MG, QD
     Route: 065
  1105. ACETAMINOPHEN\CAFFEINE [Suspect]
     Active Substance: ACETAMINOPHEN\CAFFEINE
     Indication: Angina pectoris
     Route: 065
  1106. ACETAMINOPHEN\CAFFEINE [Suspect]
     Active Substance: ACETAMINOPHEN\CAFFEINE
     Indication: Coronary artery disease
     Route: 065
  1107. ACETAMINOPHEN\CAFFEINE [Suspect]
     Active Substance: ACETAMINOPHEN\CAFFEINE
     Indication: Hypertension
     Route: 065
  1108. ACETAMINOPHEN\CAFFEINE [Suspect]
     Active Substance: ACETAMINOPHEN\CAFFEINE
     Indication: Radioactive iodine therapy
     Route: 065
  1109. ACETAMINOPHEN\CAFFEINE [Suspect]
     Active Substance: ACETAMINOPHEN\CAFFEINE
     Indication: Pain
  1110. GALANTAMINE HYDROBROMIDE [Suspect]
     Active Substance: GALANTAMINE HYDROBROMIDE
     Indication: Dementia
     Dosage: 16.0 MG, QD CAPSULE, EXTENDED RELEASE
     Route: 065
  1111. PERPHENAZINE [Suspect]
     Active Substance: PERPHENAZINE
     Indication: Insomnia
     Dosage: 75 MG, QD
     Route: 065
  1112. PERSANTINE [Suspect]
     Active Substance: DIPYRIDAMOLE
     Indication: Product used for unknown indication
     Dosage: 1 DF, BID
     Route: 065
  1113. PERSANTINE [Suspect]
     Active Substance: DIPYRIDAMOLE
     Dosage: 1 DF, BID
     Route: 065
  1114. PERSANTINE [Suspect]
     Active Substance: DIPYRIDAMOLE
     Indication: Cerebrovascular accident
     Dosage: 2 DF, QD
     Route: 065
  1115. PERSANTINE [Suspect]
     Active Substance: DIPYRIDAMOLE
     Dosage: 2 DF, QD
     Route: 065
  1116. PERSANTINE [Suspect]
     Active Substance: DIPYRIDAMOLE
     Route: 065
  1117. PERSANTINE [Suspect]
     Active Substance: DIPYRIDAMOLE
     Route: 065
  1118. PERSANTINE [Suspect]
     Active Substance: DIPYRIDAMOLE
     Route: 065
  1119. PERSANTINE [Suspect]
     Active Substance: DIPYRIDAMOLE
     Route: 065
  1120. PHENOBARBITAL [Suspect]
     Active Substance: PHENOBARBITAL
     Indication: Chest pain
     Dosage: 6.0 MG, QD
     Route: 061
  1121. PHENOBARBITAL [Suspect]
     Active Substance: PHENOBARBITAL
     Indication: Angina pectoris
     Route: 065
  1122. PHENOBARBITAL [Suspect]
     Active Substance: PHENOBARBITAL
     Indication: Coronary artery disease
     Route: 065
  1123. PHENOLPHTHALEIN [Suspect]
     Active Substance: PHENOLPHTHALEIN
     Indication: Pain
     Route: 065
  1124. ANHYDROUS CITRIC ACID\MAGNESIUM OXIDE\SODIUM PICOSULFATE [Suspect]
     Active Substance: ANHYDROUS CITRIC ACID\MAGNESIUM OXIDE\SODIUM PICOSULFATE
     Indication: Constipation
     Route: 065
  1125. HERBALS\PLANTAGO OVATA LEAF [Suspect]
     Active Substance: HERBALS\PLANTAGO OVATA LEAF
     Route: 065
  1126. HERBALS\PLANTAGO OVATA LEAF [Suspect]
     Active Substance: HERBALS\PLANTAGO OVATA LEAF
     Indication: Constipation
     Route: 065
  1127. POLYSORBATE 20 [Suspect]
     Active Substance: POLYSORBATE 20
     Indication: Insomnia
     Route: 065
  1128. POLYSORBATE 40 [Suspect]
     Active Substance: POLYSORBATE 40
     Indication: Insomnia
     Route: 065
  1129. POLYSORBATE 85 [Suspect]
     Active Substance: POLYSORBATE 85
     Indication: Insomnia
     Dosage: UNK, QD
     Route: 065
  1130. POLYSORBATE 85 [Suspect]
     Active Substance: POLYSORBATE 85
     Indication: Product used for unknown indication
     Route: 065
  1131. POTASSIUM SORBATE [Suspect]
     Active Substance: POTASSIUM SORBATE
     Indication: Product used for unknown indication
     Route: 065
  1132. POTASSIUM SORBATE [Suspect]
     Active Substance: POTASSIUM SORBATE
     Route: 065
  1133. ACETAMINOPHEN [Suspect]
     Active Substance: ACETAMINOPHEN
     Indication: Pain
     Route: 065
  1134. ACETAMINOPHEN [Suspect]
     Active Substance: ACETAMINOPHEN
     Route: 065
  1135. DOCUSATE SODIUM\PHENOLPHTHALEIN [Suspect]
     Active Substance: DOCUSATE SODIUM\PHENOLPHTHALEIN
     Indication: Pain
     Route: 065
  1136. PHENYLEPHRINE HYDROCHLORIDE [Suspect]
     Active Substance: PHENYLEPHRINE HYDROCHLORIDE
     Indication: Cerebrovascular accident
     Route: 065
  1137. PHENYLEPHRINE HYDROCHLORIDE [Suspect]
     Active Substance: PHENYLEPHRINE HYDROCHLORIDE
     Indication: Pain
     Route: 065
  1138. PHENYLEPHRINE HYDROCHLORIDE [Suspect]
     Active Substance: PHENYLEPHRINE HYDROCHLORIDE
     Route: 065
  1139. PICOLAX (ANHYDROUS CITRIC ACID\MAGNESIUM OXIDE\SODIUM PICOSULFATE) [Suspect]
     Active Substance: ANHYDROUS CITRIC ACID\MAGNESIUM OXIDE\SODIUM PICOSULFATE
     Indication: Constipation
     Route: 065
  1140. POLYSORBATE 80 [Suspect]
     Active Substance: POLYSORBATE 80
     Indication: Insomnia
     Route: 065
  1141. QUINAPRIL [Suspect]
     Active Substance: QUINAPRIL
     Indication: Angina pectoris
     Route: 065
  1142. QUINAPRIL [Suspect]
     Active Substance: QUINAPRIL
     Indication: Hypertension
     Route: 065
  1143. QUINAPRIL [Suspect]
     Active Substance: QUINAPRIL
     Route: 065
  1144. QUINAPRIL [Suspect]
     Active Substance: QUINAPRIL
     Route: 065
  1145. QUINAPRIL [Suspect]
     Active Substance: QUINAPRIL
     Indication: Coronary artery dilatation
     Route: 065
  1146. QUINAPRIL [Suspect]
     Active Substance: QUINAPRIL
     Route: 065
  1147. QUINAPRIL [Suspect]
     Active Substance: QUINAPRIL
     Indication: Angina pectoris
     Route: 065
  1148. QUINAPRIL [Suspect]
     Active Substance: QUINAPRIL
     Indication: Chest pain
     Route: 065
  1149. QUINAPRIL [Suspect]
     Active Substance: QUINAPRIL
     Indication: Coronary artery disease
     Route: 065
  1150. QUINAPRIL [Suspect]
     Active Substance: QUINAPRIL
     Route: 065
  1151. QUINAPRIL [Suspect]
     Active Substance: QUINAPRIL
     Indication: Cerebrovascular accident
     Route: 065
  1152. QUINAPRIL [Suspect]
     Active Substance: QUINAPRIL
     Indication: Fibromyalgia
     Route: 065
  1153. QUINAPRIL [Suspect]
     Active Substance: QUINAPRIL
     Indication: Insomnia
     Route: 065
  1154. QUINAPRIL [Suspect]
     Active Substance: QUINAPRIL
     Indication: Pain
     Route: 065
  1155. QUINAPRIL [Suspect]
     Active Substance: QUINAPRIL
     Indication: Seizure
     Route: 065
  1156. QUINAPRIL [Suspect]
     Active Substance: QUINAPRIL
     Indication: Seizure prophylaxis
     Route: 065
  1157. QUINAPRIL HYDROCHLORIDE [Suspect]
     Active Substance: QUINAPRIL HYDROCHLORIDE
     Indication: Cerebrovascular accident
     Dosage: 20 MG, QD
     Route: 065
  1158. QUINAPRIL HYDROCHLORIDE [Suspect]
     Active Substance: QUINAPRIL HYDROCHLORIDE
     Indication: Coronary artery disease
     Dosage: 20 MG, QD
     Route: 065
  1159. QUINAPRIL HYDROCHLORIDE [Suspect]
     Active Substance: QUINAPRIL HYDROCHLORIDE
     Indication: Pain
     Dosage: 20 MG, QD
     Route: 065
  1160. QUINAPRIL HYDROCHLORIDE [Suspect]
     Active Substance: QUINAPRIL HYDROCHLORIDE
     Indication: Product used for unknown indication
     Dosage: 20 MG, QD
     Route: 065
  1161. QUINAPRIL HYDROCHLORIDE [Suspect]
     Active Substance: QUINAPRIL HYDROCHLORIDE
     Indication: Seizure
     Dosage: 20 MG, QD
     Route: 065
  1162. QUINAPRIL HYDROCHLORIDE [Suspect]
     Active Substance: QUINAPRIL HYDROCHLORIDE
     Dosage: 20 MG, QD
     Route: 065
  1163. QUINAPRIL HYDROCHLORIDE [Suspect]
     Active Substance: QUINAPRIL HYDROCHLORIDE
     Dosage: 20 MG, QD
     Route: 065
  1164. QUINAPRIL HYDROCHLORIDE [Suspect]
     Active Substance: QUINAPRIL HYDROCHLORIDE
     Dosage: 20 MG, QD
     Route: 065
  1165. QUINAPRIL HYDROCHLORIDE [Suspect]
     Active Substance: QUINAPRIL HYDROCHLORIDE
     Dosage: 20 MG, QD
     Route: 065
  1166. QUINAPRIL HYDROCHLORIDE [Suspect]
     Active Substance: QUINAPRIL HYDROCHLORIDE
     Dosage: 20 MG, QD
     Route: 065
  1167. QUINAPRIL HYDROCHLORIDE [Suspect]
     Active Substance: QUINAPRIL HYDROCHLORIDE
     Dosage: 20 MG, QD
     Route: 065
  1168. QUINAPRIL HYDROCHLORIDE [Suspect]
     Active Substance: QUINAPRIL HYDROCHLORIDE
     Dosage: 20 MG, QD
     Route: 065
  1169. QUINAPRIL HYDROCHLORIDE [Suspect]
     Active Substance: QUINAPRIL HYDROCHLORIDE
     Dosage: 20 MG, QD
     Route: 065
  1170. QUINAPRIL HYDROCHLORIDE [Suspect]
     Active Substance: QUINAPRIL HYDROCHLORIDE
     Indication: Coronary artery dilatation
     Dosage: 20.0 MG, QD
     Route: 065
  1171. QUINAPRIL HYDROCHLORIDE [Suspect]
     Active Substance: QUINAPRIL HYDROCHLORIDE
     Indication: Hypertension
     Dosage: 20.0 MG, QD
     Route: 065
  1172. QUINAPRIL HYDROCHLORIDE [Suspect]
     Active Substance: QUINAPRIL HYDROCHLORIDE
     Dosage: 200 MG, QID FILM COATED TABLET
     Route: 065
  1173. QUINAPRIL HYDROCHLORIDE [Suspect]
     Active Substance: QUINAPRIL HYDROCHLORIDE
     Indication: Angina pectoris
     Dosage: 40 MG, QD
     Route: 065
  1174. QUINAPRIL HYDROCHLORIDE [Suspect]
     Active Substance: QUINAPRIL HYDROCHLORIDE
     Indication: Seizure prophylaxis
     Dosage: 40 MG, QD
     Route: 065
  1175. QUINAPRIL HYDROCHLORIDE [Suspect]
     Active Substance: QUINAPRIL HYDROCHLORIDE
     Indication: Chest pain
     Dosage: 40 MG, QD FILM-COATED TABLET
     Route: 048
  1176. QUINAPRIL HYDROCHLORIDE [Suspect]
     Active Substance: QUINAPRIL HYDROCHLORIDE
     Indication: Insomnia
     Dosage: 40 MG, QD FILM-COATED TABLET
     Route: 048
  1177. QUINAPRIL HYDROCHLORIDE [Suspect]
     Active Substance: QUINAPRIL HYDROCHLORIDE
     Dosage: 40 MG, QD FILM-COATED TABLET
     Route: 048
  1178. QUINAPRIL HYDROCHLORIDE [Suspect]
     Active Substance: QUINAPRIL HYDROCHLORIDE
     Dosage: 40 MG, QD FILM-COATED TABLET
     Route: 048
  1179. QUINAPRIL HYDROCHLORIDE [Suspect]
     Active Substance: QUINAPRIL HYDROCHLORIDE
     Dosage: 40 MG, QD FILM-COATED TABLET
     Route: 048
  1180. QUINAPRIL HYDROCHLORIDE [Suspect]
     Active Substance: QUINAPRIL HYDROCHLORIDE
     Dosage: 40 MG, QD FILM-COATED TABLET
     Route: 048
  1181. QUINAPRIL HYDROCHLORIDE [Suspect]
     Active Substance: QUINAPRIL HYDROCHLORIDE
     Dosage: 40.0 MG, QD
     Route: 065
  1182. QUINAPRIL HYDROCHLORIDE [Suspect]
     Active Substance: QUINAPRIL HYDROCHLORIDE
     Dosage: 40.0 MG, QD
     Route: 065
  1183. QUINAPRIL HYDROCHLORIDE [Suspect]
     Active Substance: QUINAPRIL HYDROCHLORIDE
     Dosage: 40.0 MG, QD
     Route: 065
  1184. QUINAPRIL HYDROCHLORIDE [Suspect]
     Active Substance: QUINAPRIL HYDROCHLORIDE
     Dosage: 40.0 MG, QD
     Route: 065
  1185. QUINAPRIL HYDROCHLORIDE [Suspect]
     Active Substance: QUINAPRIL HYDROCHLORIDE
     Dosage: 40.0 MG, QD
     Route: 065
  1186. QUINAPRIL HYDROCHLORIDE [Suspect]
     Active Substance: QUINAPRIL HYDROCHLORIDE
     Dosage: 40.0 MG, QD
     Route: 065
  1187. QUINAPRIL HYDROCHLORIDE [Suspect]
     Active Substance: QUINAPRIL HYDROCHLORIDE
     Indication: Fibromyalgia
     Dosage: 40 MG, QID
     Route: 065
  1188. QUININE [Suspect]
     Active Substance: QUININE
     Indication: Pain
     Route: 065
  1189. ROSUVASTATIN [Suspect]
     Active Substance: ROSUVASTATIN
     Route: 048
  1190. ROSUVASTATIN [Suspect]
     Active Substance: ROSUVASTATIN
     Route: 048
  1191. ROSUVASTATIN [Suspect]
     Active Substance: ROSUVASTATIN
     Indication: Hypertension
     Dosage: 20 MG, BID
     Route: 048
  1192. ROSUVASTATIN [Suspect]
     Active Substance: ROSUVASTATIN
     Indication: Angina pectoris
     Dosage: 20 MG, BID
     Route: 048
  1193. ROSUVASTATIN [Suspect]
     Active Substance: ROSUVASTATIN
     Indication: Cerebrovascular accident
     Dosage: 20 MG, BID
     Route: 048
  1194. ROSUVASTATIN [Suspect]
     Active Substance: ROSUVASTATIN
     Indication: Chest pain
     Dosage: 20 MG, BID
     Route: 048
  1195. ROSUVASTATIN [Suspect]
     Active Substance: ROSUVASTATIN
     Indication: Coronary artery disease
     Dosage: 20 MG, BID
     Route: 048
  1196. ROSUVASTATIN [Suspect]
     Active Substance: ROSUVASTATIN
     Dosage: 20 MG, BID
     Route: 048
  1197. ROSUVASTATIN [Suspect]
     Active Substance: ROSUVASTATIN
     Dosage: 20 MG, BID
     Route: 065
  1198. ROSUVASTATIN [Suspect]
     Active Substance: ROSUVASTATIN
     Dosage: 20 MG, BID
     Route: 065
  1199. ROSUVASTATIN [Suspect]
     Active Substance: ROSUVASTATIN
     Dosage: 20 MG, BID
     Route: 065
  1200. ROSUVASTATIN [Suspect]
     Active Substance: ROSUVASTATIN
     Dosage: 20 MG, Q12H
     Route: 048
  1201. ROSUVASTATIN [Suspect]
     Active Substance: ROSUVASTATIN
     Indication: Insomnia
     Dosage: 200 MG, BID
     Route: 048
  1202. ROSUVASTATIN [Suspect]
     Active Substance: ROSUVASTATIN
     Dosage: 200 MG, BID
     Route: 065
  1203. ROSUVASTATIN [Suspect]
     Active Substance: ROSUVASTATIN
     Indication: Chronic obstructive pulmonary disease
     Dosage: 40 MG, QD
     Route: 048
  1204. ROSUVASTATIN [Suspect]
     Active Substance: ROSUVASTATIN
     Dosage: 40 MG, QD
     Route: 048
  1205. ROSUVASTATIN [Suspect]
     Active Substance: ROSUVASTATIN
     Dosage: 40 MG, QD
     Route: 048
  1206. ROSUVASTATIN [Suspect]
     Active Substance: ROSUVASTATIN
     Dosage: 40 MG, QD
     Route: 048
  1207. ROSUVASTATIN [Suspect]
     Active Substance: ROSUVASTATIN
     Route: 058
  1208. ROSUVASTATIN [Suspect]
     Active Substance: ROSUVASTATIN
     Route: 065
  1209. ROSUVASTATIN CALCIUM [Suspect]
     Active Substance: ROSUVASTATIN CALCIUM
     Indication: Chest pain
     Dosage: 10 MG, QD
     Route: 065
  1210. ROSUVASTATIN CALCIUM [Suspect]
     Active Substance: ROSUVASTATIN CALCIUM
     Dosage: 10 MG, QD
     Route: 065
  1211. ROSUVASTATIN CALCIUM [Suspect]
     Active Substance: ROSUVASTATIN CALCIUM
     Dosage: 10 MG, QD
     Route: 065
  1212. ROSUVASTATIN CALCIUM [Suspect]
     Active Substance: ROSUVASTATIN CALCIUM
     Dosage: 10 MG, QD
     Route: 065
  1213. ROSUVASTATIN CALCIUM [Suspect]
     Active Substance: ROSUVASTATIN CALCIUM
     Dosage: 10 MG, QD
     Route: 065
  1214. ROSUVASTATIN CALCIUM [Suspect]
     Active Substance: ROSUVASTATIN CALCIUM
     Dosage: 10 MG, QD
     Route: 065
  1215. ROSUVASTATIN CALCIUM [Suspect]
     Active Substance: ROSUVASTATIN CALCIUM
     Dosage: 10 MG, QD
     Route: 065
  1216. ROSUVASTATIN CALCIUM [Suspect]
     Active Substance: ROSUVASTATIN CALCIUM
     Dosage: 10 MG, QD
     Route: 065
  1217. ROSUVASTATIN CALCIUM [Suspect]
     Active Substance: ROSUVASTATIN CALCIUM
     Indication: Coronary artery disease
     Dosage: 20 MG, Q12H
     Route: 048
  1218. ROSUVASTATIN CALCIUM [Suspect]
     Active Substance: ROSUVASTATIN CALCIUM
     Dosage: 20 MG, Q12H
     Route: 048
  1219. ROSUVASTATIN CALCIUM [Suspect]
     Active Substance: ROSUVASTATIN CALCIUM
     Dosage: 20 MG, Q12H
     Route: 048
  1220. ROSUVASTATIN CALCIUM [Suspect]
     Active Substance: ROSUVASTATIN CALCIUM
     Dosage: 20 MG, Q12H
     Route: 048
  1221. ROSUVASTATIN CALCIUM [Suspect]
     Active Substance: ROSUVASTATIN CALCIUM
     Dosage: 20 MG, Q12H
     Route: 048
  1222. ROSUVASTATIN CALCIUM [Suspect]
     Active Substance: ROSUVASTATIN CALCIUM
     Dosage: 20 MG, Q12H
     Route: 048
  1223. ROSUVASTATIN CALCIUM [Suspect]
     Active Substance: ROSUVASTATIN CALCIUM
     Dosage: 20 MG, Q12H
     Route: 048
  1224. ROSUVASTATIN CALCIUM [Suspect]
     Active Substance: ROSUVASTATIN CALCIUM
     Dosage: 20 MG, Q12H
     Route: 048
  1225. ROSUVASTATIN CALCIUM [Suspect]
     Active Substance: ROSUVASTATIN CALCIUM
     Indication: Angina pectoris
     Route: 048
  1226. ROSUVASTATIN CALCIUM [Suspect]
     Active Substance: ROSUVASTATIN CALCIUM
     Indication: Hypertension
     Route: 048
  1227. ROSUVASTATIN CALCIUM [Suspect]
     Active Substance: ROSUVASTATIN CALCIUM
     Indication: Product used for unknown indication
     Route: 048
  1228. ROSUVASTATIN CALCIUM [Suspect]
     Active Substance: ROSUVASTATIN CALCIUM
     Route: 048
  1229. ROSUVASTATIN CALCIUM [Suspect]
     Active Substance: ROSUVASTATIN CALCIUM
     Route: 048
  1230. ROSUVASTATIN CALCIUM [Suspect]
     Active Substance: ROSUVASTATIN CALCIUM
     Route: 048
  1231. ROSUVASTATIN CALCIUM [Suspect]
     Active Substance: ROSUVASTATIN CALCIUM
     Route: 048
  1232. ROSUVASTATIN CALCIUM [Suspect]
     Active Substance: ROSUVASTATIN CALCIUM
     Route: 048
  1233. ROSUVASTATIN CALCIUM [Suspect]
     Active Substance: ROSUVASTATIN CALCIUM
     Route: 048
  1234. ROSUVASTATIN CALCIUM [Suspect]
     Active Substance: ROSUVASTATIN CALCIUM
     Route: 048
  1235. ROSUVASTATIN CALCIUM [Suspect]
     Active Substance: ROSUVASTATIN CALCIUM
     Route: 048
  1236. ROSUVASTATIN CALCIUM [Suspect]
     Active Substance: ROSUVASTATIN CALCIUM
     Route: 048
  1237. ROSUVASTATIN CALCIUM [Suspect]
     Active Substance: ROSUVASTATIN CALCIUM
     Route: 048
  1238. ROSUVASTATIN CALCIUM [Suspect]
     Active Substance: ROSUVASTATIN CALCIUM
     Route: 048
  1239. ROSUVASTATIN CALCIUM [Suspect]
     Active Substance: ROSUVASTATIN CALCIUM
     Route: 048
  1240. ROSUVASTATIN CALCIUM [Suspect]
     Active Substance: ROSUVASTATIN CALCIUM
     Indication: Cerebrovascular accident
     Route: 048
  1241. ROSUVASTATIN CALCIUM [Suspect]
     Active Substance: ROSUVASTATIN CALCIUM
     Indication: Chronic obstructive pulmonary disease
     Dosage: 200 MG, Q12H
     Route: 048
  1242. ROSUVASTATIN CALCIUM [Suspect]
     Active Substance: ROSUVASTATIN CALCIUM
     Indication: Insomnia
     Dosage: 200 MG, Q12H
     Route: 065
  1243. ROSUVASTATIN CALCIUM [Suspect]
     Active Substance: ROSUVASTATIN CALCIUM
     Dosage: 200 MG, Q12H
     Route: 065
  1244. ROSUVASTATIN CALCIUM [Suspect]
     Active Substance: ROSUVASTATIN CALCIUM
     Dosage: 200 MG, Q12H
     Route: 065
  1245. ROSUVASTATIN CALCIUM [Suspect]
     Active Substance: ROSUVASTATIN CALCIUM
     Dosage: 200 MG, Q12H
     Route: 065
  1246. ROSUVASTATIN CALCIUM [Suspect]
     Active Substance: ROSUVASTATIN CALCIUM
     Dosage: 200 MG, Q12H
     Route: 065
  1247. ROSUVASTATIN CALCIUM [Suspect]
     Active Substance: ROSUVASTATIN CALCIUM
     Dosage: 200 MG, Q12H
     Route: 065
  1248. ROSUVASTATIN CALCIUM [Suspect]
     Active Substance: ROSUVASTATIN CALCIUM
     Dosage: 200 MG, Q12H
     Route: 065
  1249. ROSUVASTATIN CALCIUM [Suspect]
     Active Substance: ROSUVASTATIN CALCIUM
     Dosage: 200 MG, Q12H
     Route: 065
  1250. ROSUVASTATIN CALCIUM [Suspect]
     Active Substance: ROSUVASTATIN CALCIUM
     Dosage: 200 MG, Q12H
     Route: 065
  1251. ROSUVASTATIN CALCIUM [Suspect]
     Active Substance: ROSUVASTATIN CALCIUM
     Dosage: 200 MG, Q12H
     Route: 065
  1252. ROSUVASTATIN CALCIUM [Suspect]
     Active Substance: ROSUVASTATIN CALCIUM
     Dosage: 200 MG, Q12H
     Route: 065
  1253. ROSUVASTATIN CALCIUM [Suspect]
     Active Substance: ROSUVASTATIN CALCIUM
     Dosage: 200 MG, Q12H
     Route: 065
  1254. ROSUVASTATIN CALCIUM [Suspect]
     Active Substance: ROSUVASTATIN CALCIUM
     Dosage: 200 MG, Q12H
     Route: 065
  1255. ROSUVASTATIN CALCIUM [Suspect]
     Active Substance: ROSUVASTATIN CALCIUM
     Dosage: 200 MG, Q12H
     Route: 065
  1256. ROSUVASTATIN CALCIUM [Suspect]
     Active Substance: ROSUVASTATIN CALCIUM
     Dosage: 200 MG, Q12H
     Route: 065
  1257. ROSUVASTATIN CALCIUM [Suspect]
     Active Substance: ROSUVASTATIN CALCIUM
     Dosage: 40 MG, Q12H
     Route: 065
  1258. ROSUVASTATIN CALCIUM [Suspect]
     Active Substance: ROSUVASTATIN CALCIUM
     Route: 048
  1259. ALBUTEROL [Suspect]
     Active Substance: ALBUTEROL
     Dosage: 100 MG, QD
     Route: 065
  1260. ALBUTEROL [Suspect]
     Active Substance: ALBUTEROL
     Dosage: 100 MG, QD
     Route: 065
  1261. ALBUTEROL [Suspect]
     Active Substance: ALBUTEROL
     Dosage: 100 MG, QD
     Route: 065
  1262. ALBUTEROL [Suspect]
     Active Substance: ALBUTEROL
     Dosage: 100 MG, QD
     Route: 065
  1263. ALBUTEROL [Suspect]
     Active Substance: ALBUTEROL
     Dosage: 100 MG, QD
     Route: 065
  1264. ALBUTEROL [Suspect]
     Active Substance: ALBUTEROL
     Indication: Constipation
     Route: 065
  1265. ALBUTEROL [Suspect]
     Active Substance: ALBUTEROL
     Dosage: 100 UG, QD
     Route: 055
  1266. ALBUTEROL [Suspect]
     Active Substance: ALBUTEROL
     Indication: Angina pectoris
     Dosage: 100 UG, QD
     Route: 065
  1267. ALBUTEROL [Suspect]
     Active Substance: ALBUTEROL
     Indication: Chest pain
     Dosage: 100 UG, QD
     Route: 065
  1268. ALBUTEROL [Suspect]
     Active Substance: ALBUTEROL
     Indication: Coronary artery disease
     Dosage: 100 UG, QD
     Route: 065
  1269. ALBUTEROL [Suspect]
     Active Substance: ALBUTEROL
     Dosage: 200 MG, Q6H
     Route: 065
  1270. ALBUTEROL [Suspect]
     Active Substance: ALBUTEROL
     Indication: Hypertension
     Route: 065
  1271. ALBUTEROL [Suspect]
     Active Substance: ALBUTEROL
     Dosage: 200 UG, QD
     Route: 065
  1272. ALBUTEROL [Suspect]
     Active Substance: ALBUTEROL
     Dosage: 200 UG, Q6H
     Route: 065
  1273. ALBUTEROL [Suspect]
     Active Substance: ALBUTEROL
     Dosage: 200 UG, Q6H
     Route: 065
  1274. ALBUTEROL [Suspect]
     Active Substance: ALBUTEROL
     Dosage: 200 UG, Q6H
     Route: 065
  1275. ALBUTEROL [Suspect]
     Active Substance: ALBUTEROL
     Dosage: 200 UG, Q6H
     Route: 065
  1276. ALBUTEROL [Suspect]
     Active Substance: ALBUTEROL
     Dosage: 200 UG, Q8H
     Route: 065
  1277. ALBUTEROL [Suspect]
     Active Substance: ALBUTEROL
     Dosage: 200 UG, Q8H
     Route: 065
  1278. ALBUTEROL [Suspect]
     Active Substance: ALBUTEROL
     Dosage: 200 UG, QID
     Route: 065
  1279. ALBUTEROL [Suspect]
     Active Substance: ALBUTEROL
     Route: 065
  1280. ALBUTEROL [Suspect]
     Active Substance: ALBUTEROL
     Indication: Coronary artery disease
     Route: 065
  1281. ALBUTEROL [Suspect]
     Active Substance: ALBUTEROL
     Route: 065
  1282. ALBUTEROL [Suspect]
     Active Substance: ALBUTEROL
     Dosage: 400 MG, QD
     Route: 065
  1283. ALBUTEROL [Suspect]
     Active Substance: ALBUTEROL
     Dosage: 400 MG, Q6H
     Route: 065
  1284. ALBUTEROL [Suspect]
     Active Substance: ALBUTEROL
     Indication: Product used for unknown indication
     Route: 065
  1285. ALBUTEROL [Suspect]
     Active Substance: ALBUTEROL
     Route: 065
  1286. ALBUTEROL [Suspect]
     Active Substance: ALBUTEROL
     Dosage: 400 UG, QD
     Route: 065
  1287. ALBUTEROL [Suspect]
     Active Substance: ALBUTEROL
     Indication: Chronic obstructive pulmonary disease
     Dosage: 400 UG, Q6H
     Route: 065
  1288. ALBUTEROL [Suspect]
     Active Substance: ALBUTEROL
     Dosage: 400 UG, Q6H
     Route: 065
  1289. ALBUTEROL [Suspect]
     Active Substance: ALBUTEROL
     Dosage: 400 UG, Q6H
     Route: 065
  1290. ALBUTEROL [Suspect]
     Active Substance: ALBUTEROL
     Route: 065
  1291. ALBUTEROL [Suspect]
     Active Substance: ALBUTEROL
     Route: 065
  1292. ALBUTEROL [Suspect]
     Active Substance: ALBUTEROL
     Route: 065
  1293. ALBUTEROL [Suspect]
     Active Substance: ALBUTEROL
     Route: 055
  1294. ALBUTEROL [Suspect]
     Active Substance: ALBUTEROL
     Indication: Hypertension
     Route: 065
  1295. ALBUTEROL [Suspect]
     Active Substance: ALBUTEROL
     Route: 065
  1296. ALBUTEROL [Suspect]
     Active Substance: ALBUTEROL
     Route: 065
  1297. ALBUTEROL [Suspect]
     Active Substance: ALBUTEROL
     Indication: Angina pectoris
  1298. ALBUTEROL [Suspect]
     Active Substance: ALBUTEROL
     Indication: Chest pain
  1299. ALBUTEROL [Suspect]
     Active Substance: ALBUTEROL
     Indication: Chronic obstructive pulmonary disease
  1300. ALBUTEROL SULFATE [Suspect]
     Active Substance: ALBUTEROL SULFATE
     Dosage: 100 MG, QD
     Route: 065
  1301. ALBUTEROL SULFATE [Suspect]
     Active Substance: ALBUTEROL SULFATE
     Dosage: 100 UG, QD
     Route: 065
  1302. ALBUTEROL SULFATE [Suspect]
     Active Substance: ALBUTEROL SULFATE
     Dosage: 200 MG, QID
     Route: 065
  1303. ALBUTEROL SULFATE [Suspect]
     Active Substance: ALBUTEROL SULFATE
     Dosage: 200 UG, Q6H
     Route: 065
  1304. ALBUTEROL SULFATE [Suspect]
     Active Substance: ALBUTEROL SULFATE
     Dosage: 400 MG, QID
     Route: 065
  1305. ALBUTEROL SULFATE [Suspect]
     Active Substance: ALBUTEROL SULFATE
     Indication: Product used for unknown indication
     Route: 065
  1306. SALICYLAMIDE [Suspect]
     Active Substance: SALICYLAMIDE
     Indication: Pain
     Route: 065
  1307. SENNOSIDES [Suspect]
     Active Substance: SENNOSIDES
     Indication: Product used for unknown indication
     Route: 065
  1308. SODIUM PICOSULFATE [Suspect]
     Active Substance: SODIUM PICOSULFATE
     Indication: Constipation
     Dosage: 2.0 DF, QD
     Route: 065
  1309. SODIUM PICOSULFATE [Suspect]
     Active Substance: SODIUM PICOSULFATE
     Dosage: 2 DF, Q24H
     Route: 065
  1310. SODIUM PICOSULFATE [Suspect]
     Active Substance: SODIUM PICOSULFATE
     Route: 065
  1311. SODIUM PICOSULFATE [Suspect]
     Active Substance: SODIUM PICOSULFATE
     Route: 065
  1312. SPIRIVA [Suspect]
     Active Substance: TIOTROPIUM BROMIDE MONOHYDRATE
     Indication: Asthma
     Dosage: 18.0 MG QD
     Route: 065
  1313. SPIRIVA [Suspect]
     Active Substance: TIOTROPIUM BROMIDE MONOHYDRATE
     Dosage: 18.0 MG, QD
     Route: 065
  1314. SPIRIVA [Suspect]
     Active Substance: TIOTROPIUM BROMIDE MONOHYDRATE
     Indication: Chronic obstructive pulmonary disease
     Route: 065
  1315. SPIRIVA [Suspect]
     Active Substance: TIOTROPIUM BROMIDE MONOHYDRATE
     Indication: Constipation
     Dosage: 18 UG, QD
     Route: 065
  1316. SPIRIVA [Suspect]
     Active Substance: TIOTROPIUM BROMIDE MONOHYDRATE
     Indication: Product used for unknown indication
     Dosage: 18 UG, QD
     Route: 065
  1317. SPIRIVA [Suspect]
     Active Substance: TIOTROPIUM BROMIDE MONOHYDRATE
     Dosage: 18 UG, QD
     Route: 065
  1318. SPIRIVA [Suspect]
     Active Substance: TIOTROPIUM BROMIDE MONOHYDRATE
     Route: 065
  1319. SPIRIVA [Suspect]
     Active Substance: TIOTROPIUM BROMIDE MONOHYDRATE
     Route: 065
  1320. SPIRIVA [Suspect]
     Active Substance: TIOTROPIUM BROMIDE MONOHYDRATE
     Route: 065
  1321. SPIRIVA [Suspect]
     Active Substance: TIOTROPIUM BROMIDE MONOHYDRATE
     Route: 065
  1322. SPIRIVA [Suspect]
     Active Substance: TIOTROPIUM BROMIDE MONOHYDRATE
     Route: 065
  1323. SENNOSIDES A AND B [Suspect]
     Active Substance: SENNOSIDES A AND B
     Indication: Pain
     Route: 065
  1324. TELMISARTAN [Suspect]
     Active Substance: TELMISARTAN
     Indication: Product used for unknown indication
     Route: 065
  1325. TIOTROPIUM BROMIDE [Suspect]
     Active Substance: TIOTROPIUM BROMIDE
     Indication: Constipation
     Route: 065
  1326. TIOTROPIUM BROMIDE [Suspect]
     Active Substance: TIOTROPIUM BROMIDE
     Indication: Product used for unknown indication
     Route: 065
  1327. TIOTROPIUM BROMIDE [Suspect]
     Active Substance: TIOTROPIUM BROMIDE
     Route: 065
  1328. TIOTROPIUM BROMIDE [Suspect]
     Active Substance: TIOTROPIUM BROMIDE
     Route: 065
  1329. TIOTROPIUM BROMIDE [Suspect]
     Active Substance: TIOTROPIUM BROMIDE
     Route: 048
  1330. TIOTROPIUM BROMIDE [Suspect]
     Active Substance: TIOTROPIUM BROMIDE
     Indication: Chronic obstructive pulmonary disease
     Route: 065
  1331. TIOTROPIUM BROMIDE MONOHYDRATE [Suspect]
     Active Substance: TIOTROPIUM BROMIDE MONOHYDRATE
     Indication: Chronic obstructive pulmonary disease
     Dosage: 18 MG, QD
     Route: 065
  1332. TIOTROPIUM BROMIDE MONOHYDRATE [Suspect]
     Active Substance: TIOTROPIUM BROMIDE MONOHYDRATE
     Indication: Asthma
     Route: 065
  1333. AMITRIPTYLINE HYDROCHLORIDE\PERPHENAZINE [Suspect]
     Active Substance: AMITRIPTYLINE HYDROCHLORIDE\PERPHENAZINE
     Indication: Insomnia
     Dosage: 50.0 MG, QD
     Route: 065
  1334. AMITRIPTYLINE HYDROCHLORIDE\PERPHENAZINE [Suspect]
     Active Substance: AMITRIPTYLINE HYDROCHLORIDE\PERPHENAZINE
     Dosage: 50.0 MG, QD
     Route: 065
  1335. AMITRIPTYLINE HYDROCHLORIDE\PERPHENAZINE [Suspect]
     Active Substance: AMITRIPTYLINE HYDROCHLORIDE\PERPHENAZINE
     Indication: Duodenal ulcer
     Dosage: 75 MG, QD
     Route: 065
  1336. AMITRIPTYLINE HYDROCHLORIDE\PERPHENAZINE [Suspect]
     Active Substance: AMITRIPTYLINE HYDROCHLORIDE\PERPHENAZINE
     Dosage: 75 MG, QD
     Route: 065
  1337. AMITRIPTYLINE HYDROCHLORIDE\PERPHENAZINE [Suspect]
     Active Substance: AMITRIPTYLINE HYDROCHLORIDE\PERPHENAZINE
     Indication: Angina pectoris
     Route: 065
  1338. AMITRIPTYLINE HYDROCHLORIDE\PERPHENAZINE [Suspect]
     Active Substance: AMITRIPTYLINE HYDROCHLORIDE\PERPHENAZINE
     Indication: Arthritis
     Route: 065
  1339. AMITRIPTYLINE HYDROCHLORIDE\PERPHENAZINE [Suspect]
     Active Substance: AMITRIPTYLINE HYDROCHLORIDE\PERPHENAZINE
     Indication: Chest pain
     Route: 065
  1340. AMITRIPTYLINE HYDROCHLORIDE\PERPHENAZINE [Suspect]
     Active Substance: AMITRIPTYLINE HYDROCHLORIDE\PERPHENAZINE
     Indication: Constipation
     Route: 065
  1341. AMITRIPTYLINE HYDROCHLORIDE\PERPHENAZINE [Suspect]
     Active Substance: AMITRIPTYLINE HYDROCHLORIDE\PERPHENAZINE
     Indication: Coronary artery disease
     Route: 065
  1342. AMITRIPTYLINE HYDROCHLORIDE\PERPHENAZINE [Suspect]
     Active Substance: AMITRIPTYLINE HYDROCHLORIDE\PERPHENAZINE
     Indication: Dementia
     Route: 065
  1343. AMITRIPTYLINE HYDROCHLORIDE\PERPHENAZINE [Suspect]
     Active Substance: AMITRIPTYLINE HYDROCHLORIDE\PERPHENAZINE
     Indication: Fibromyalgia
     Route: 065
  1344. AMITRIPTYLINE HYDROCHLORIDE\PERPHENAZINE [Suspect]
     Active Substance: AMITRIPTYLINE HYDROCHLORIDE\PERPHENAZINE
     Indication: Hypertension
     Route: 065
  1345. CRANBERRY [Suspect]
     Active Substance: CRANBERRY
     Dosage: 1500 MG, TID
     Route: 065
  1346. CRANBERRY [Suspect]
     Active Substance: CRANBERRY
     Dosage: 1500 MG, Q8H
     Route: 065
  1347. CRANBERRY [Suspect]
     Active Substance: CRANBERRY
     Indication: Balance disorder
     Dosage: 500 MG, Q8H
     Route: 065
  1348. CRANBERRY [Suspect]
     Active Substance: CRANBERRY
     Indication: Bladder disorder
     Dosage: 500 MG, Q8H
     Route: 065
  1349. CRANBERRY [Suspect]
     Active Substance: CRANBERRY
     Indication: Chronic obstructive pulmonary disease
     Dosage: 500 MG, Q8H
     Route: 065
  1350. CRANBERRY [Suspect]
     Active Substance: CRANBERRY
     Indication: Chronic obstructive pulmonary disease
     Dosage: 500 MG, Q8H
     Route: 065
  1351. CRANBERRY [Suspect]
     Active Substance: CRANBERRY
     Indication: Product used for unknown indication
     Dosage: 500 MG, Q8H
     Route: 065
  1352. CRANBERRY [Suspect]
     Active Substance: CRANBERRY
     Indication: Product used for unknown indication
     Dosage: 500.0 MG, Q8H
     Route: 065
  1353. CRANBERRY [Suspect]
     Active Substance: CRANBERRY
     Dosage: 500 MG, TID
     Route: 065
  1354. CRANBERRY [Suspect]
     Active Substance: CRANBERRY
     Dosage: 500 MG, TID
     Route: 065
  1355. CRANBERRY [Suspect]
     Active Substance: CRANBERRY
     Route: 065
  1356. CRANBERRY [Suspect]
     Active Substance: CRANBERRY
     Route: 065
  1357. CRANBERRY [Suspect]
     Active Substance: CRANBERRY
     Route: 065
  1358. CRANBERRY [Suspect]
     Active Substance: CRANBERRY
     Indication: Bladder disorder
     Route: 065
  1359. CRANBERRY [Suspect]
     Active Substance: CRANBERRY
     Route: 065
  1360. CRANBERRY [Suspect]
     Active Substance: CRANBERRY
     Indication: Bladder disorder
     Dosage: 500.0 MG, Q8H
     Route: 065
  1361. CRANBERRY [Suspect]
     Active Substance: CRANBERRY
     Indication: Product used for unknown indication
     Route: 065
  1362. CRANBERRY [Suspect]
     Active Substance: CRANBERRY
     Indication: Chronic obstructive pulmonary disease
     Route: 065
  1363. CRANBERRY [Suspect]
     Active Substance: CRANBERRY
     Indication: Bladder disorder
     Route: 065
  1364. CRANBERRY [Suspect]
     Active Substance: CRANBERRY
     Route: 065
  1365. ZINC [Suspect]
     Active Substance: ZINC
     Indication: Product used for unknown indication
     Route: 065
  1366. ACETAMINOPHEN [Concomitant]
     Active Substance: ACETAMINOPHEN
     Indication: Fibromyalgia
     Dosage: 650.0 MG, QD
     Route: 065
  1367. ACETAMINOPHEN [Concomitant]
     Active Substance: ACETAMINOPHEN
     Indication: Pain
     Dosage: 650.0 MG, QD
     Route: 065
  1368. ACETAMINOPHEN [Concomitant]
     Active Substance: ACETAMINOPHEN
     Dosage: 650.0 MG, QD
     Route: 065
  1369. ACETAMINOPHEN [Concomitant]
     Active Substance: ACETAMINOPHEN
     Indication: Product used for unknown indication
     Route: 065
  1370. ACETAMINOPHEN [Concomitant]
     Active Substance: ACETAMINOPHEN
     Route: 065
  1371. ACETAMINOPHEN [Concomitant]
     Active Substance: ACETAMINOPHEN
     Route: 065
  1372. ASPIRIN [Concomitant]
     Active Substance: ASPIRIN
     Indication: Product used for unknown indication
     Route: 016
  1373. ASPIRIN [Concomitant]
     Active Substance: ASPIRIN
     Indication: Product used for unknown indication
     Route: 065
  1374. CALCIUM ASCORBATE [Concomitant]
     Active Substance: CALCIUM ASCORBATE
     Indication: Product used for unknown indication
     Route: 065
  1375. DIETARY SUPPLEMENT [Concomitant]
     Active Substance: DIETARY SUPPLEMENT
     Indication: Product used for unknown indication
     Route: 065
  1376. DIETARY SUPPLEMENT [Concomitant]
     Active Substance: DIETARY SUPPLEMENT
     Indication: Product used for unknown indication
     Route: 065
  1377. CRANBERRY [Concomitant]
     Active Substance: CRANBERRY
     Route: 065
  1378. CRANBERRY [Concomitant]
     Active Substance: CRANBERRY
     Route: 065
  1379. CRANBERRY [Concomitant]
     Active Substance: CRANBERRY
     Indication: Bladder disorder
     Route: 065
  1380. CRANBERRY [Concomitant]
     Active Substance: CRANBERRY
     Indication: Product used for unknown indication
     Route: 065
  1381. CRANBERRY [Concomitant]
     Active Substance: CRANBERRY
     Route: 065
  1382. CRANBERRY [Concomitant]
     Active Substance: CRANBERRY
     Route: 065
  1383. CRANBERRY [Concomitant]
     Active Substance: CRANBERRY
     Indication: Product used for unknown indication
     Route: 065
  1384. DILTIAZEM [Concomitant]
     Active Substance: DILTIAZEM
     Indication: Product used for unknown indication
     Route: 065
  1385. GLYCERIN [Concomitant]
     Active Substance: GLYCERIN
     Indication: Product used for unknown indication
     Route: 065
  1386. PHOSPHORIC ACID [Concomitant]
     Active Substance: PHOSPHORIC ACID
     Indication: Product used for unknown indication
     Route: 065
  1387. PHOSPHORIC ACID [Concomitant]
     Active Substance: PHOSPHORIC ACID
     Indication: Product used for unknown indication
     Route: 065
  1388. HERBALS\PLANTAGO OVATA LEAF [Concomitant]
     Active Substance: HERBALS\PLANTAGO OVATA LEAF
     Dosage: 500 MG, Q8H
     Route: 065
  1389. HERBALS\PLANTAGO OVATA LEAF [Concomitant]
     Active Substance: HERBALS\PLANTAGO OVATA LEAF
     Indication: Constipation
     Route: 065
  1390. CALCIUM POLYCARBOPHIL [Concomitant]
     Active Substance: CALCIUM POLYCARBOPHIL
     Indication: Product used for unknown indication
     Route: 065
  1391. POTASSIUM [Concomitant]
     Active Substance: POTASSIUM
     Indication: Product used for unknown indication
     Route: 065
  1392. HERBALS\PLANTAGO OVATA SEED COAT [Concomitant]
     Active Substance: HERBALS\PLANTAGO OVATA SEED COAT
     Indication: Product used for unknown indication
     Route: 065
  1393. PYROPHOSPHORIC ACID [Concomitant]
     Active Substance: PYROPHOSPHORIC ACID
     Indication: Product used for unknown indication
     Route: 065
  1394. ALBUTEROL SULFATE [Concomitant]
     Active Substance: ALBUTEROL SULFATE
     Indication: Product used for unknown indication
     Route: 065
  1395. SODIUM BENZOATE [Concomitant]
     Active Substance: SODIUM BENZOATE
     Indication: Product used for unknown indication
     Route: 065
  1396. HERBALS [Concomitant]
     Active Substance: HERBALS
     Indication: Product used for unknown indication
     Route: 065
  1397. VITAMIN C [Concomitant]
     Active Substance: ASCORBIC ACID
     Indication: Product used for unknown indication
     Route: 065
  1398. VITAMIN C [Concomitant]
     Active Substance: ASCORBIC ACID
     Indication: Product used for unknown indication
     Route: 065
  1399. ZINC [Concomitant]
     Active Substance: ZINC
     Indication: Product used for unknown indication
     Route: 065
  1400. ZINC SALICYLATE [Concomitant]
     Active Substance: ZINC SALICYLATE
     Indication: Product used for unknown indication
     Route: 065

REACTIONS (39)
  - Balance disorder [Recovered/Resolved]
  - Blood calcium decreased [Recovered/Resolved]
  - Constipation [Recovered/Resolved]
  - Creatinine renal clearance decreased [Recovered/Resolved]
  - Depressed level of consciousness [Recovered/Resolved]
  - Hypotension [Recovered/Resolved]
  - Mobility decreased [Recovered/Resolved]
  - Orthostatic hypotension [Recovered/Resolved]
  - Pain [Recovered/Resolved]
  - Sedation [Recovered/Resolved]
  - Sedation complication [Recovered/Resolved]
  - Toxicity to various agents [Recovered/Resolved]
  - Multiple drug therapy [Recovered/Resolved]
  - Product use in unapproved indication [Recovered/Resolved]
  - Off label use [Recovered/Resolved]
  - Drug interaction [Recovered/Resolved]
  - Dyspnoea [Recovered/Resolved]
  - Drug abuse [Recovered/Resolved]
  - Renal function test abnormal [Recovered/Resolved]
  - Overdose [Recovered/Resolved]
  - Balance disorder [Recovered/Resolved]
  - Blood calcium decreased [Recovered/Resolved]
  - Constipation [Recovered/Resolved]
  - Creatinine renal clearance decreased [Recovered/Resolved]
  - Depressed level of consciousness [Recovered/Resolved]
  - Hypotension [Recovered/Resolved]
  - Mobility decreased [Recovered/Resolved]
  - Orthostatic hypotension [Recovered/Resolved]
  - Pain [Recovered/Resolved]
  - Sedation [Recovered/Resolved]
  - Sedation complication [Recovered/Resolved]
  - Toxicity to various agents [Recovered/Resolved]
  - Urticaria [Recovered/Resolved]
  - Urticaria [Recovered/Resolved]
  - Fall [Recovered/Resolved]
  - Cognitive disorder [Recovered/Resolved]
  - Creatinine renal clearance increased [Recovered/Resolved]
  - Dementia [Recovered/Resolved]
  - Bladder disorder [Recovered/Resolved]
